FAERS Safety Report 23639682 (Version 28)
Quarter: 2024Q4

REPORT INFORMATION
  Report Type: Spontaneous
  Country: GB (occurrence: GB)
  Receive Date: 20240316
  Receipt Date: 20241126
  Transmission Date: 20250115
  Serious: Yes (Death, Other)
  Sender: CELLTRION
  Company Number: GB-CELLTRION INC.-2021GB006804

PATIENT

DRUGS (1295)
  1. RITUXIMAB [Suspect]
     Active Substance: RITUXIMAB
     Indication: Diffuse large B-cell lymphoma
     Dosage: 600 MG/M2, EVERY 3 WEEKS / TOTAL VOLUME PRIOR AE 560 ML/DATE OF MOST RECENT DOSE PRIOR TO FIRST EPIS
     Route: 042
     Dates: start: 20201124
  2. RITUXIMAB [Suspect]
     Active Substance: RITUXIMAB
     Dosage: 375 MG/M2 / ADDITIONAL INFO: ROUTE:
     Route: 042
  3. RITUXIMAB [Suspect]
     Active Substance: RITUXIMAB
     Dosage: 375 MG/M2 / ADDITIONAL INFO: ROUTE:
     Route: 042
  4. RITUXIMAB [Suspect]
     Active Substance: RITUXIMAB
     Dosage: 375 MG/M2 / ADDITIONAL INFO: ROUTE:
     Route: 065
  5. RITUXIMAB [Suspect]
     Active Substance: RITUXIMAB
     Dosage: 375 MG/M2 / ADDITIONAL INFO: ROUTE:
     Route: 065
  6. RITUXIMAB [Suspect]
     Active Substance: RITUXIMAB
     Dosage: 1800 MG EVERY 3 WEEKS, 600 MG, TIW / ADDITIONAL INFO: ROUTE: /
     Route: 042
     Dates: start: 20210105, end: 20210216
  7. RITUXIMAB [Suspect]
     Active Substance: RITUXIMAB
     Dosage: 9 ML EVERY 3 WEEKS, 3 ML, TIW / ADDITIONAL INFO: ROUTE: / 3 MILLILITER, 3XW
     Route: 042
     Dates: start: 20210216, end: 20210216
  8. RITUXIMAB [Suspect]
     Active Substance: RITUXIMAB
     Dosage: 9 ML EVERY 3 WEEKS, 3 ML, TIW / ADDITIONAL INFO: ROUTE:
     Route: 042
     Dates: start: 20201221, end: 20201221
  9. RITUXIMAB [Suspect]
     Active Substance: RITUXIMAB
     Dosage: UNK / ADDITIONAL INFO: ROUTE:; ADDITIONAL INFO: ROUTE:UNKNOWN ROUTE:UNKNOWN ROUTE:UNKNOWN ROUTE:UNKN
     Route: 065
  10. RITUXIMAB [Suspect]
     Active Substance: RITUXIMAB
     Dosage: UNK / ADDITIONAL INFO: ROUTE:; ADDITIONAL INFO: ROUTE:UNKNOWN ROUTE:UNKNOWN ROUTE:UNKNOWN ROUTE:UNKN
     Route: 065
  11. RITUXIMAB [Suspect]
     Active Substance: RITUXIMAB
     Dosage: (TOTAL VOLUME: 560 ML) / ADDITIONAL INFO: ROUTE:
     Route: 042
     Dates: start: 20201215, end: 20201215
  12. RITUXIMAB [Suspect]
     Active Substance: RITUXIMAB
     Dosage: 600 MG/M2 / ADDITIONAL INFO: ROUTE:
     Route: 042
     Dates: start: 20210105, end: 20210105
  13. RITUXIMAB [Suspect]
     Active Substance: RITUXIMAB
     Dosage: 600 MG / ADDITIONAL INFO: ROUTE:
     Route: 042
     Dates: start: 20210126
  14. RITUXIMAB [Suspect]
     Active Substance: RITUXIMAB
     Dosage: 500 MG/M2 / ADDITIONAL INFO: ROUTE:
     Route: 042
     Dates: start: 20210216
  15. RITUXIMAB [Suspect]
     Active Substance: RITUXIMAB
     Dosage: 600 MG/M2 / ADDITIONAL INFO: ROUTE:
     Route: 042
     Dates: start: 20210309, end: 20210309
  16. RITUXIMAB [Suspect]
     Active Substance: RITUXIMAB
     Dosage: 3 ML, TIW; ADDITIONAL INFO: ROUTE:UNKNOWN ROUTE:UNKNOWN ROUTE:UNKNOWN ROUTE:UNKNOWN ROUTE:UNKNOWN RO
     Route: 065
     Dates: start: 20210216, end: 20210216
  17. RITUXIMAB [Suspect]
     Active Substance: RITUXIMAB
     Dosage: 3 ML, TIW / 3 MILLILITER, 3XW (3 ML, TIW)
     Route: 065
     Dates: start: 20210216, end: 20210216
  18. RITUXIMAB [Suspect]
     Active Substance: RITUXIMAB
     Dosage: 3 ML, TIW
     Route: 065
     Dates: start: 20210216, end: 20210216
  19. RITUXIMAB [Suspect]
     Active Substance: RITUXIMAB
     Dosage: 3 ML, TIW / 3 MILLILITER, 3XW (3 ML, TIW)
     Route: 065
     Dates: start: 20210216, end: 20210216
  20. RITUXIMAB [Suspect]
     Active Substance: RITUXIMAB
     Dosage: 3 ML, TIW
     Route: 065
     Dates: start: 20210216, end: 20210216
  21. RITUXIMAB [Suspect]
     Active Substance: RITUXIMAB
     Dosage: UNK (ADDITIONAL INFO: ROUTE:); ADDITIONAL INFO: ROUTE:UNKNOWN ROUTE:UNKNOWN ROUTE:UNKNOWN ROUTE:UNKN
     Route: 065
  22. RITUXIMAB [Suspect]
     Active Substance: RITUXIMAB
     Dosage: UNK; ADDITIONAL INFO: ROUTE:UNKNOWN ROUTE:UNKNOWN ROUTE:UNKNOWN ROUTE:UNKNOWN ROUTE:UNKNOWN ROUTE:UN
     Route: 065
  23. RITUXIMAB [Suspect]
     Active Substance: RITUXIMAB
     Dosage: 9 MG/M2, TOTAL VOLUME PRIOR AE 560 MLDATE OF MOST RECENT DOSE PRIOR TO FIRST EPISODE OF NEUTROPENIA
     Route: 050
     Dates: start: 20201124
  24. RITUXIMAB [Suspect]
     Active Substance: RITUXIMAB
     Dosage: UNK (ADDITIONAL INFO: ROUTE:); ADDITIONAL INFO: ROUTE:UNKNOWN ROUTE:UNKNOWN ROUTE:UNKNOWN ROUTE:UNKN
     Route: 065
  25. RITUXIMAB [Suspect]
     Active Substance: RITUXIMAB
     Dosage: UNK (ADDITIONAL INFO: ROUTE); ADDITIONAL INFO: ROUTE:UNKNOWN ROUTE:UNKNOWN ROUTE:UNKNOWN ROUTE:UNKNO
     Route: 065
  26. RITUXIMAB [Suspect]
     Active Substance: RITUXIMAB
     Dosage: 3 ML, TIW (DOSAGE TEXT: 3 ML, TIW, TIME INTERVAL: 0.33 WK) / 3 MILLILITER, 3XW (3 ML, TIW, TIME INTE
     Route: 065
     Dates: start: 20201221, end: 20201221
  27. RITUXIMAB [Suspect]
     Active Substance: RITUXIMAB
     Dosage: 3 ML, TIW (DOSAGE TEXT: 3 ML, TIW, TIME INTERVAL: 0.33 WK); ADDITIONAL INFO: ROUTE:UNKNOWN ROUTE:UNK
     Route: 065
     Dates: start: 20201221, end: 20201221
  28. RITUXIMAB [Suspect]
     Active Substance: RITUXIMAB
     Dosage: 3 ML, TIW (DOSAGE TEXT: 3 ML, TIW, TIME INTERVAL: 0.33 WK)
     Route: 065
     Dates: start: 20201221, end: 20201221
  29. RITUXIMAB [Suspect]
     Active Substance: RITUXIMAB
     Dosage: 3 ML, TIW (DOSAGE TEXT: 3 ML, TIW, TIME INTERVAL: 0.33 WK)
     Route: 065
     Dates: start: 20201221, end: 20201221
  30. RITUXIMAB [Suspect]
     Active Substance: RITUXIMAB
     Dosage: 3 ML, TIW (DOSAGE TEXT: 3 ML, TIW, TIME INTERVAL: 0.33 WK)
     Route: 065
     Dates: start: 20201221, end: 20201221
  31. RITUXIMAB [Suspect]
     Active Substance: RITUXIMAB
     Dosage: UNK; ADDITIONAL INFO: ROUTE:UNKNOWN ROUTE:UNKNOWN ROUTE:UNKNOWN ROUTE:UNKNOWN ROUTE:UNKNOWN ROUTE:UN
     Route: 065
  32. RITUXIMAB [Suspect]
     Active Substance: RITUXIMAB
     Dosage: 600 MG, TIW (TIME INTERVAL: 0.33 WEEK, ADDITIONAL INFO: ROUTE:) / 600 MILLIGRAM, 3XW (600 MG, TIW)
     Route: 065
     Dates: start: 20210105, end: 20210216
  33. RITUXIMAB [Suspect]
     Active Substance: RITUXIMAB
     Dosage: 600 MG, TIW (TIME INTERVAL: 0.33 WEEK, ADDITIONAL INFO: ROUTE:); ADDITIONAL INFO: ROUTE:UNKNOWN ROUT
     Route: 042
     Dates: start: 20210105, end: 20210216
  34. RITUXIMAB [Suspect]
     Active Substance: RITUXIMAB
     Dosage: 600 MG, TIW (TIME INTERVAL: 0.33 WEEK, ADDITIONAL INFO: ROUTE:)
     Route: 065
     Dates: start: 20210105, end: 20210216
  35. RITUXIMAB [Suspect]
     Active Substance: RITUXIMAB
     Dosage: 600 MG, TIW (TIME INTERVAL: 0.33 WEEK, ADDITIONAL INFO: ROUTE:)
     Route: 065
     Dates: start: 20210105, end: 20210216
  36. RITUXIMAB [Suspect]
     Active Substance: RITUXIMAB
     Dosage: 600 MG, TIW (TIME INTERVAL: 0.33 WEEK, ADDITIONAL INFO: ROUTE:)
     Route: 042
     Dates: start: 20210105, end: 20210216
  37. RITUXIMAB [Suspect]
     Active Substance: RITUXIMAB
     Dosage: UNK (ADDITIONAL INFO: ROUTE:); ADDITIONAL INFO: ROUTE:UNKNOWN ROUTE:UNKNOWN ROUTE:UNKNOWN ROUTE:UNKN
     Route: 065
  38. RITUXIMAB [Suspect]
     Active Substance: RITUXIMAB
     Dosage: UNK (ADDITIONAL INFO: ROUTE:); ADDITIONAL INFO: ROUTE:UNKNOWN ROUTE:UNKNOWN ROUTE:UNKNOWN ROUTE:UNKN
     Route: 065
  39. RITUXIMAB [Suspect]
     Active Substance: RITUXIMAB
     Dosage: UNK (ADDITIONAL INFO: ROUTE:); ADDITIONAL INFO: ROUTE:UNKNOWN ROUTE:UNKNOWN ROUTE:UNKNOWN ROUTE:UNKN
     Route: 065
  40. RITUXIMAB [Suspect]
     Active Substance: RITUXIMAB
     Dosage: UNK
     Route: 065
  41. RITUXIMAB [Suspect]
     Active Substance: RITUXIMAB
     Dosage: TOTAL VOLUME PRIOR AE 560 ML DATE OF MOST RECENT DOSE PRIOR TO FIRST EPISODE OF NEUTROPENIA 24/NO...
     Route: 042
     Dates: start: 20201124
  42. RITUXIMAB [Suspect]
     Active Substance: RITUXIMAB
     Dosage: TOTAL VOLUME PRIOR AE 560 MLDATE OF MOST RECENT DOSE PRIOR TO FIRST EPISODE OF NEUTROPENIA 24/NO...
     Route: 042
     Dates: start: 20201124
  43. RITUXIMAB [Suspect]
     Active Substance: RITUXIMAB
     Dosage: TOTAL VOLUME PRIOR AE 560 MLDATE OF MOST RECENT DOSE PRIOR TO FIRST EPISODE OF NEUTROPENIA 24/NO...
     Route: 042
     Dates: start: 20201124
  44. RITUXIMAB [Suspect]
     Active Substance: RITUXIMAB
     Dosage: TOTAL VOLUME PRIOR AE 560 MLDATE OF MOST RECENT DOSE PRIOR TO FIRST EPISODE OF NEUTROPENIA 24/NO...
     Route: 042
     Dates: start: 20201124
  45. RITUXIMAB [Suspect]
     Active Substance: RITUXIMAB
     Dosage: TOTAL VOLUME PRIOR AE 560 MLDATE OF MOST RECENT DOSE PRIOR TO FIRST EPISODE OF NEUTROPENIA 24/NO...
     Route: 042
     Dates: start: 20201124
  46. RITUXIMAB [Suspect]
     Active Substance: RITUXIMAB
     Dosage: DURATION: 1 DAY; TIME INTERVAL: 0.33 WK (ADDITIONAL INFO: ROUTE)
     Route: 050
     Dates: start: 20201221, end: 20201221
  47. RITUXIMAB [Suspect]
     Active Substance: RITUXIMAB
     Dosage: DURATION: 1 DAY; TIME INTERVAL: 0.33 WK (ADDITIONAL INFO: ROUTE)
     Route: 050
     Dates: start: 20201221, end: 20201221
  48. RITUXIMAB [Suspect]
     Active Substance: RITUXIMAB
     Dosage: DURATION: 1 DAY; TIME INTERVAL: 0.33 WK (ADDITIONAL INFO: ROUTE)
     Route: 050
     Dates: start: 20201221, end: 20201221
  49. RITUXIMAB [Suspect]
     Active Substance: RITUXIMAB
     Dosage: DURATION: 1 DAY; TIME INTERVAL: 0.33 WK (ADDITIONAL INFO: ROUTE)
     Route: 050
     Dates: start: 20201221, end: 20201221
  50. RITUXIMAB [Suspect]
     Active Substance: RITUXIMAB
     Dosage: DURATION: 1 DAY; TIME INTERVAL: 0.33 WK (ADDITIONAL INFO: ROUTE)
     Route: 050
     Dates: start: 20201221, end: 20201221
  51. RITUXIMAB [Suspect]
     Active Substance: RITUXIMAB
     Indication: Diffuse large B-cell lymphoma
     Dosage: 600 MG, TIW; TIME INTERVAL: 0.33 WK
     Route: 050
     Dates: start: 20210105, end: 20210216
  52. RITUXIMAB [Suspect]
     Active Substance: RITUXIMAB
     Dosage: 600 MG, TIW; TIME INTERVAL: 0.33 WK
     Route: 050
     Dates: start: 20210105, end: 20210216
  53. RITUXIMAB [Suspect]
     Active Substance: RITUXIMAB
     Dosage: 600 MG, TIW; TIME INTERVAL: 0.33 WK
     Route: 050
     Dates: start: 20210105, end: 20210216
  54. RITUXIMAB [Suspect]
     Active Substance: RITUXIMAB
     Dosage: 600 MG, TIW; TIME INTERVAL: 0.33 WK
     Route: 050
     Dates: start: 20210105, end: 20210216
  55. RITUXIMAB [Suspect]
     Active Substance: RITUXIMAB
     Dosage: 600 MG, TIW; TIME INTERVAL: 0.33 WK
     Route: 050
     Dates: start: 20210105, end: 20210216
  56. RITUXIMAB [Suspect]
     Active Substance: RITUXIMAB
     Dosage: DURATION: 1 DAY; TIME INTERVAL: 0.33 WK (ADDITIONAL INFO: ROUTE:)
     Route: 050
     Dates: start: 20210216, end: 20210216
  57. RITUXIMAB [Suspect]
     Active Substance: RITUXIMAB
     Dosage: DURATION: 1 DAY; TIME INTERVAL: 0.33 WK (ADDITIONAL INFO: ROUTE:)
     Route: 050
     Dates: start: 20210216, end: 20210216
  58. RITUXIMAB [Suspect]
     Active Substance: RITUXIMAB
     Dosage: DURATION: 1 DAY; TIME INTERVAL: 0.33 WK (ADDITIONAL INFO: ROUTE:)
     Route: 050
     Dates: start: 20210216, end: 20210216
  59. RITUXIMAB [Suspect]
     Active Substance: RITUXIMAB
     Dosage: DURATION: 1 DAY; TIME INTERVAL: 0.33 WK (ADDITIONAL INFO: ROUTE:)
     Route: 050
     Dates: start: 20210216, end: 20210216
  60. RITUXIMAB [Suspect]
     Active Substance: RITUXIMAB
     Dosage: DURATION: 1 DAY; TIME INTERVAL: 0.33 WK (ADDITIONAL INFO: ROUTE:)
     Route: 050
     Dates: start: 20210216, end: 20210216
  61. RITUXIMAB [Suspect]
     Active Substance: RITUXIMAB
     Dosage: 3 ML, TIW
     Route: 042
     Dates: start: 20201221
  62. RITUXIMAB [Suspect]
     Active Substance: RITUXIMAB
     Dosage: 9 MG/M2, TOTAL VOLUME PRIOR AE 560 MLDATE OF MOST RECENT DOSE PRIOR TO FIRST EPISODE OF NEUTROPENIA;
     Dates: start: 20201124
  63. RITUXIMAB [Suspect]
     Active Substance: RITUXIMAB
     Dosage: 9 MILLIGRAM/SQ. METER (9 MG/M2, TOTAL VOLUME PRIOR AE 560 MLDATE OF MOST RECENT DOSE PRIOR TO FIRST
     Dates: start: 20201124
  64. RITUXIMAB [Suspect]
     Active Substance: RITUXIMAB
     Dosage: 9 MG/M2
     Dates: start: 20201124
  65. RITUXIMAB [Suspect]
     Active Substance: RITUXIMAB
     Dosage: 9 MG/M2, TOTAL VOLUME PRIOR AE 560 MLDATE OF MOST RECENT DOSE PRIOR TO FIRST EPISODE OF NEUTROPENIA
     Dates: start: 20201124
  66. RITUXIMAB [Suspect]
     Active Substance: RITUXIMAB
     Dosage: 3 ML, TIW
     Route: 050
     Dates: end: 20201221
  67. RITUXIMAB [Suspect]
     Active Substance: RITUXIMAB
     Dosage: 3 ML, EVERY 3 WEEKS
     Route: 042
     Dates: start: 20210216, end: 20210216
  68. RITUXIMAB [Suspect]
     Active Substance: RITUXIMAB
     Dosage: 600 MG, EVERY 3 WEEKS
     Route: 042
     Dates: start: 20210105, end: 20210216
  69. RITUXIMAB [Suspect]
     Active Substance: RITUXIMAB
     Dosage: UNK; ADDITIONAL INFO: ROUTE:UNKNOWN ROUTE:UNKNOWN ROUTE:UNKNOWN ROUTE:UNKNOWN ROUTE:UNKNOWN ROUTE:UN
     Route: 042
  70. RITUXIMAB [Suspect]
     Active Substance: RITUXIMAB
     Dosage: 100 MG; ADDITIONAL INFO: ROUTE:UNKNOWN ROUTE:UNKNOWN ROUTE:UNKNOWN ROUTE:UNKNOWN ROUTE:UNKNOWN ROUTE
     Dates: start: 20210126
  71. RITUXIMAB [Suspect]
     Active Substance: RITUXIMAB
     Dosage: UNK
  72. RITUXIMAB [Suspect]
     Active Substance: RITUXIMAB
     Dosage: 3 MILLILITER, 3XW
     Dates: start: 20210216, end: 20210216
  73. RITUXIMAB [Suspect]
     Active Substance: RITUXIMAB
     Dosage: 600 MILLIGRAM, 3XW (600 MG, TIW)
     Route: 042
     Dates: start: 20210216
  74. RITUXIMAB [Suspect]
     Active Substance: RITUXIMAB
     Dosage: 100 MG
  75. RITUXIMAB [Suspect]
     Active Substance: RITUXIMAB
     Dosage: UNK; ; ADDITIONAL INFO: ROUTE:UNKNOWN ROUTE:UNKNOWN ROUTE:UNKNOWN ROUTE:UNKNOWN ROUTE:UNKNOWN ROUTE:
  76. RITUXIMAB [Suspect]
     Active Substance: RITUXIMAB
     Dosage: UNK; ; ADDITIONAL INFO: ROUTE:UNKNOWN ROUTE:UNKNOWN ROUTE:UNKNOWN ROUTE:UNKNOWN ROUTE:UNKNOWN ROUTE:
  77. RITUXIMAB [Suspect]
     Active Substance: RITUXIMAB
     Dosage: UNK; ; ADDITIONAL INFO: ROUTE:UNKNOWN ROUTE:UNKNOWN ROUTE:UNKNOWN ROUTE:UNKNOWN ROUTE:UNKNOWN ROUTE:
  78. RITUXIMAB [Suspect]
     Active Substance: RITUXIMAB
     Dosage: UNK; ; ADDITIONAL INFO: ROUTE:UNKNOWN ROUTE:UNKNOWN ROUTE:UNKNOWN ROUTE:UNKNOWN ROUTE:UNKNOWN ROUTE:
  79. RITUXIMAB [Suspect]
     Active Substance: RITUXIMAB
     Dosage: 2.5 MG, EVERY 3 WEEKS; ADDITIONAL INFO: ROUTE:UNKNOWN ROUTE:UNKNOWN ROUTE:UNKNOWN ROUTE:UNKNOWN ROUT
     Dates: start: 20201222
  80. RITUXIMAB [Suspect]
     Active Substance: RITUXIMAB
     Dosage: 1000 MG; ADDITIONAL INFO: ROUTE:UNKNOWN ROUTE:UNKNOWN ROUTE:UNKNOWN ROUTE:UNKNOWN ROUTE:UNKNOWN ROUT
     Dates: start: 20201215
  81. RITUXIMAB [Suspect]
     Active Substance: RITUXIMAB
     Dosage: 1000 MG; ADDITIONAL INFO: ROUTE:UNKNOWN ROUTE:UNKNOWN ROUTE:UNKNOWN ROUTE:UNKNOWN ROUTE:UNKNOWN ROUT
     Dates: start: 20210302
  82. RITUXIMAB [Suspect]
     Active Substance: RITUXIMAB
     Dosage: 20 MG; ADDITIONAL INFO: ROUTE:UNKNOWN ROUTE:UNKNOWN ROUTE:UNKNOWN ROUTE:UNKNOWN ROUTE:UNKNOWN ROUTE:
     Dates: start: 20210209
  83. RITUXIMAB [Suspect]
     Active Substance: RITUXIMAB
     Dosage: 100 MG
     Dates: start: 20210216, end: 20210216
  84. RITUXIMAB [Suspect]
     Active Substance: RITUXIMAB
     Dosage: 100 MG
     Dates: start: 20201124, end: 20210216
  85. RITUXIMAB [Suspect]
     Active Substance: RITUXIMAB
     Dosage: 1000 MG
     Dates: start: 20201221, end: 20201221
  86. RITUXIMAB [Suspect]
     Active Substance: RITUXIMAB
     Dosage: 100 MG
     Dates: start: 20210105, end: 20210216
  87. RITUXIMAB [Suspect]
     Active Substance: RITUXIMAB
     Dosage: 100 MG
     Dates: start: 20210216
  88. RITUXIMAB [Suspect]
     Active Substance: RITUXIMAB
     Dosage: 3 MILLILITER, 3XW
     Dates: start: 20210216, end: 20210216
  89. RITUXIMAB [Suspect]
     Active Substance: RITUXIMAB
     Dosage: 9 MILLIGRAM/SQ. METER (9 MG/M2, TOTAL VOLUME PRIOR AE 560 MLDATE OF MOST RECENT DOSE
     Dates: start: 20201124
  90. RITUXIMAB [Suspect]
     Active Substance: RITUXIMAB
     Dosage: 600 MILLIGRAM, 3XW (600 MG, TIW)
     Dates: start: 20210216
  91. RITUXIMAB [Suspect]
     Active Substance: RITUXIMAB
     Dosage: 3 MILLILITER, 3XW (3 ML, TIW)
     Dates: start: 20210216, end: 20210216
  92. RITUXIMAB [Suspect]
     Active Substance: RITUXIMAB
     Dosage: 9 MILLIGRAM/SQ. METER (9 MG/M2, TOTAL VOLUME PRIOR AE 560 MLDATE OF MOST RECENT DOSE PRIOR TO FIRST
     Dates: start: 20201124
  93. RITUXIMAB [Suspect]
     Active Substance: RITUXIMAB
     Dosage: UNK
  94. RITUXIMAB [Suspect]
     Active Substance: RITUXIMAB
     Dosage: UNK
  95. RITUXIMAB [Suspect]
     Active Substance: RITUXIMAB
     Dosage: UNK; ADDITIONAL INFO: ROUTE:UNKNOWN ROUTE:UNKNOWN ROUTE:UNKNOWN ROUTE:UNKNOWN ROUTE:UNKNOWN ROUTE:UN
  96. RITUXIMAB [Suspect]
     Active Substance: RITUXIMAB
     Dosage: UNK; ADDITIONAL INFO: ROUTE:UNKNOWN ROUTE:UNKNOWN ROUTE:UNKNOWN ROUTE:UNKNOWN ROUTE:UNKNOWN ROUTE:UN
  97. RITUXIMAB [Suspect]
     Active Substance: RITUXIMAB
     Dosage: UNK; ADDITIONAL INFO: ROUTE:UNKNOWN ROUTE:UNKNOWN ROUTE:UNKNOWN ROUTE:UNKNOWN ROUTE:UNKNOWN ROUTE:UN
  98. RITUXIMAB [Suspect]
     Active Substance: RITUXIMAB
     Dosage: UNK; ADDITIONAL INFO: ROUTE:UNKNOWN ROUTE:UNKNOWN ROUTE:UNKNOWN ROUTE:UNKNOWN ROUTE:UNKNOWN ROUTE:UN
  99. RITUXIMAB [Suspect]
     Active Substance: RITUXIMAB
     Dosage: UNK; ADDITIONAL INFO: ROUTE:UNKNOWN ROUTE:UNKNOWN ROUTE:UNKNOWN ROUTE:UNKNOWN ROUTE:UNKNOWN ROUTE:UN
  100. RITUXIMAB [Suspect]
     Active Substance: RITUXIMAB
     Dosage: 3 ML, TIW
     Route: 065
     Dates: start: 20201221, end: 20201221
  101. RITUXIMAB [Suspect]
     Active Substance: RITUXIMAB
     Indication: Diffuse large B-cell lymphoma
     Dosage: 600 MG/M2, 3/WEEK (9 MG/M2, TOTAL VOLUME PRIOR AE 560 MLDATE OF MOST RECENT DOSE PRIOR TO FIRST EPIS
     Dates: start: 20201124
  102. RITUXIMAB [Suspect]
     Active Substance: RITUXIMAB
     Dosage: 1000 MG/M2 (DOSAGE TEXT: 100 MG)
     Dates: start: 20210216, end: 20210216
  103. RITUXIMAB [Suspect]
     Active Substance: RITUXIMAB
     Dosage: 9 ML, 1/WEEK (100 MG)
     Dates: start: 20201124, end: 20210216
  104. RITUXIMAB [Suspect]
     Active Substance: RITUXIMAB
     Dosage: 1800 MG, 1/WEEK (DOSAGE TEXT: 100 MG)
     Dates: start: 20201221, end: 20201221
  105. RITUXIMAB [Suspect]
     Active Substance: RITUXIMAB
     Dosage: 20 MG (DOSAGE TEXT: 100 MG)
     Dates: start: 20210105, end: 20210216
  106. RITUXIMAB [Suspect]
     Active Substance: RITUXIMAB
     Dosage: 600 MG, TIW
     Route: 050
     Dates: start: 20210105, end: 20210216
  107. RITUXIMAB [Suspect]
     Active Substance: RITUXIMAB
     Dosage: 3 ML, TIW, TIME INTERVAL: 0.33 WK
     Route: 050
     Dates: start: 20201221, end: 20201221
  108. RITUXIMAB [Suspect]
     Active Substance: RITUXIMAB
     Dosage: UNK
     Route: 050
  109. RITUXIMAB [Suspect]
     Active Substance: RITUXIMAB
     Dosage: UNK
     Route: 050
  110. RITUXIMAB [Suspect]
     Active Substance: RITUXIMAB
     Dosage: 3 ML, TIW
     Route: 050
     Dates: start: 20210216, end: 20210216
  111. RITUXIMAB [Suspect]
     Active Substance: RITUXIMAB
     Dosage: UNK
     Route: 050
  112. RITUXIMAB [Suspect]
     Active Substance: RITUXIMAB
     Dosage: UNK
     Route: 050
  113. RITUXIMAB [Suspect]
     Active Substance: RITUXIMAB
     Dosage: 9 MG/M2, TOTAL VOLUME PRIOR AE 560 MLDATE OF MOST RECENT DOSE PRIOR TO FIRST EPISODE OF NEUTROPENIA
     Route: 050
     Dates: start: 20201124
  114. RITUXIMAB [Suspect]
     Active Substance: RITUXIMAB
     Dosage: 9 MG/M2, TOTAL VOLUME PRIOR AE 560 MLDATE OF MOST RECENT DOSE PRIOR TO FIRST EPISODE OF NEUTROPENIA
     Route: 050
     Dates: start: 20201124
  115. RITUXIMAB [Suspect]
     Active Substance: RITUXIMAB
     Dosage: 600 MG, TIW
     Route: 050
     Dates: start: 20210105, end: 20210216
  116. RITUXIMAB [Suspect]
     Active Substance: RITUXIMAB
     Dosage: 3 ML, TIW, TIME INTERVAL: 0.33 WK
     Route: 050
     Dates: start: 20201221, end: 20201221
  117. RITUXIMAB [Suspect]
     Active Substance: RITUXIMAB
     Dosage: 3 ML, TIW
     Route: 050
     Dates: start: 20210216, end: 20210216
  118. RITUXIMAB [Suspect]
     Active Substance: RITUXIMAB
     Dosage: 3 ML, TIW
     Route: 050
     Dates: start: 20210216, end: 20210216
  119. RITUXIMAB [Suspect]
     Active Substance: RITUXIMAB
     Dosage: 3 ML, TIW, TIME INTERVAL: 0.33 WK
     Route: 050
     Dates: start: 20201221, end: 20201221
  120. RITUXIMAB [Suspect]
     Active Substance: RITUXIMAB
     Dosage: 600 MG, TIW
     Route: 050
     Dates: start: 20210105, end: 20210216
  121. RITUXIMAB [Suspect]
     Active Substance: RITUXIMAB
     Dosage: 3 ML, TIW
     Route: 050
     Dates: start: 20210216, end: 20210216
  122. RITUXIMAB [Suspect]
     Active Substance: RITUXIMAB
     Dosage: 3 ML, TIW
     Route: 050
     Dates: start: 20210216, end: 20210216
  123. RITUXIMAB [Suspect]
     Active Substance: RITUXIMAB
     Dosage: 600 MG, TIW
     Route: 050
     Dates: start: 20210105, end: 20210216
  124. RITUXIMAB [Suspect]
     Active Substance: RITUXIMAB
     Dosage: 9 MG/M2, TOTAL VOLUME PRIOR AE 560 MLDATE OF MOST RECENT DOSE PRIOR TO FIRST EPISODE OF NEUTROPENIA
     Route: 050
     Dates: start: 20201124
  125. RITUXIMAB [Suspect]
     Active Substance: RITUXIMAB
     Dosage: 3 ML, TIW, TIME INTERVAL: 0.33 WK
     Route: 050
     Dates: start: 20201221, end: 20201221
  126. RITUXIMAB [Suspect]
     Active Substance: RITUXIMAB
     Dosage: 600 MG, TIW
     Route: 050
     Dates: start: 20210105, end: 20210216
  127. RITUXIMAB [Suspect]
     Active Substance: RITUXIMAB
     Dosage: UNK
     Route: 050
  128. RITUXIMAB [Suspect]
     Active Substance: RITUXIMAB
     Dosage: 9 MG/M2, TOTAL VOLUME PRIOR AE 560 MLDATE OF MOST RECENT DOSE PRIOR TO FIRST EPISODE OF NEUTROPENIA
     Route: 050
     Dates: start: 20201124
  129. RITUXIMAB [Suspect]
     Active Substance: RITUXIMAB
     Dosage: 9 MG/M2, TOTAL VOLUME PRIOR AE 560 MLDATE OF MOST RECENT DOSE PRIOR TO FIRST EPISODE OF NEUTROPENIA
     Route: 050
     Dates: start: 20201124
  130. RITUXIMAB [Suspect]
     Active Substance: RITUXIMAB
     Dosage: 3 ML, TIW, TIME INTERVAL: 0.33 WK
     Route: 050
     Dates: start: 20201221, end: 20201221
  131. RITUXIMAB [Suspect]
     Active Substance: RITUXIMAB
     Dosage: 600 MG, TIW
     Route: 050
     Dates: start: 20210105, end: 20210216
  132. RITUXIMAB [Suspect]
     Active Substance: RITUXIMAB
     Dosage: 3ML, TIW
     Route: 065
     Dates: start: 20201221, end: 20201221
  133. RITUXIMAB [Suspect]
     Active Substance: RITUXIMAB
     Dosage: 3ML, TIW
     Route: 065
     Dates: start: 20201221, end: 20201221
  134. RITUXIMAB [Suspect]
     Active Substance: RITUXIMAB
     Dosage: 600 MG, TIW
     Route: 065
     Dates: start: 20210105, end: 20210216
  135. RITUXIMAB [Suspect]
     Active Substance: RITUXIMAB
     Dosage: 600 MG, TIW
     Route: 065
     Dates: start: 20210105, end: 20210216
  136. RITUXIMAB [Suspect]
     Active Substance: RITUXIMAB
     Dosage: 600 MG, TIW
     Route: 065
     Dates: start: 20210105, end: 20210216
  137. RITUXIMAB [Suspect]
     Active Substance: RITUXIMAB
     Dosage: 600 MG, TIW
     Route: 065
     Dates: start: 20210105, end: 20210216
  138. RITUXIMAB [Suspect]
     Active Substance: RITUXIMAB
     Dosage: 600 MG, TIW
     Route: 065
     Dates: start: 20210105, end: 20210216
  139. RITUXIMAB [Suspect]
     Active Substance: RITUXIMAB
     Dosage: 3 ML, TIW
     Route: 065
     Dates: start: 20210216, end: 20210216
  140. RITUXIMAB [Suspect]
     Active Substance: RITUXIMAB
     Dosage: 3 ML, TIW
     Route: 065
     Dates: start: 20210216, end: 20210216
  141. RITUXIMAB [Suspect]
     Active Substance: RITUXIMAB
     Dosage: 3 ML, TIW
     Route: 065
     Dates: start: 20210216, end: 20210216
  142. RITUXIMAB [Suspect]
     Active Substance: RITUXIMAB
     Dosage: 3 ML, TIW
     Route: 065
     Dates: start: 20210216, end: 20210216
  143. RITUXIMAB [Suspect]
     Active Substance: RITUXIMAB
     Dosage: 3 ML, TIW
     Route: 065
     Dates: start: 20210216, end: 20210216
  144. RITUXIMAB [Suspect]
     Active Substance: RITUXIMAB
     Dosage: TOTAL VOLUME PRIOR AE 560 MLDATE OF MOST RECENT DOSE PRIOR TO FIRST EPISODE OF NEUTROPENIA
     Dates: start: 20201124
  145. RITUXIMAB [Suspect]
     Active Substance: RITUXIMAB
     Dosage: TOTAL VOLUME PRIOR AE 560 MLDATE OF MOST RECENT DOSE PRIOR TO FIRST EPISODE OF NEUTROPENIA
     Dates: start: 20201124
  146. RITUXIMAB [Suspect]
     Active Substance: RITUXIMAB
     Dosage: TOTAL VOLUME PRIOR AE 560 MLDATE OF MOST RECENT DOSE PRIOR TO FIRST EPISODE OF NEUTROPENIA
     Dates: start: 20201124
  147. RITUXIMAB [Suspect]
     Active Substance: RITUXIMAB
     Dosage: TOTAL VOLUME PRIOR AE 560 MLDATE OF MOST RECENT DOSE PRIOR TO FIRST EPISODE OF NEUTROPENIA
     Dates: start: 20201124
  148. RITUXIMAB [Suspect]
     Active Substance: RITUXIMAB
     Dosage: TOTAL VOLUME PRIOR AE 560 MLDATE OF MOST RECENT DOSE PRIOR TO FIRST EPISODE OF NEUTROPENIA
     Dates: start: 20201124
  149. RITUXIMAB [Suspect]
     Active Substance: RITUXIMAB
     Dosage: 3 MILLILITER, 3XW
     Route: 065
     Dates: start: 20210216, end: 20210216
  150. RITUXIMAB [Suspect]
     Active Substance: RITUXIMAB
     Dosage: 600 MILLIGRAM/SQ. METER, TOTAL VOLUME PRIOR AE 560 ML DATE OF MOST RECENT DOSE PRIOR TO FIRST EPISOD
     Route: 042
     Dates: end: 20210216
  151. RITUXIMAB [Suspect]
     Active Substance: RITUXIMAB
     Indication: Diffuse large B-cell lymphoma
     Dosage: 600 MILLIGRAM, 3XW
     Route: 042
     Dates: start: 20210105, end: 20210216
  152. RITUXIMAB [Suspect]
     Active Substance: RITUXIMAB
     Dosage: 3 MILLILITER, 3XW
     Route: 065
     Dates: start: 20201221, end: 20201221
  153. RITUXIMAB [Suspect]
     Active Substance: RITUXIMAB
     Dosage: 3 MILLILITER, 3XW
     Route: 065
     Dates: start: 20210216, end: 20210216
  154. RITUXIMAB [Suspect]
     Active Substance: RITUXIMAB
     Dosage: 3 MILLILITER, 3XW
     Route: 065
     Dates: start: 20210216, end: 20210216
  155. RITUXIMAB [Suspect]
     Active Substance: RITUXIMAB
     Dosage: 3 MILLILITER, 3XW
     Route: 065
     Dates: start: 20201221, end: 20201221
  156. DOXORUBICIN HYDROCHLORIDE [Suspect]
     Active Substance: DOXORUBICIN HYDROCHLORIDE
     Indication: Diffuse large B-cell lymphoma
     Dosage: UNK; ADDITIONAL INFO: ROUTE:
     Route: 042
  157. DOXORUBICIN HYDROCHLORIDE [Suspect]
     Active Substance: DOXORUBICIN HYDROCHLORIDE
     Dosage: UNK; ADDITIONAL INFO: ROUTE:
     Route: 042
  158. DOXORUBICIN HYDROCHLORIDE [Suspect]
     Active Substance: DOXORUBICIN HYDROCHLORIDE
     Dosage: UNK; ; ADDITIONAL INFO: ROUTE:
     Route: 042
  159. DOXORUBICIN HYDROCHLORIDE [Suspect]
     Active Substance: DOXORUBICIN HYDROCHLORIDE
     Dosage: UNK; ; ADDITIONAL INFO: ROUTE:
     Route: 042
  160. DOXORUBICIN HYDROCHLORIDE [Suspect]
     Active Substance: DOXORUBICIN HYDROCHLORIDE
     Dosage: UNK; ; ADDITIONAL INFO: ROUTE:
     Route: 042
  161. DOXORUBICIN HYDROCHLORIDE [Suspect]
     Active Substance: DOXORUBICIN HYDROCHLORIDE
     Dosage: UNK, DOSAGE FORM: INFUSION; ADDITIONAL INFO: ROUTE:
     Route: 042
  162. DOXORUBICIN HYDROCHLORIDE [Suspect]
     Active Substance: DOXORUBICIN HYDROCHLORIDE
     Dosage: UNK, DOSAGE FORM: INFUSION; ADDITIONAL INFO: ROUTE:
     Route: 042
  163. DOXORUBICIN HYDROCHLORIDE [Suspect]
     Active Substance: DOXORUBICIN HYDROCHLORIDE
     Dosage: UNK, DOSAGE FORM: INFUSION; ADDITIONAL INFO: ROUTE:
     Route: 042
  164. DOXORUBICIN HYDROCHLORIDE [Suspect]
     Active Substance: DOXORUBICIN HYDROCHLORIDE
     Dosage: UNK, DOSAGE FORM: INFUSION; ADDITIONAL INFO: ROUTE:
     Route: 042
  165. DOXORUBICIN HYDROCHLORIDE [Suspect]
     Active Substance: DOXORUBICIN HYDROCHLORIDE
     Dosage: UNK, DOSAGE FORM: INFUSION; ADDITIONAL INFO: ROUTE:
     Route: 042
  166. DOXORUBICIN HYDROCHLORIDE [Suspect]
     Active Substance: DOXORUBICIN HYDROCHLORIDE
     Dosage: UNK, DOSAGE FORM: INFUSION; ADDITIONAL INFO: ROUTE:
     Route: 042
  167. DOXORUBICIN HYDROCHLORIDE [Suspect]
     Active Substance: DOXORUBICIN HYDROCHLORIDE
     Dosage: 50 MILLIGRAM
     Route: 042
     Dates: start: 20201124
  168. DOXORUBICIN HYDROCHLORIDE [Suspect]
     Active Substance: DOXORUBICIN HYDROCHLORIDE
     Dosage: UNK; ADDITIONAL INFO: ROUTE:
     Route: 042
  169. DOXORUBICIN HYDROCHLORIDE [Suspect]
     Active Substance: DOXORUBICIN HYDROCHLORIDE
     Dosage: UNK; ADDITIONAL INFO: ROUTE:
     Route: 042
  170. DOXORUBICIN HYDROCHLORIDE [Suspect]
     Active Substance: DOXORUBICIN HYDROCHLORIDE
     Dosage: UNK; ADDITIONAL INFO: ROUTE:
     Route: 042
  171. DOXORUBICIN HYDROCHLORIDE [Suspect]
     Active Substance: DOXORUBICIN HYDROCHLORIDE
     Dosage: UNK; ADDITIONAL INFO: ROUTE:
     Route: 042
  172. DOXORUBICIN HYDROCHLORIDE [Suspect]
     Active Substance: DOXORUBICIN HYDROCHLORIDE
     Dosage: UNK; ADDITIONAL INFO: ROUTE:
     Route: 042
  173. DOXORUBICIN HYDROCHLORIDE [Suspect]
     Active Substance: DOXORUBICIN HYDROCHLORIDE
     Dosage: 150 MG/M2, ONE A WEEK, 50 MG/M2, TIW (DATE OF MOST RECENT DOSE PRIOR TO FIRST EPISODE OF NEUTROPENIA
     Route: 042
     Dates: start: 20201124
  174. DOXORUBICIN HYDROCHLORIDE [Suspect]
     Active Substance: DOXORUBICIN HYDROCHLORIDE
     Dosage: UNK
     Route: 042
  175. DOXORUBICIN HYDROCHLORIDE [Suspect]
     Active Substance: DOXORUBICIN HYDROCHLORIDE
     Dosage: UNK; ADDITIONAL INFO: ROUTE:
     Route: 042
  176. DOXORUBICIN HYDROCHLORIDE [Suspect]
     Active Substance: DOXORUBICIN HYDROCHLORIDE
     Dosage: UNK
     Route: 042
  177. DOXORUBICIN HYDROCHLORIDE [Suspect]
     Active Substance: DOXORUBICIN HYDROCHLORIDE
     Dosage: UNK
     Route: 042
  178. DOXORUBICIN HYDROCHLORIDE [Suspect]
     Active Substance: DOXORUBICIN HYDROCHLORIDE
     Dosage: UNK; ADDITIONAL INFO: ROUTE:
     Route: 042
  179. DOXORUBICIN HYDROCHLORIDE [Suspect]
     Active Substance: DOXORUBICIN HYDROCHLORIDE
     Dosage: 80 MG/80 MILLIGRAM/SQ. METER (ON DAY 1 OF EACH 21-DAY CYCLEDATE OF MOST RECENT DOSE PRIOR TO FIRST E
     Route: 042
     Dates: start: 20201124
  180. DOXORUBICIN HYDROCHLORIDE [Suspect]
     Active Substance: DOXORUBICIN HYDROCHLORIDE
     Dosage: UNK; ADDITIONAL INFO: ROUTE:
     Route: 042
  181. DOXORUBICIN HYDROCHLORIDE [Suspect]
     Active Substance: DOXORUBICIN HYDROCHLORIDE
     Dosage: UNK; ADDITIONAL INFO: ROUTE:
     Route: 042
  182. DOXORUBICIN HYDROCHLORIDE [Suspect]
     Active Substance: DOXORUBICIN HYDROCHLORIDE
     Dosage: UNK; ADDITIONAL INFO: ROUTE:
     Route: 042
  183. DOXORUBICIN HYDROCHLORIDE [Suspect]
     Active Substance: DOXORUBICIN HYDROCHLORIDE
     Dosage: 50 MILLIGRAM; ADDITIONAL INFO: ROUTE:
     Route: 042
     Dates: start: 20201124
  184. BENDAMUSTINE [Suspect]
     Active Substance: BENDAMUSTINE
     Indication: Prophylaxis
     Dosage: UNK
     Route: 065
  185. BENDAMUSTINE [Suspect]
     Active Substance: BENDAMUSTINE
     Dosage: UNK
     Route: 065
  186. BENDAMUSTINE [Suspect]
     Active Substance: BENDAMUSTINE
     Dosage: UNK
  187. BENDAMUSTINE [Suspect]
     Active Substance: BENDAMUSTINE
     Dosage: UNK
  188. BENDAMUSTINE [Suspect]
     Active Substance: BENDAMUSTINE
     Dosage: UNK
  189. BENDAMUSTINE [Suspect]
     Active Substance: BENDAMUSTINE
     Dosage: UNK
  190. BENDAMUSTINE [Suspect]
     Active Substance: BENDAMUSTINE
     Dosage: UNK
  191. BENDAMUSTINE [Suspect]
     Active Substance: BENDAMUSTINE
     Dosage: UNK
  192. BENDAMUSTINE [Suspect]
     Active Substance: BENDAMUSTINE
     Dosage: UNK
  193. BENDAMUSTINE [Suspect]
     Active Substance: BENDAMUSTINE
     Dosage: UNK
  194. BENDAMUSTINE [Suspect]
     Active Substance: BENDAMUSTINE
     Dosage: UNK
  195. BENDAMUSTINE [Suspect]
     Active Substance: BENDAMUSTINE
     Indication: Product used for unknown indication
     Dosage: UNK/ADDITIONAL INFO: ROUTE:UNKNOWNADDITIONAL INFO: ROUTE:
  196. BENDAMUSTINE [Suspect]
     Active Substance: BENDAMUSTINE
     Dosage: UNK/ADDITIONAL INFO: ROUTE:UNKNOWNADDITIONAL INFO: ROUTE:
  197. BENDAMUSTINE [Suspect]
     Active Substance: BENDAMUSTINE
     Dosage: UNK; ;/ADDITIONAL INFO: ROUTE:UNKNOWNADDITIONAL INFO: ROUTE:
  198. BENDAMUSTINE [Suspect]
     Active Substance: BENDAMUSTINE
     Dosage: UNKUNK/ADDITIONAL INFO: ROUTE:UNKNOWNADDITIONAL INFO: ROUTE:
  199. BENDAMUSTINE [Suspect]
     Active Substance: BENDAMUSTINE
     Dosage: UNKUNK/ADDITIONAL INFO: ROUTE:UNKNOWNADDITIONAL INFO: ROUTE:
  200. BENDAMUSTINE [Suspect]
     Active Substance: BENDAMUSTINE
     Indication: Product used for unknown indication
     Dosage: UNK
     Route: 050
  201. BENDAMUSTINE [Suspect]
     Active Substance: BENDAMUSTINE
     Dosage: UNK
     Route: 050
  202. DOXORUBICIN HYDROCHLORIDE [Suspect]
     Active Substance: DOXORUBICIN HYDROCHLORIDE
     Indication: Diffuse large B-cell lymphoma
     Dosage: 50 MILLIGRAM/SQ. METER, 3XW (50 MG/M2, TIW (DATE OF MOST RECENT DOSE PRIOR TO FIRST EPISODE OF NEUTR
     Route: 042
     Dates: start: 20201124
  203. DOXORUBICIN HYDROCHLORIDE [Suspect]
     Active Substance: DOXORUBICIN HYDROCHLORIDE
     Dosage: CUMULATIVE DOSE TO FIRST REACTION:10 MG
     Dates: start: 20201124
  204. DOXORUBICIN HYDROCHLORIDE [Suspect]
     Active Substance: DOXORUBICIN HYDROCHLORIDE
     Dosage: UNK; PEGYLATED LIPOSOMAL 2 MG/ML CONCENTRATE FOR SOLUTION FOR INFUSION
     Dates: start: 20201124
  205. DOXORUBICIN HYDROCHLORIDE [Suspect]
     Active Substance: DOXORUBICIN HYDROCHLORIDE
     Dosage: 50 MG/M2 (TIME INTERVAL: 0.33 WEEK); 50 MG/M2, TIW (DATE OF MOST RECENT DOSE PRIOR TO FIRST EPISODE
     Route: 065
     Dates: start: 20201124
  206. DOXORUBICIN HYDROCHLORIDE [Suspect]
     Active Substance: DOXORUBICIN HYDROCHLORIDE
     Dosage: 1500 MG/M2
     Dates: start: 20201124
  207. DOXORUBICIN HYDROCHLORIDE [Suspect]
     Active Substance: DOXORUBICIN HYDROCHLORIDE
     Dosage: UNK
     Dates: start: 20201124
  208. DOXORUBICIN HYDROCHLORIDE [Suspect]
     Active Substance: DOXORUBICIN HYDROCHLORIDE
     Dosage: (DOSAGE TEXT: 50 MG/M2, TIW (DATE OF MOST RECENT DOSE PRIOR TO FIRST EPISODE OF NEUTROPENIA (TOTAL V
     Route: 065
     Dates: start: 20201124
  209. CYCLOPHOSPHAMIDE [Suspect]
     Active Substance: CYCLOPHOSPHAMIDE
     Indication: Diffuse large B-cell lymphoma
     Dosage: 3780 MG/M2 EVERY 3 WEEKS/TOTAL VOLUME PRIOR AE 313 ML/DATE OF MOST RECENT DOSE PRIOR TO FIRST EPISOD
     Route: 042
     Dates: start: 20201124
  210. CYCLOPHOSPHAMIDE [Suspect]
     Active Substance: CYCLOPHOSPHAMIDE
     Dosage: 750 MG/M2
     Route: 042
  211. CYCLOPHOSPHAMIDE [Suspect]
     Active Substance: CYCLOPHOSPHAMIDE
     Dosage: 750 MG/M2 EVERY 3 WEEKS
     Route: 042
  212. CYCLOPHOSPHAMIDE [Suspect]
     Active Substance: CYCLOPHOSPHAMIDE
     Dosage: 750 MG/M2 EVERY 3 WEEKS
     Route: 042
  213. CYCLOPHOSPHAMIDE [Suspect]
     Active Substance: CYCLOPHOSPHAMIDE
     Dosage: UNK; ADDITIONAL INFO: ROUTE:/ ADDITIONAL INFO: ROUTE:UNKNOWN ROUTE:UNKNOWN ROUTE:UNKNOWN ROUTE:UNKNO
     Route: 042
  214. CYCLOPHOSPHAMIDE [Suspect]
     Active Substance: CYCLOPHOSPHAMIDE
     Dosage: UNK
     Route: 050
  215. CYCLOPHOSPHAMIDE [Suspect]
     Active Substance: CYCLOPHOSPHAMIDE
     Dosage: 1260 MG/M2 (TOTAL VOLUME: 313 ML)
     Route: 042
     Dates: start: 20201215, end: 20201215
  216. CYCLOPHOSPHAMIDE [Suspect]
     Active Substance: CYCLOPHOSPHAMIDE
     Dosage: 1260 MG/M2
     Route: 042
     Dates: start: 20210105, end: 20210105
  217. CYCLOPHOSPHAMIDE [Suspect]
     Active Substance: CYCLOPHOSPHAMIDE
     Dosage: 1260 MG/M2
     Route: 042
     Dates: start: 20210126, end: 20210126
  218. CYCLOPHOSPHAMIDE [Suspect]
     Active Substance: CYCLOPHOSPHAMIDE
     Dosage: 1260 MG/M2
     Route: 042
     Dates: start: 20210216
  219. CYCLOPHOSPHAMIDE [Suspect]
     Active Substance: CYCLOPHOSPHAMIDE
     Dosage: 1260 MG/M2
     Route: 042
     Dates: start: 20210309, end: 20210309
  220. CYCLOPHOSPHAMIDE [Suspect]
     Active Substance: CYCLOPHOSPHAMIDE
     Dosage: UNK, DOSAGE FORM: SOLUTION FOR INFUSION/ ADDITIONAL INFO: ROUTE:UNKNOWN ROUTE:UNKNOWN ROUTE:UNKNOWN
     Route: 065
  221. CYCLOPHOSPHAMIDE [Suspect]
     Active Substance: CYCLOPHOSPHAMIDE
     Dosage: UNK, DOSAGE FORM: SOLUTION FOR INFUSION/ ADDITIONAL INFO: ROUTE:UNKNOWN ROUTE:UNKNOWN ROUTE:UNKNOWN
     Route: 042
  222. CYCLOPHOSPHAMIDE [Suspect]
     Active Substance: CYCLOPHOSPHAMIDE
     Dosage: UNK; ADDITIONAL INFO: ROUTE:UNKNOWN ROUTE:UNKNOWN ROUTE:UNKNOWN ROUTE:UNKNOWN ROUTE:UNKNOWNADDITIONA
     Route: 042
  223. CYCLOPHOSPHAMIDE [Suspect]
     Active Substance: CYCLOPHOSPHAMIDE
     Dosage: UNK; ADDITIONAL INFO: ROUTE:UNKNOWN ROUTE:UNKNOWN ROUTE:UNKNOWN ROUTE:UNKNOWN ROUTE:UNKNOWNADDITIONA
     Route: 042
  224. CYCLOPHOSPHAMIDE [Suspect]
     Active Substance: CYCLOPHOSPHAMIDE
     Dosage: 3780 MG/M2 EVERY 3 WEEKS/TOTAL VOLUME PRIOR AE 313 ML/DATE OF MOST RECENT DOSE PRIOR TO FIRST EPISOD
     Route: 042
     Dates: start: 20201124
  225. CYCLOPHOSPHAMIDE [Suspect]
     Active Substance: CYCLOPHOSPHAMIDE
     Dosage: 3780 MG/M2 EVERY 3 WEEKS/TOTAL VOLUME PRIOR AE 313 ML/DATE OF MOST RECENT DOSE PRIOR TO FIRST EPISOD
     Route: 042
     Dates: start: 20201124
  226. CYCLOPHOSPHAMIDE [Suspect]
     Active Substance: CYCLOPHOSPHAMIDE
     Dosage: TOTAL VOLUME PRIOR AE 313 ML, DATE OF MOST RECENT DOSE PRIOR TO FIRST EPISODE OF NEUTROPENIA 24/NO..
     Route: 042
     Dates: start: 20201124
  227. CYCLOPHOSPHAMIDE [Suspect]
     Active Substance: CYCLOPHOSPHAMIDE
     Dosage: TOTAL VOLUME PRIOR AE 313 ML, DATE OF MOST RECENT DOSE PRIOR TO FIRST EPISODE OF NEUTROPENIA 24/NO..
     Route: 042
     Dates: start: 20201124
  228. CYCLOPHOSPHAMIDE [Suspect]
     Active Substance: CYCLOPHOSPHAMIDE
     Dosage: TOTAL VOLUME PRIOR AE 313 ML, DATE OF MOST RECENT DOSE PRIOR TO FIRST EPISODE OF NEUTROPENIA 24/NO..
     Route: 042
     Dates: start: 20201124
  229. CYCLOPHOSPHAMIDE [Suspect]
     Active Substance: CYCLOPHOSPHAMIDE
     Dosage: UNK; ADDITIONAL INFO: ROUTE:UNKNOWN ROUTE:UNKNOWN ROUTE:UNKNOWN ROUTE:UNKNOWN ROUTE:UNKNOWNADDITIONA
     Route: 042
  230. CYCLOPHOSPHAMIDE [Suspect]
     Active Substance: CYCLOPHOSPHAMIDE
     Dosage: UNK; ADDITIONAL INFO: ROUTE:UNKNOWN ROUTE:UNKNOWN ROUTE:UNKNOWN ROUTE:UNKNOWN ROUTE:UNKNOWNADDITIONA
     Route: 042
  231. CYCLOPHOSPHAMIDE [Suspect]
     Active Substance: CYCLOPHOSPHAMIDE
     Dosage: UNK; ADDITIONAL INFO: ROUTE:UNKNOWN ROUTE:UNKNOWN ROUTE:UNKNOWN ROUTE:UNKNOWN ROUTE:UNKNOWNADDITIONA
     Route: 042
  232. CYCLOPHOSPHAMIDE [Suspect]
     Active Substance: CYCLOPHOSPHAMIDE
     Dosage: UNK; ADDITIONAL INFO: ROUTE:UNKNOWN ROUTE:UNKNOWN ROUTE:UNKNOWN ROUTE:UNKNOWN ROUTE:UNKNOWNADDITIONA
     Route: 042
  233. CYCLOPHOSPHAMIDE [Suspect]
     Active Substance: CYCLOPHOSPHAMIDE
     Dosage: UNK; ADDITIONAL INFO: ROUTE:UNKNOWN ROUTE:UNKNOWN ROUTE:UNKNOWN ROUTE:UNKNOWN ROUTE:UNKNOWNADDITIONA
     Route: 042
  234. CYCLOPHOSPHAMIDE [Suspect]
     Active Substance: CYCLOPHOSPHAMIDE
     Dosage: UNK; ADDITIONAL INFO: ROUTE:UNKNOWN ROUTE:UNKNOWN ROUTE:UNKNOWN ROUTE:UNKNOWN ROUTE:UNKNOWNADDITIONA
     Route: 042
  235. CYCLOPHOSPHAMIDE [Suspect]
     Active Substance: CYCLOPHOSPHAMIDE
     Dosage: 1260 MILLIGRAM/SQ. METER, 3XW (TOTAL VOLUME PRIOR AE 313 MLDATE OF MOST RECENT DOSE PRIOR TO FIRST E
     Route: 042
     Dates: start: 20201124
  236. CYCLOPHOSPHAMIDE [Suspect]
     Active Substance: CYCLOPHOSPHAMIDE
     Dosage: 1260 MG/M2, EVERY 3 WEEK, TOTAL VOLUME PRIOR AE 313 ML, DATE OF MOSTE RECENT DOSE PRIOR TO FIRST EPI
     Route: 042
     Dates: start: 20201124
  237. CYCLOPHOSPHAMIDE [Suspect]
     Active Substance: CYCLOPHOSPHAMIDE
     Dosage: UNK
     Route: 042
  238. CYCLOPHOSPHAMIDE [Suspect]
     Active Substance: CYCLOPHOSPHAMIDE
     Dosage: UNK
     Dates: start: 20201124
  239. CYCLOPHOSPHAMIDE [Suspect]
     Active Substance: CYCLOPHOSPHAMIDE
     Dosage: UNK; ; (ADDITIONAL INFO: ROUTE:)/ ADDITIONAL INFO: ROUTE:UNKNOWN ROUTE:UNKNOWN ROUTE:UNKNOWN ROUTE:U
     Route: 065
  240. CYCLOPHOSPHAMIDE [Suspect]
     Active Substance: CYCLOPHOSPHAMIDE
     Dosage: UNK; ; (ADDITIONAL INFO: ROUTE:); ADDITIONAL INFO: ROUTE:UNKNOWN ROUTE:UNKNOWN ROUTE:UNKNOWN ROUTE:U
     Route: 065
  241. CYCLOPHOSPHAMIDE [Suspect]
     Active Substance: CYCLOPHOSPHAMIDE
     Dosage: UNK; ; (ADDITIONAL INFO: ROUTE:); ADDITIONAL INFO: ROUTE:UNKNOWN ROUTE:UNKNOWN ROUTE:UNKNOWN ROUTE:U
     Route: 065
  242. CYCLOPHOSPHAMIDE [Suspect]
     Active Substance: CYCLOPHOSPHAMIDE
     Dosage: UNK; ; ADDITIONAL INFO: ROUTE; ADDITIONAL INFO: ROUTE:UNKNOWN ROUTE:UNKNOWN ROUTE:UNKNOWN ROUTE:UNKN
     Route: 042
  243. CYCLOPHOSPHAMIDE [Suspect]
     Active Substance: CYCLOPHOSPHAMIDE
     Dosage: UNK
     Route: 042
  244. CYCLOPHOSPHAMIDE [Suspect]
     Active Substance: CYCLOPHOSPHAMIDE
     Dosage: 1260 MILLIGRAM/SQ. METER, 3XW (TOTAL VOLUME PRIOR AE 313 MLDATE OF MOST RECENT DOSE PRIOR TO FIRST
     Route: 042
  245. CYCLOPHOSPHAMIDE [Suspect]
     Active Substance: CYCLOPHOSPHAMIDE
     Dosage: 3780 MG/M2, 1260 MILLIGRAM/SQ. METER, 3XW (TOTAL VOLUME PRIOR AE 313 MLDATE OF MOST RECENT DOSE PRIO
     Route: 042
     Dates: start: 20201124
  246. CYCLOPHOSPHAMIDE [Suspect]
     Active Substance: CYCLOPHOSPHAMIDE
     Dosage: 1260 MG/M2, EVERY 3 WEEK, TOTAL VOLUME PRIOR AE 313 ML, DATE OF MOSTE RECENT DOSE PRIOR TO
     Route: 050
     Dates: start: 20201124
  247. CYCLOPHOSPHAMIDE [Suspect]
     Active Substance: CYCLOPHOSPHAMIDE
     Dosage: UNK, DOSAGE FORM: SOLUTION FOR INFUSION
     Route: 065
  248. CYCLOPHOSPHAMIDE [Suspect]
     Active Substance: CYCLOPHOSPHAMIDE
     Dosage: UNK
  249. CYCLOPHOSPHAMIDE [Suspect]
     Active Substance: CYCLOPHOSPHAMIDE
     Dosage: 3780 MG/KG
     Dates: start: 20201124
  250. CYCLOPHOSPHAMIDE [Suspect]
     Active Substance: CYCLOPHOSPHAMIDE
     Indication: Diffuse large B-cell lymphoma
     Dosage: UNK, DOSAGE FORM: SOLUTION FOR INFUSION
     Route: 042
  251. CYCLOPHOSPHAMIDE [Suspect]
     Active Substance: CYCLOPHOSPHAMIDE
     Dosage: UNK, DOSAGE FORM: SOLUTION FOR INFUSION
     Route: 042
  252. CYCLOPHOSPHAMIDE [Suspect]
     Active Substance: CYCLOPHOSPHAMIDE
     Dosage: UNK, DOSAGE FORM: SOLUTION FOR INFUSION
     Route: 042
  253. CYCLOPHOSPHAMIDE [Suspect]
     Active Substance: CYCLOPHOSPHAMIDE
     Dosage: (DOSAGE TEXT: 1260 MG/M2, EVERY 3 WEEK, TOTAL VOLUME PRIOR AE 313 ML, DATE OF MOSTE RECENT DOSE PRIO
     Route: 042
     Dates: start: 20201124
  254. CYCLOPHOSPHAMIDE [Suspect]
     Active Substance: CYCLOPHOSPHAMIDE
     Dosage: (DOSAGE TEXT: 1260 MG/M2, EVERY 3 WEEK, TOTAL VOLUME PRIOR AE 313 ML, DATE OF MOSTE RECENT DOSE PRIO
     Route: 042
     Dates: start: 20201124
  255. CYCLOPHOSPHAMIDE [Suspect]
     Active Substance: CYCLOPHOSPHAMIDE
     Dosage: (DOSAGE TEXT: 1260 MG/M2, EVERY 3 WEEK, TOTAL VOLUME PRIOR AE 313 ML, DATE OF MOSTE RECENT DOSE PRIO
     Route: 050
     Dates: start: 20201124
  256. CYCLOPHOSPHAMIDE [Suspect]
     Active Substance: CYCLOPHOSPHAMIDE
     Dosage: UNK, DOSAGE FORM: SOLUTION FOR INFUSION
     Route: 065
  257. DOXORUBICIN [Suspect]
     Active Substance: DOXORUBICIN
     Indication: Diffuse large B-cell lymphoma
     Dosage: 80 MG/M2, EVERY 3 WEEKS/DATE OF MOST RECENT DOSE PRIOR TO FIRST EPISODE OF NEUTROPENIA (TOT... / ADD
     Route: 042
     Dates: start: 20201124
  258. DOXORUBICIN [Suspect]
     Active Substance: DOXORUBICIN
     Dosage: 50 MG/M2
     Route: 042
     Dates: start: 20201124
  259. DOXORUBICIN [Suspect]
     Active Substance: DOXORUBICIN
     Dosage: 50 MG/M2
     Route: 042
  260. DOXORUBICIN [Suspect]
     Active Substance: DOXORUBICIN
     Dosage: 50 MG/M2
  261. DOXORUBICIN [Suspect]
     Active Substance: DOXORUBICIN
     Dosage: UNK
     Route: 042
  262. DOXORUBICIN [Suspect]
     Active Substance: DOXORUBICIN
     Dosage: 80 MG/M2 (TOTAL VOLUME: 50 ML)
     Route: 042
     Dates: start: 20201215, end: 20201215
  263. DOXORUBICIN [Suspect]
     Active Substance: DOXORUBICIN
     Dosage: 80 MG/M2
     Route: 042
     Dates: start: 20210105, end: 20210105
  264. DOXORUBICIN [Suspect]
     Active Substance: DOXORUBICIN
     Dosage: 80 MG/M2
     Route: 042
     Dates: start: 20210126, end: 20210126
  265. DOXORUBICIN [Suspect]
     Active Substance: DOXORUBICIN
     Dosage: 50 MG/M2
     Route: 042
     Dates: start: 20210216
  266. DOXORUBICIN [Suspect]
     Active Substance: DOXORUBICIN
     Dosage: 80 MG/M2
     Route: 042
     Dates: start: 20210309, end: 20210309
  267. DOXORUBICIN [Suspect]
     Active Substance: DOXORUBICIN
     Dosage: 80 MG/M2, EVERY 3 WEEKS, ON DAY 1 OF EACH 21 DAY CYCLE, DATE OF MOST RECENT DOSE PRIOR TO FIRST EPIS
     Route: 050
     Dates: start: 20201124
  268. DOXORUBICIN [Suspect]
     Active Substance: DOXORUBICIN
     Dosage: UNK, DOSAGE FORM: INFUSION/ ADDITIONAL INFO: ROUTE:
     Route: 050
  269. DOXORUBICIN [Suspect]
     Active Substance: DOXORUBICIN
     Dosage: UNK; ADDITIONAL INFO: ROUTE:
     Route: 065
  270. DOXORUBICIN [Suspect]
     Active Substance: DOXORUBICIN
     Dosage: UNK, DOSAGE FORM: INFUSION; ADDITIONAL INFO: ROUTE:
     Route: 042
  271. DOXORUBICIN [Suspect]
     Active Substance: DOXORUBICIN
     Dosage: EVERY 3 WEEKS; ON DAY 1 OF EACH 21-DAY CYCLE DATE OF MOST RECENT DOSE PRIOR TO FIRST EPISODE OF NEUT
     Route: 050
     Dates: start: 20201124
  272. DOXORUBICIN [Suspect]
     Active Substance: DOXORUBICIN
     Dosage: EVERY 3 WEEKS; ON DAY 1 OF EACH 21-DAY CYCLE DATE OF MOST RECENT DOSE PRIOR TO FIRST EPISODE OF NEUT
     Route: 050
     Dates: start: 20201124
  273. DOXORUBICIN [Suspect]
     Active Substance: DOXORUBICIN
     Dosage: EVERY 3 WEEKS; ON DAY 1 OF EACH 21-DAY CYCLE DATE OF MOST RECENT DOSE PRIOR TO FIRST EPISODE OF NEUT
     Route: 050
     Dates: start: 20201124
  274. DOXORUBICIN [Suspect]
     Active Substance: DOXORUBICIN
     Dosage: UNK;
     Route: 042
  275. DOXORUBICIN [Suspect]
     Active Substance: DOXORUBICIN
     Dosage: UNK, DOSAGE FORM: INFUSION
     Route: 042
  276. DOXORUBICIN [Suspect]
     Active Substance: DOXORUBICIN
     Dosage: 80 MG/M2, EVERY 3 WEEKS, ON DAY 1 OF EACH 21 DAY CYCLE, DATE OF MOST RECENT DOSE PRIOR TO FIRST EPIS
     Route: 050
     Dates: start: 20201124
  277. DOXORUBICIN [Suspect]
     Active Substance: DOXORUBICIN
     Dosage: UNK
     Dates: start: 20201124
  278. DOXORUBICIN [Suspect]
     Active Substance: DOXORUBICIN
     Dosage: 80 MG/M2 (ON DAY 1 OF EACH 21-DAY CYCLE DATE OF MOST RECENT DOSE PRIOR TO FIRST EPISODE OF NEUTROPEN
     Route: 042
     Dates: start: 20201124
  279. DOXORUBICIN [Suspect]
     Active Substance: DOXORUBICIN
     Dosage: 80 MG/M2 (ON DAY 1 OF EACH 21-DAY CYCLE DATE OF MOST RECENT DOSE PRIOR TO FIRST EPISODE OF NEUTROPEN
     Route: 042
     Dates: start: 20201124
  280. DOXORUBICIN [Suspect]
     Active Substance: DOXORUBICIN
     Dosage: 80 MG/M2 (ON DAY 1 OF EACH 21-DAY CYCLE DATE OF MOST RECENT DOSE PRIOR TO FIRST EPISODE OF NEUTROPEN
     Route: 042
     Dates: start: 20201124
  281. DOXORUBICIN [Suspect]
     Active Substance: DOXORUBICIN
     Dosage: UNK
     Route: 042
  282. DOXORUBICIN [Suspect]
     Active Substance: DOXORUBICIN
     Dosage: UNK
     Route: 042
  283. DOXORUBICIN [Suspect]
     Active Substance: DOXORUBICIN
     Dosage: UNK; ADDITIONAL INFO: ROUTE:
     Route: 042
  284. DOXORUBICIN [Suspect]
     Active Substance: DOXORUBICIN
     Dosage: UNK
     Route: 042
  285. DOXORUBICIN [Suspect]
     Active Substance: DOXORUBICIN
     Dosage: UNK
     Route: 042
  286. DOXORUBICIN [Suspect]
     Active Substance: DOXORUBICIN
     Dosage: UNK
     Route: 042
  287. DOXORUBICIN [Suspect]
     Active Substance: DOXORUBICIN
     Dosage: UNK
     Route: 042
  288. DOXORUBICIN [Suspect]
     Active Substance: DOXORUBICIN
     Dosage: UNK
     Route: 042
  289. DOXORUBICIN [Suspect]
     Active Substance: DOXORUBICIN
     Dosage: UNK
     Route: 042
  290. DOXORUBICIN [Suspect]
     Active Substance: DOXORUBICIN
     Dosage: 150 MG/M2, ONE A WEEK, 50 MG/M2, TIW (DATE OF MOST RECENT DOSE PRIOR TO FIRST EPISODE OF
     Route: 042
     Dates: start: 20201124
  291. DOXORUBICIN [Suspect]
     Active Substance: DOXORUBICIN
     Dosage: UNK
     Route: 065
     Dates: start: 20201124
  292. DOXORUBICIN [Suspect]
     Active Substance: DOXORUBICIN
     Indication: Diffuse large B-cell lymphoma
     Dosage: 150 MG/M2, ONE A WEEK, 50 MG/M2, TIW (DATE OF MOST RECENT DOSE PRIOR TO FIRST EPISODE OF NEUTROPENIA
     Dates: start: 20201124
  293. DOXORUBICIN [Suspect]
     Active Substance: DOXORUBICIN
     Dosage: UNK (DOSAGE FORM: INFUSION)
     Route: 042
  294. DOXORUBICIN [Suspect]
     Active Substance: DOXORUBICIN
     Dosage: 80 MG/M2, 3/WEEK (DOSAGE TEXT: 150 MG/M2, ONE A WEEK, 50 MG/M2, TIW (DATE OF MOST RECENT DOSE PRIOR
     Route: 042
     Dates: start: 20201124
  295. DOXORUBICIN [Suspect]
     Active Substance: DOXORUBICIN
     Dosage: 50 MG/M2 (DOSAGE TEXT: 150 MG/M2, ONE A WEEK, 50 MG/M2, TIW (DATE OF MOST RECENT DOSE PRIOR TO FIRST
     Route: 042
     Dates: start: 20201124
  296. DOXORUBICIN [Suspect]
     Active Substance: DOXORUBICIN
     Dosage: (DOSAGE TEXT: 150 MG/M2, ONE A WEEK, 50 MG/M2, TIW (DATE OF MOST RECENT DOSE PRIOR TO FIRST EPISODE
  297. DOXORUBICIN [Suspect]
     Active Substance: DOXORUBICIN
     Dosage: 80 MILLIGRAM/SQ. METER (ON DAY 1 OF EACH 21-DAY CYCLEDATE OF MOST RECENT DOSE PRIOR TO FIRST
     Route: 042
     Dates: start: 20201124
  298. DOXORUBICIN [Suspect]
     Active Substance: DOXORUBICIN
     Dosage: 80 MILLIGRAM/SQ. METER (ON DAY 1 OF EACH 21-DAY CYCLEDATE OF MOST RECENT DOSE PRIOR TO FIRST
     Route: 042
     Dates: start: 20201124
  299. DOXORUBICIN [Suspect]
     Active Substance: DOXORUBICIN
     Dosage: UNK
     Route: 042
  300. DOXORUBICIN [Suspect]
     Active Substance: DOXORUBICIN
     Dosage: UNK
     Route: 042
  301. DOXORUBICIN [Suspect]
     Active Substance: DOXORUBICIN
     Dosage: UNK
     Route: 042
  302. DOXORUBICIN [Suspect]
     Active Substance: DOXORUBICIN
     Dosage: UNK
     Route: 042
  303. DOXORUBICIN [Suspect]
     Active Substance: DOXORUBICIN
     Dosage: UNK
     Route: 042
  304. DOXORUBICIN [Suspect]
     Active Substance: DOXORUBICIN
     Dosage: UNK
     Route: 042
  305. DOXORUBICIN [Suspect]
     Active Substance: DOXORUBICIN
     Indication: Diffuse large B-cell lymphoma
     Dosage: UNK, DOSAGE FORM: INFUSION
     Route: 065
  306. DOXORUBICIN [Suspect]
     Active Substance: DOXORUBICIN
     Dosage: 80 MG/M2, EVERY 3 WEEKS, ON DAY 1 OF EACH 21 DAY CYCLE, DATE OF MOST RECENT DOSE PRIOR TO
     Route: 050
     Dates: start: 20201124
  307. DOXORUBICIN [Suspect]
     Active Substance: DOXORUBICIN
     Dosage: UNK, DOSAGE FORM: INFUSION
     Route: 065
  308. DOXORUBICIN [Suspect]
     Active Substance: DOXORUBICIN
     Dosage: 80 MG/M2, EVERY 3 WEEKS, ON DAY 1 OF EACH 21 DAY CYCLE, DATE OF MOST RECENT DOSE PRIOR TO
     Route: 050
     Dates: start: 20201124
  309. DOXORUBICIN [Suspect]
     Active Substance: DOXORUBICIN
     Dosage: 80 MG/M2, EVERY 3 WEEKS, ON DAY 1 OF EACH 21 DAY CYCLE, DATE OF MOST RECENT DOSE PRIOR TO
     Route: 050
     Dates: start: 20201124
  310. DOXORUBICIN [Suspect]
     Active Substance: DOXORUBICIN
     Dosage: UNK, DOSAGE FORM: INFUSION
     Route: 065
  311. DOXORUBICIN [Suspect]
     Active Substance: DOXORUBICIN
     Dosage: UNK
  312. DOXORUBICIN [Suspect]
     Active Substance: DOXORUBICIN
     Indication: Diffuse large B-cell lymphoma
     Dosage: 80 MG/M2, EVERY 3 WEEKS, ON DAY 1 OF EACH 21 DAY CYCLE, DATE OF MOST RECENT DOSE PRIOR TO FIRST EPIS
     Route: 042
     Dates: start: 20201124
  313. DOXORUBICIN [Suspect]
     Active Substance: DOXORUBICIN
     Dosage: 80 MG/M2, EVERY 3 WEEKS, ON DAY 1 OF EACH 21 DAY CYCLE, DATE OF MOST RECENT DOSE PRIOR TO FIRST EPIS
     Route: 042
     Dates: start: 20201124
  314. DOXORUBICIN [Suspect]
     Active Substance: DOXORUBICIN
     Dosage: UNK, DOSAGE FORM: INFUSION
     Route: 042
  315. DOXORUBICIN [Suspect]
     Active Substance: DOXORUBICIN
     Dosage: UNK, DOSAGE FORM: INFUSION
     Route: 042
  316. DOXORUBICIN [Suspect]
     Active Substance: DOXORUBICIN
     Dosage: 80 MG/M2, EVERY 3 WEEKS, ON DAY 1 OF EACH 21 DAY CYCLE, DATE OF MOST RECENT DOSE PRIOR TO FIRST EPIS
     Route: 042
     Dates: start: 20201124
  317. DOXORUBICIN [Suspect]
     Active Substance: DOXORUBICIN
     Dosage: UNK, DOSAGE FORM: INFUSION
     Route: 042
  318. DOXORUBICIN [Suspect]
     Active Substance: DOXORUBICIN
     Dosage: UNK
     Route: 065
     Dates: start: 20201124
  319. GLOFITAMAB [Suspect]
     Active Substance: GLOFITAMAB
     Indication: Diffuse large B-cell lymphoma
     Dosage: 2.5 MG EVERY 3 WEEKS / THE MOST RECENT DOSE OF RO7082859 (10 MG) WAS ADMINISTERED ON 30/DEC/2020 AT
     Route: 065
     Dates: start: 20201222
  320. GLOFITAMAB [Suspect]
     Active Substance: GLOFITAMAB
     Dosage: 2.5 MG EVERY 3 WEEKS
     Route: 042
  321. GLOFITAMAB [Suspect]
     Active Substance: GLOFITAMAB
     Dosage: 2.5 MG EVERY 3 WEEKS
     Route: 042
  322. GLOFITAMAB [Suspect]
     Active Substance: GLOFITAMAB
     Dosage: 2.5 MG EVERY 3 WEEKS
     Route: 042
  323. GLOFITAMAB [Suspect]
     Active Substance: GLOFITAMAB
     Dosage: UNK; ADDITIONAL INFO: ROUTE:
     Route: 065
  324. GLOFITAMAB [Suspect]
     Active Substance: GLOFITAMAB
     Dosage: 10 MG
     Dates: start: 20201230, end: 20201230
  325. GLOFITAMAB [Suspect]
     Active Substance: GLOFITAMAB
     Dosage: 30 MG/M2
     Dates: start: 20210119, end: 20210119
  326. GLOFITAMAB [Suspect]
     Active Substance: GLOFITAMAB
     Dosage: 30 MG
     Dates: start: 20210209, end: 20210209
  327. GLOFITAMAB [Suspect]
     Active Substance: GLOFITAMAB
     Dosage: 30 MG/M2
     Dates: start: 20210302, end: 20210302
  328. GLOFITAMAB [Suspect]
     Active Substance: GLOFITAMAB
     Dosage: 30 MG/M2
     Route: 042
     Dates: start: 20210309
  329. GLOFITAMAB [Suspect]
     Active Substance: GLOFITAMAB
     Dosage: 30 MG
     Route: 042
     Dates: start: 20210323, end: 20210323
  330. GLOFITAMAB [Suspect]
     Active Substance: GLOFITAMAB
     Dosage: UNK; ADDITIONAL INFO: ROUTE:
     Route: 065
  331. GLOFITAMAB [Suspect]
     Active Substance: GLOFITAMAB
     Dosage: UNK; ADDITIONAL INFO: ROUTE:
     Route: 065
  332. GLOFITAMAB [Suspect]
     Active Substance: GLOFITAMAB
     Dosage: EVERY 3 WEEKS; THE MOST RECENT DOSE OF RO7082859 (10 MG) WAS ADMINISTERED ON 30/DEC/2020 AT 1:30 PM
     Route: 050
     Dates: start: 20201222
  333. GLOFITAMAB [Suspect]
     Active Substance: GLOFITAMAB
     Dosage: EVERY 3 WEEKS; THE MOST RECENT DOSE OF RO7082859 (10 MG) WAS ADMINISTERED ON 30/DEC/2020 AT 1:30 PM
     Route: 050
     Dates: start: 20201222
  334. GLOFITAMAB [Suspect]
     Active Substance: GLOFITAMAB
     Dosage: EVERY 3 WEEKS; THE MOST RECENT DOSE OF RO7082859 (10 MG) WAS ADMINISTERED ON 30/DEC/2020 AT 1:30 PM
     Route: 050
     Dates: start: 20201222
  335. GLOFITAMAB [Suspect]
     Active Substance: GLOFITAMAB
     Dosage: UNK; ADDITIONAL INFO: ROUTE:
     Route: 065
  336. GLOFITAMAB [Suspect]
     Active Substance: GLOFITAMAB
     Dosage: UNK; ADDITIONAL INFO: ROUTE:
     Route: 065
  337. GLOFITAMAB [Suspect]
     Active Substance: GLOFITAMAB
     Dosage: UNK; ADDITIONAL INFO: ROUTE:
     Route: 042
  338. GLOFITAMAB [Suspect]
     Active Substance: GLOFITAMAB
     Dosage: SAME DAY PATIENT RECEIVED GLOFITAMAB ANOTHER REGIMEN
     Dates: start: 20201222
  339. GLOFITAMAB [Suspect]
     Active Substance: GLOFITAMAB
     Dosage: UNK; ADDITIONAL INFO: ROUTE:
     Route: 042
  340. GLOFITAMAB [Suspect]
     Active Substance: GLOFITAMAB
     Dosage: UNK; ADDITIONAL INFO: ROUTE:
     Route: 050
  341. GLOFITAMAB [Suspect]
     Active Substance: GLOFITAMAB
     Dosage: UNK; ADDITIONAL INFO: ROUTE:
     Route: 042
  342. GLOFITAMAB [Suspect]
     Active Substance: GLOFITAMAB
     Dosage: UNK; ADDITIONAL INFO: ROUTE:
     Route: 042
  343. GLOFITAMAB [Suspect]
     Active Substance: GLOFITAMAB
     Dosage: UNK; ADDITIONAL INFO: ROUTE:
     Route: 050
  344. GLOFITAMAB [Suspect]
     Active Substance: GLOFITAMAB
     Dosage: UNK; ADDITIONAL INFO: ROUTE:
     Route: 050
  345. GLOFITAMAB [Suspect]
     Active Substance: GLOFITAMAB
     Dosage: UNK; ADDITIONAL INFO: ROUTE:
     Route: 042
  346. GLOFITAMAB [Suspect]
     Active Substance: GLOFITAMAB
     Dosage: 2.5 MILLIGRAM, Q3W (THE MOST RECENT DOSE OF RO7082859 (10 MG) WAS ADMINISTERED ON 30/DEC/2020
     Route: 042
     Dates: start: 20201222
  347. GLOFITAMAB [Suspect]
     Active Substance: GLOFITAMAB
     Dosage: UNK; ; ADDITIONAL INFO: ROUTE:
  348. GLOFITAMAB [Suspect]
     Active Substance: GLOFITAMAB
     Dosage: UNK; ; ADDITIONAL INFO: ROUTE:
     Route: 042
  349. GLOFITAMAB [Suspect]
     Active Substance: GLOFITAMAB
     Dosage: UNK; ; ADDITIONAL INFO: ROUTE:
  350. GLOFITAMAB [Suspect]
     Active Substance: GLOFITAMAB
     Dosage: 2.5 MG, EVERY 3 WEEKS, THE MOST RECENT DOSE OF RO7082859 (10 MG) WAS ADMINISTERED ON  30/DEC/2020 AT
     Route: 042
  351. GLOFITAMAB [Suspect]
     Active Substance: GLOFITAMAB
     Dosage: 2.5 MG, EVERY 3 WEEKS, THE MOST RECENT DOSE OF RO7082859 (10 MG) WAS ADMINISTERED ON 30/DEC/2020 AT
     Route: 042
     Dates: start: 20201222
  352. GLOFITAMAB [Suspect]
     Active Substance: GLOFITAMAB
     Dosage: 2.5 MG EVERY 3 WEEKS
  353. GLOFITAMAB [Suspect]
     Active Substance: GLOFITAMAB
     Dosage: UNK
     Route: 042
  354. GLOFITAMAB [Suspect]
     Active Substance: GLOFITAMAB
     Dosage: 2.5 MG, EVERY 3 WEEKS, THE MOST RECENT DOSE OF RO7082859 (10 MG) WAS ADMINISTERED ON  30/DEC/2020 AT
     Route: 042
  355. GLOFITAMAB [Suspect]
     Active Substance: GLOFITAMAB
     Dosage: UNK
  356. GLOFITAMAB [Suspect]
     Active Substance: GLOFITAMAB
     Dosage: UNK; ADDITIONAL INFO: ROUTE:
  357. GLOFITAMAB [Suspect]
     Active Substance: GLOFITAMAB
     Dosage: UNK; ADDITIONAL INFO: ROUTE:
  358. GLOFITAMAB [Suspect]
     Active Substance: GLOFITAMAB
     Dosage: UNK; ADDITIONAL INFO: ROUTE:
  359. GLOFITAMAB [Suspect]
     Active Substance: GLOFITAMAB
     Dosage: UNK; ADDITIONAL INFO: ROUTE:
  360. GLOFITAMAB [Suspect]
     Active Substance: GLOFITAMAB
     Dosage: UNK
  361. GLOFITAMAB [Suspect]
     Active Substance: GLOFITAMAB
     Dosage: 2.5 MG/M2, 3/WEEK
     Route: 042
  362. GLOFITAMAB [Suspect]
     Active Substance: GLOFITAMAB
     Dosage: 2.5 MG/M2, 3/WEEK
  363. GLOFITAMAB [Suspect]
     Active Substance: GLOFITAMAB
     Dosage: 2.5 MG/M2, 2/WEEK
  364. GLOFITAMAB [Suspect]
     Active Substance: GLOFITAMAB
     Indication: Diffuse large B-cell lymphoma
     Dosage: 2.5 MG, EVERY 3 WEEKS, THE MOST RECENT DOSE OF RO7082859 (10 MG) WAS ADMINISTERED ON 30/DEC/2020 AT
     Route: 050
     Dates: start: 20201222
  365. GLOFITAMAB [Suspect]
     Active Substance: GLOFITAMAB
     Dosage: UNK
     Route: 050
  366. GLOFITAMAB [Suspect]
     Active Substance: GLOFITAMAB
     Dosage: 2.5 MG, THE MOST RECENT DOSE OF RO7082859 (10 MG) WAS ADMINISTERED ON 30/DEC/2020 AT 1:30 PM TOTAL V
     Route: 065
     Dates: start: 20201222
  367. GLOFITAMAB [Suspect]
     Active Substance: GLOFITAMAB
     Dosage: UNK
     Route: 065
  368. GLOFITAMAB [Suspect]
     Active Substance: GLOFITAMAB
     Dosage: UNK
     Route: 065
  369. GLOFITAMAB [Suspect]
     Active Substance: GLOFITAMAB
     Dosage: 2.5 MG, THE MOST RECENT DOSE OF RO7082859 (10 MG) WAS ADMINISTERED ON 30/DEC/2020 AT 1:30 PM TOTAL V
     Route: 065
     Dates: start: 20201222
  370. GLOFITAMAB [Suspect]
     Active Substance: GLOFITAMAB
     Dosage: UNK
     Route: 042
  371. GLOFITAMAB [Suspect]
     Active Substance: GLOFITAMAB
     Dosage: UNK
     Route: 042
  372. GLOFITAMAB [Suspect]
     Active Substance: GLOFITAMAB
     Dosage: 2.5 MILLIGRAM, Q3W (THE MOST RECENT DOSE OF RO7082859 (10 MG) WAS ADMINISTERED ON 30/DEC/2020
     Route: 042
     Dates: start: 20201222
  373. PREDNISOLONE [Suspect]
     Active Substance: PREDNISOLONE
     Indication: Diffuse large B-cell lymphoma
     Dosage: 100 MG / DATE OF MOST RECENT DOSE PRIOR TO FIRST EPISODE OF NEUTROPENIA 24/NOV/20220, DATE OF MOST R
     Route: 048
     Dates: start: 20201124
  374. PREDNISOLONE [Suspect]
     Active Substance: PREDNISOLONE
     Dosage: 100 MG/M2 / PRIOR TO FIRST OCCURRENCE OF NEUTROPENIA
     Route: 048
     Dates: start: 20201128
  375. PREDNISOLONE [Suspect]
     Active Substance: PREDNISOLONE
     Dosage: 100 MG/M2
     Route: 048
     Dates: start: 20201215
  376. PREDNISOLONE [Suspect]
     Active Substance: PREDNISOLONE
     Dosage: 100 MG
     Route: 048
     Dates: start: 20210109
  377. PREDNISOLONE [Suspect]
     Active Substance: PREDNISOLONE
     Dosage: 100 MG/M2
     Route: 048
     Dates: start: 20210218, end: 20210218
  378. PREDNISOLONE [Suspect]
     Active Substance: PREDNISOLONE
     Dosage: MOST RECENT DOSE OF PREDNISOLONE PRIOR TO AE
     Dates: start: 20210220
  379. PREDNISOLONE [Suspect]
     Active Substance: PREDNISOLONE
     Dosage: 100 MG
     Route: 048
     Dates: start: 20210309
  380. PREDNISOLONE [Suspect]
     Active Substance: PREDNISOLONE
     Dosage: UNK; ADDITIONAL INFO: ROUTE:
     Route: 048
     Dates: start: 20201118, end: 20201122
  381. PREDNISOLONE [Suspect]
     Active Substance: PREDNISOLONE
     Dosage: DATE OF MOST RECENT DOSE PRIOR TO FIRST EPISODE OF NEUTROPENIA 24/NOV/20220, DATE OF MOST RECENT D..
     Route: 048
     Dates: start: 20201124
  382. PREDNISOLONE [Suspect]
     Active Substance: PREDNISOLONE
     Dosage: DATE OF MOST RECENT DOSE PRIOR TO FIRST EPISODE OF NEUTROPENIA 24/NOV/20220, DATE OF MOST RECENT D..
     Route: 065
     Dates: start: 20201124
  383. PREDNISOLONE [Suspect]
     Active Substance: PREDNISOLONE
     Dosage: UNK
     Route: 065
  384. PREDNISOLONE [Suspect]
     Active Substance: PREDNISOLONE
     Dosage: UNK
     Route: 065
  385. PREDNISOLONE [Suspect]
     Active Substance: PREDNISOLONE
     Dosage: UNK; ADDITIONAL INFO: ROUTE:
     Route: 065
     Dates: start: 20201118, end: 20201122
  386. PREDNISOLONE [Suspect]
     Active Substance: PREDNISOLONE
     Dosage: 100 MG / DATE OF MOST RECENT DOSE PRIOR TO FIRST EPISODE OF NEUTROPENIA 24/NOV/20220, 1 TOTAL; DATE
     Route: 048
     Dates: start: 20201124
  387. PREDNISOLONE [Suspect]
     Active Substance: PREDNISOLONE
     Dosage: UNK
     Route: 048
     Dates: start: 20201124
  388. PREDNISOLONE [Suspect]
     Active Substance: PREDNISOLONE
     Dosage: UNK; ADDITIONAL INFO: ROUTE:
     Route: 065
     Dates: start: 20201118, end: 20201122
  389. PREDNISOLONE [Suspect]
     Active Substance: PREDNISOLONE
     Dosage: 100 MG, 1 TOTAL (DOSAGE TEXT: DATE OF MOST RECENT DOSE PRIOR TO FIRST EPISODE OF NEUTROPENIA 24/NOV/
     Route: 048
     Dates: start: 20201124
  390. PREDNISOLONE [Suspect]
     Active Substance: PREDNISOLONE
     Dosage: 100 MG (DOSAGE TEXT: DATE OF MOST RECENT DOSE PRIOR TO FIRST EPISODE OF NEUTROPENIA 24/NOV/2020. DAT
     Dates: start: 20201124
  391. PREDNISOLONE [Suspect]
     Active Substance: PREDNISOLONE
     Dosage: UNK
     Dates: start: 20201118, end: 20201122
  392. PREDNISOLONE [Suspect]
     Active Substance: PREDNISOLONE
     Dosage: (DOSAGE TEXT: UNK ROUTE OF ADMIN (FREE TEXT): UNKNOWN ROUTE); ADDITIONAL INFO: ROUTE:
     Dates: start: 20201118, end: 20201122
  393. PREDNISOLONE [Suspect]
     Active Substance: PREDNISOLONE
     Dosage: (DOSAGE TEXT: UNK ROUTE OF ADMIN (FREE TEXT): UNKNOWN ROUTE); ADDITIONAL INFO: ROUTE:
  394. PREDNISOLONE [Suspect]
     Active Substance: PREDNISOLONE
     Dosage: (DOSAGE TEXT: UNK ROUTE OF ADMIN (FREE TEXT): UNKNOWN ROUTE); ADDITIONAL INFO: ROUTE:
  395. PREDNISOLONE [Suspect]
     Active Substance: PREDNISOLONE
     Dosage: UNK; ADDITIONAL INFO: ROUTE:
  396. PREDNISOLONE [Suspect]
     Active Substance: PREDNISOLONE
     Dosage: UNK; ADDITIONAL INFO: ROUTE:
  397. PREDNISOLONE [Suspect]
     Active Substance: PREDNISOLONE
     Dosage: UNK
     Dates: start: 20201118, end: 20201122
  398. PREDNISOLONE [Suspect]
     Active Substance: PREDNISOLONE
     Dosage: (DOSAGE TEXT: 100 MG, DATE OF MOST RECENT DOSE PRIOR TO FIRST EPISODE OF NEUTROPENIA 24/NOV/202. DAT
     Dates: start: 20201124
  399. PREDNISOLONE [Suspect]
     Active Substance: PREDNISOLONE
     Dosage: UNKUNK
     Dates: start: 20201118, end: 20201122
  400. PREDNISOLONE [Suspect]
     Active Substance: PREDNISOLONE
     Dosage: UNKUNK
     Dates: start: 20201118, end: 20201122
  401. PREDNISOLONE [Suspect]
     Active Substance: PREDNISOLONE
     Dosage: UNK
     Route: 048
     Dates: end: 20201122
  402. PREDNISOLONE [Suspect]
     Active Substance: PREDNISOLONE
     Indication: Diffuse large B-cell lymphoma
     Dosage: 100 MG
     Route: 048
     Dates: start: 20201118, end: 20201122
  403. PREDNISOLONE [Suspect]
     Active Substance: PREDNISOLONE
     Dosage: 100 MG (DOSAGE TEXT: 100 MILLIGRAM (DATE OF MOST RECENT DOSE PRIOR TO FIRST EPISODE OF NEUTROPENIA 2
     Route: 048
     Dates: start: 20201124
  404. PREDNISOLONE [Suspect]
     Active Substance: PREDNISOLONE
     Dosage: 100 MILLIGRAM (DATE OF MOST RECENT DOSE PRIOR TO FIRST EPISODE OF NEUTROPENIA 24/NOV/2020.DATE OF
     Dates: start: 20201124
  405. PREDNISOLONE [Suspect]
     Active Substance: PREDNISOLONE
     Dosage: (DOSAGE TEXT: 100 MILLIGRAM (DATE OF MOST RECENT DOSE PRIOR TO FIRST EPISODE OF NEUTROPENIA 24/NOV/2
     Dates: start: 20201124
  406. PREDNISOLONE [Suspect]
     Active Substance: PREDNISOLONE
     Dosage: UNK
  407. PREDNISOLONE [Suspect]
     Active Substance: PREDNISOLONE
     Dosage: UNK
  408. PREDNISOLONE [Suspect]
     Active Substance: PREDNISOLONE
     Indication: Diffuse large B-cell lymphoma
     Dosage: UNK
     Route: 065
     Dates: start: 20201124
  409. PREDNISOLONE [Suspect]
     Active Substance: PREDNISOLONE
     Dosage: (DOSAGE TEXT: 100 MG, DATE OF MOST RECENT DOSE PRIOR TO FIRST EPISODE OF NEUTROPENIA 24/NOV/202. DAT
     Route: 050
     Dates: start: 20201124
  410. PREDNISOLONE [Suspect]
     Active Substance: PREDNISOLONE
     Dosage: UNK
     Route: 050
     Dates: start: 20201118, end: 20201122
  411. PREDNISOLONE [Suspect]
     Active Substance: PREDNISOLONE
     Dosage: (DOSAGE TEXT: 100 MILLIGRAM (DATE OF MOST RECENT DOSE PRIOR TO FIRST EPISODE OF NEUTROPENIA 24/NOV/2
     Route: 065
     Dates: start: 20201124
  412. PREDNISOLONE [Suspect]
     Active Substance: PREDNISOLONE
     Dosage: (DOSAGE TEXT: 100 MILLIGRAM (DATE OF MOST RECENT DOSE PRIOR TO FIRST EPISODE OF NEUTROPENIA 24/NOV/2
     Route: 048
     Dates: start: 20201124
  413. VALGANCICLOVIR [Suspect]
     Active Substance: VALGANCICLOVIR
     Indication: Cytomegalovirus viraemia
     Dosage: 900 MG/M2, TWICE A DAY
     Route: 065
     Dates: start: 20210426, end: 20210513
  414. VALGANCICLOVIR [Suspect]
     Active Substance: VALGANCICLOVIR
     Dosage: 21 MILLIGRAM/SQ. METER (CUMULATIVE DOSE 21 MG/M2)
     Route: 065
     Dates: start: 20210426, end: 20210513
  415. VALGANCICLOVIR [Suspect]
     Active Substance: VALGANCICLOVIR
     Dosage: UNK; ADDITIONAL INFO: ROUTE:
     Dates: start: 20210426, end: 20210513
  416. VALGANCICLOVIR [Suspect]
     Active Substance: VALGANCICLOVIR
     Dosage: UNK; ADDITIONAL INFO: ROUTE:
     Dates: start: 20210426, end: 20210513
  417. VALGANCICLOVIR [Suspect]
     Active Substance: VALGANCICLOVIR
     Dosage: 21 MG/M2; ADDITIONAL INFO: ROUTE: / 21 MILLIGRAM/SQ. METER (CUMULATIVE DOSE 21 MG/M2)
     Dates: start: 20210426, end: 20210513
  418. VALGANCICLOVIR [Suspect]
     Active Substance: VALGANCICLOVIR
     Dosage: UNK; ADDITIONAL INFO: ROUTE:
     Route: 065
     Dates: start: 20210426, end: 20210513
  419. VALGANCICLOVIR [Suspect]
     Active Substance: VALGANCICLOVIR
     Dosage: UNK; ADDITIONAL INFO: ROUTE:
     Dates: end: 20210513
  420. VALGANCICLOVIR [Suspect]
     Active Substance: VALGANCICLOVIR
     Dosage: 21 MG/KG
     Dates: start: 20210513
  421. VALGANCICLOVIR [Suspect]
     Active Substance: VALGANCICLOVIR
     Dosage: 21 MG/KG
     Dates: start: 20210513
  422. VALGANCICLOVIR [Suspect]
     Active Substance: VALGANCICLOVIR
     Indication: Product used for unknown indication
     Dosage: UNK
     Dates: end: 20210518
  423. VALGANCICLOVIR [Suspect]
     Active Substance: VALGANCICLOVIR
     Dosage: UNK
     Dates: end: 20210518
  424. VALGANCICLOVIR [Suspect]
     Active Substance: VALGANCICLOVIR
     Dosage: UNK
     Route: 065
     Dates: start: 20210426, end: 20210513
  425. VALGANCICLOVIR [Suspect]
     Active Substance: VALGANCICLOVIR
     Indication: Cytomegalovirus viraemia
     Dosage: UNK
     Route: 050
     Dates: start: 20210426, end: 20210513
  426. VINCRISTINE [Suspect]
     Active Substance: VINCRISTINE
     Indication: Diffuse large B-cell lymphoma
     Dosage: 6 MG/M2 EVERY 3 WEEKS/TOTAL VOLUME: 50 ML/DATE OF MOST RECENT DOSE PRIOR TO FIRST EPISODE OF NEUTROP
     Route: 042
     Dates: start: 20201124
  427. VINCRISTINE [Suspect]
     Active Substance: VINCRISTINE
     Dosage: 1.4 MG/M2
     Route: 065
  428. VINCRISTINE [Suspect]
     Active Substance: VINCRISTINE
     Dosage: 1.4 MG/M2
     Route: 065
  429. VINCRISTINE [Suspect]
     Active Substance: VINCRISTINE
     Dosage: 1.4 MG/M2
     Route: 042
  430. VINCRISTINE [Suspect]
     Active Substance: VINCRISTINE
     Dosage: UNK
     Route: 065
  431. VINCRISTINE [Suspect]
     Active Substance: VINCRISTINE
     Dosage: 2 MG/M2 (TOTAL VOLUME: 50 ML)
     Route: 042
     Dates: start: 20201215, end: 20201215
  432. VINCRISTINE [Suspect]
     Active Substance: VINCRISTINE
     Dosage: 2 MG/M2
     Route: 042
     Dates: start: 20210105, end: 20210105
  433. VINCRISTINE [Suspect]
     Active Substance: VINCRISTINE
     Dosage: 2 MG/M2
     Route: 042
     Dates: start: 20210126, end: 20210126
  434. VINCRISTINE [Suspect]
     Active Substance: VINCRISTINE
     Dosage: 1.4 MG/M2
     Route: 042
     Dates: start: 20210216
  435. VINCRISTINE [Suspect]
     Active Substance: VINCRISTINE
     Dosage: 2 MG/M2
     Route: 042
     Dates: start: 20210309, end: 20210309
  436. VINCRISTINE [Suspect]
     Active Substance: VINCRISTINE
     Dosage: UNK
     Route: 065
  437. VINCRISTINE [Suspect]
     Active Substance: VINCRISTINE
     Dosage: UNK
     Route: 065
  438. VINCRISTINE [Suspect]
     Active Substance: VINCRISTINE
     Dosage: UNK
     Route: 065
  439. VINCRISTINE [Suspect]
     Active Substance: VINCRISTINE
     Dosage: UNK
     Route: 065
  440. VINCRISTINE [Suspect]
     Active Substance: VINCRISTINE
     Dosage: UNK
     Route: 065
  441. VINCRISTINE [Suspect]
     Active Substance: VINCRISTINE
     Dosage: TOTAL VOLUME: 50 ML, DATE OF MOST RECENT DOSE PRIOR TO FIRST EPISODE OF NEUTROPENIA 24/NOV/2020, S..
     Route: 065
     Dates: start: 20201124
  442. VINCRISTINE [Suspect]
     Active Substance: VINCRISTINE
     Dosage: TOTAL VOLUME: 50 MLDATE OF MOST RECENT DOSE PRIOR TO FIRST EPISODE OF NEUTROPENIA 24/NOV/2020, S...
     Route: 065
     Dates: start: 20201124
  443. VINCRISTINE [Suspect]
     Active Substance: VINCRISTINE
     Dosage: TOTAL VOLUME: 50 MLDATE OF MOST RECENT DOSE PRIOR TO FIRST EPISODE OF NEUTROPENIA 24/NOV/2020, S...
     Route: 065
     Dates: start: 20201124
  444. VINCRISTINE [Suspect]
     Active Substance: VINCRISTINE
     Dosage: UNK
     Route: 050
  445. VINCRISTINE [Suspect]
     Active Substance: VINCRISTINE
     Dosage: 2 MG/M2, EVERY 3 WEEKS
     Route: 042
     Dates: start: 20201124
  446. VINCRISTINE [Suspect]
     Active Substance: VINCRISTINE
     Dosage: UNK
     Route: 042
  447. VINCRISTINE [Suspect]
     Active Substance: VINCRISTINE
     Dosage: UNK
     Route: 042
  448. VINCRISTINE [Suspect]
     Active Substance: VINCRISTINE
     Dosage: UNK
     Route: 042
  449. VINCRISTINE [Suspect]
     Active Substance: VINCRISTINE
     Indication: Diffuse large B-cell lymphoma
     Dosage: UNK; ; ADDITIONAL INFO: ROUTE:
     Route: 065
  450. VINCRISTINE [Suspect]
     Active Substance: VINCRISTINE
     Dosage: UNK; ; (ADDITIONAL INFO: ROUTE:)
     Route: 065
  451. VINCRISTINE [Suspect]
     Active Substance: VINCRISTINE
     Dosage: UNK; ; (ADDITIONAL INFO: ROUTE:)
     Route: 065
  452. VINCRISTINE [Suspect]
     Active Substance: VINCRISTINE
     Dosage: TOTAL VOLUME: 50 ML, DATE OF MOST RECENT DOSE PRIOR TO FIRST EPISODE OF NEUTROPENIA 24/NOV/2020; ...
     Route: 065
     Dates: start: 20201124
  453. VINCRISTINE [Suspect]
     Active Substance: VINCRISTINE
     Dosage: TOTAL VOLUME: 50 ML, DATE OF MOST RECENT DOSE PRIOR TO FIRST EPISODE OF NEUTROPENIA 24/NOV/2020/ 9 M
     Route: 065
     Dates: start: 20201124
  454. VINCRISTINE [Suspect]
     Active Substance: VINCRISTINE
     Dosage: UNK (ADDITIONAL INFO: ROUTE:)
     Route: 065
  455. VINCRISTINE [Suspect]
     Active Substance: VINCRISTINE
     Dosage: UNK (ADDITIONAL INFO: ROUTE:)
     Route: 065
  456. VINCRISTINE [Suspect]
     Active Substance: VINCRISTINE
     Dosage: 9 MG/M2, THREE TIMES IN WEEK, TOTAL VOLUME: 50 ML DATE OF MOST RECENT DOSE PRIOR TO FIRST EPISODE OF
     Route: 042
     Dates: start: 20201124
  457. VINCRISTINE [Suspect]
     Active Substance: VINCRISTINE
     Dosage: 9 MG/M2, THREE TIMES IN WEEK, TOTAL VOLUME: 50 ML DATE OF MOST RECENT DOSE PRIOR TO FIRST EPISODE OF
     Route: 042
     Dates: start: 20201124
  458. VINCRISTINE [Suspect]
     Active Substance: VINCRISTINE
     Dosage: 9 MG/M2, THREE TIMES IN WEEK, TOTAL VOLUME: 50 ML DATE OF MOST RECENT DOSE PRIOR TO FIRST EPISODE OF
     Route: 042
     Dates: start: 20201124
  459. VINCRISTINE [Suspect]
     Active Substance: VINCRISTINE
     Dosage: TOTAL VOLUME: 50 ML, DATE OF MOST RECENT DOSE PRIOR TO FIRST EPISODE OF NEUTROPENIA 24/NOV/2020; ...
     Route: 050
     Dates: start: 20201124
  460. VINCRISTINE [Suspect]
     Active Substance: VINCRISTINE
     Dosage: UNK (ADDITIONAL INFO: ROUTE:)
     Route: 065
  461. VINCRISTINE [Suspect]
     Active Substance: VINCRISTINE
     Dosage: UNK (ADDITIONAL INFO: ROUTE:)
     Route: 065
  462. VINCRISTINE [Suspect]
     Active Substance: VINCRISTINE
     Dosage: UNK; ADDITIONAL INFO: ROUTE:
     Route: 065
  463. VINCRISTINE [Suspect]
     Active Substance: VINCRISTINE
     Dosage: TOTAL VOLUME: 50 ML, DATE OF MOST RECENT DOSE PRIOR TO FIRST EPISODE OF NEUTROPENIA 24/NOV/2020; ...
     Route: 050
     Dates: start: 20201124
  464. VINCRISTINE [Suspect]
     Active Substance: VINCRISTINE
     Dosage: TOTAL VOLUME: 50 ML, DATE OF MOST RECENT DOSE PRIOR TO FIRST EPISODE OF NEUTROPENIA 24/NOV/2020; ...
     Route: 050
     Dates: start: 20201124
  465. VINCRISTINE [Suspect]
     Active Substance: VINCRISTINE
     Dosage: 2 MILLIGRAM/SQ. METER, 3XW (TOTAL VOLUME: 50 MLDATE OF MOST RECENT DOSE PRIOR TO FIRST EPISODE OF NE
     Route: 042
     Dates: start: 20201124
  466. VINCRISTINE [Suspect]
     Active Substance: VINCRISTINE
     Dosage: 2 MILLIGRAM/SQ. METER, 3XW (TOTAL VOLUME: 50 MLDATE OF MOST RECENT DOSE PRIOR TO FIRST EPISODE OF NE
     Route: 042
     Dates: start: 20201124
  467. VINCRISTINE [Suspect]
     Active Substance: VINCRISTINE
     Dosage: 2 MILLIGRAM/SQ. METER, 3XW (TOTAL VOLUME: 50 MLDATE OF MOST RECENT DOSE PRIOR TO FIRST EPISODE OF NE
     Route: 042
     Dates: start: 20201124
  468. VINCRISTINE [Suspect]
     Active Substance: VINCRISTINE
     Dosage: UNK
  469. VINCRISTINE [Suspect]
     Active Substance: VINCRISTINE
     Dosage: 9 MG/M2, THREE TIMES IN WEEK, TOTAL VOLUME: 50 ML DATE OF MOST RECENT DOSE PRIOR TO FIRST EPISODE OF
     Dates: start: 20201121
  470. VINCRISTINE [Suspect]
     Active Substance: VINCRISTINE
     Dosage: 9 MG/M2, THREE TIMES IN WEEK, TOTAL VOLUME: 50 ML DATE OF MOST RECENT DOSE PRIOR TO FIRST EPISODE OF
     Dates: start: 20201121
  471. VINCRISTINE [Suspect]
     Active Substance: VINCRISTINE
     Dosage: UNK ROUTE OF ADMIN (FREE TEXT): UNKNOWN ROUTE; ADDITIONAL INFO: ROUTE:
  472. VINCRISTINE [Suspect]
     Active Substance: VINCRISTINE
     Dosage: UNK ROUTE OF ADMIN (FREE TEXT): UNKNOWN ROUTE; ADDITIONAL INFO: ROUTE:
  473. VINCRISTINE [Suspect]
     Active Substance: VINCRISTINE
     Dosage: UNK ROUTE OF ADMIN (FREE TEXT): UNKNOWN ROUTE; ADDITIONAL INFO: ROUTE:
  474. VINCRISTINE [Suspect]
     Active Substance: VINCRISTINE
     Dosage: UNK ROUTE OF ADMIN (FREE TEXT): UNKNOWN ROUTE; ADDITIONAL INFO: ROUTE:
  475. VINCRISTINE [Suspect]
     Active Substance: VINCRISTINE
     Dosage: 9 MG/M2, THREE TIMES IN WEEK, 2 MILLIGRAM/SQ. METER, TOTAL VOLUME: 50 ML DATE OF MOST RECENT DOSE PR
     Dates: start: 20201124
  476. VINCRISTINE [Suspect]
     Active Substance: VINCRISTINE
     Dosage: UNK ROUTE OF ADMIN (FREE TEXT): UNKNOWN ROUTE
  477. VINCRISTINE [Suspect]
     Active Substance: VINCRISTINE
     Dosage: UNK ROUTE OF ADMIN (FREE TEXT): UNKNOWN ROUTE; ADDITIONAL INFO: ROUTE:
  478. VINCRISTINE [Suspect]
     Active Substance: VINCRISTINE
     Dosage: 9 MG/M2, THREE TIMES IN WEEK, TOTAL VOLUME: 50 ML DATE OF MOST RECENT DOSE PRIOR TO FIRST EPISODE OF
     Dates: start: 20201124
  479. VINCRISTINE [Suspect]
     Active Substance: VINCRISTINE
     Dosage: 9 MG/M2, THREE TIMES IN WEEK, TOTAL VOLUME: 50 ML DATE OF MOST RECENT DOSE PRIOR TO FIRST EPISODE OF
     Dates: start: 20201124
  480. VINCRISTINE [Suspect]
     Active Substance: VINCRISTINE
     Dosage: 9 MG/M2, THREE TIMES IN WEEK, TOTAL VOLUME: 50 ML DATE OF MOST RECENT DOSE PRIOR TO FIRST EPISODE OF
     Route: 042
     Dates: start: 20201124
  481. VINCRISTINE [Suspect]
     Active Substance: VINCRISTINE
     Dosage: UNK ROUTE OF ADMIN (FREE TEXT): UNKNOWN ROUTE
  482. VINCRISTINE [Suspect]
     Active Substance: VINCRISTINE
     Dosage: 9 MG/M2, THREE TIMES IN WEEK, TOTAL VOLUME: 50 ML DATE OF MOST RECENT DOSE PRIOR TO FIRST EPISODE OF
     Dates: start: 20201124
  483. VINCRISTINE [Suspect]
     Active Substance: VINCRISTINE
     Dosage: UNK ROUTE OF ADMIN (FREE TEXT): UNKNOWN ROUTE; ADDITIONAL INFO: ROUTE:
  484. VINCRISTINE [Suspect]
     Active Substance: VINCRISTINE
     Dosage: 9 MG/M2, THREE TIMES IN WEEK, TOTAL VOLUME: 50 ML DATE OF MOST RECENT DOSE PRIOR TO FIRST EPISODE OF
     Route: 042
     Dates: start: 20201124
  485. VINCRISTINE [Suspect]
     Active Substance: VINCRISTINE
     Dosage: UNK ROUTE OF ADMIN (FREE TEXT): UNKNOWN ROUTE; ADDITIONAL INFO: ROUTE:
  486. VINCRISTINE [Suspect]
     Active Substance: VINCRISTINE
     Dosage: 9 MG/M2, THREE TIMES IN WEEK, TOTAL VOLUME: 50 ML DATE OF MOST RECENT DOSE PRIOR TO FIRST EPISODE OF
     Dates: start: 20201124
  487. VINCRISTINE [Suspect]
     Active Substance: VINCRISTINE
     Dosage: 2 MG/M2, Q3W
     Dates: start: 20201124
  488. VINCRISTINE [Suspect]
     Active Substance: VINCRISTINE
     Dosage: 9 MILLIGRAM/SQ. METER, 3XW (9 MG/M2, THREE TIMES IN WEEK, TOTAL VOLUME: 50 ML DATE OF MOST RECENT DO
     Route: 042
     Dates: start: 20201124
  489. VINCRISTINE [Suspect]
     Active Substance: VINCRISTINE
     Dosage: 6 MG, MG/M2, OTAL VOLUME: 50 ML, DATE OF MOST RECENT DOSE PRIOR TO FIRST EPISODE OF NEUTROPENIA 24/N
     Dates: start: 20201124
  490. VINCRISTINE [Suspect]
     Active Substance: VINCRISTINE
     Dosage: 6 MG, MG/M2, OTAL VOLUME: 50 ML, DATE OF MOST RECENT DOSE PRIOR TO FIRST EPISODE OF NEUTROPENIA 24/N
     Dates: start: 20201124
  491. VINCRISTINE [Suspect]
     Active Substance: VINCRISTINE
     Dosage: 2 MG/M2, 3XW
     Route: 042
     Dates: start: 20201121
  492. VINCRISTINE [Suspect]
     Active Substance: VINCRISTINE
     Dosage: 9 MG/M2, THREE TIMES IN WEEK, TOTAL VOLUME: 50 ML DATE OF MOST RECENT DOSE PRIOR TO FIRST EPISODE OF
     Dates: start: 20201124
  493. VINCRISTINE [Suspect]
     Active Substance: VINCRISTINE
     Dosage: 9 MG/M2, THREE TIMES IN WEEK, TOTAL VOLUME: 50 ML DATE OF MOST RECENT DOSE PRIOR TO FIRST EPISODE OF
     Dates: start: 20201124
  494. VINCRISTINE [Suspect]
     Active Substance: VINCRISTINE
     Dosage: 9 MG/M2, THREE TIMES IN WEEK, TOTAL VOLUME: 50 ML DATE OF MOST RECENT DOSE PRIOR TO FIRST EPISODE OF
     Dates: start: 20201124
  495. VINCRISTINE [Suspect]
     Active Substance: VINCRISTINE
     Dosage: 9 MG/M2, THREE TIMES IN WEEK, TOTAL VOLUME: 50 ML DATE OF MOST RECENT DOSE PRIOR TO FIRST EPISODE OF
     Dates: start: 20201124
  496. VINCRISTINE [Suspect]
     Active Substance: VINCRISTINE
     Dosage: 2 MG/M2, 3XW
     Route: 042
     Dates: start: 20201121
  497. VINCRISTINE [Suspect]
     Active Substance: VINCRISTINE
     Dosage: 9 MG/M2, THREE TIMES IN WEEK, TOTAL VOLUME: 50 ML DATE OF MOST RECENT DOSE PRIOR TO FIRST EPISODE OF
     Dates: start: 20201124
  498. VINCRISTINE [Suspect]
     Active Substance: VINCRISTINE
     Dosage: 9 MG/M2, THREE TIMES IN WEEK, TOTAL VOLUME: 50 ML DATE OF MOST RECENT DOSE PRIOR TO FIRST EPISODE OF
     Dates: start: 20201124
  499. VINCRISTINE [Suspect]
     Active Substance: VINCRISTINE
     Indication: Diffuse large B-cell lymphoma
     Dosage: 9 MG/M2, THREE TIMES IN WEEK, TOTAL VOLUME: 50 ML DATE OF MOST RECENT DOSE PRIOR TO FIRST EPISODE OF
     Dates: start: 20201124
  500. VINCRISTINE [Suspect]
     Active Substance: VINCRISTINE
     Dosage: 9 MG/M2, THREE TIMES IN WEEK, TOTAL VOLUME: 50 ML DATE OF MOST RECENT DOSE PRIOR TO FIRST EPISODE OF
     Route: 042
     Dates: start: 20201124
  501. VINCRISTINE [Suspect]
     Active Substance: VINCRISTINE
     Dosage: 2 MG/M2, 3/WEEK
     Route: 042
     Dates: start: 20201124
  502. VINCRISTINE [Suspect]
     Active Substance: VINCRISTINE
     Dosage: 9 MG/M2, THREE TIMES IN WEEK, TOTAL VOLUME: 50 ML DATE OF MOST RECENT DOSE PRIOR TO FIRST EPISODE OF
     Dates: start: 20201124
  503. VINCRISTINE [Suspect]
     Active Substance: VINCRISTINE
     Dosage: UNK; ADDITIONAL INFO: ROUTE:
  504. VINCRISTINE [Suspect]
     Active Substance: VINCRISTINE
     Dosage: UNK; ADDITIONAL INFO: ROUTE:
  505. VINCRISTINE [Suspect]
     Active Substance: VINCRISTINE
     Dosage: UNK; ; ADDITIONAL INFO: ROUTE:
  506. VINCRISTINE [Suspect]
     Active Substance: VINCRISTINE
     Dosage: UNK; ; ADDITIONAL INFO: ROUTE:
  507. VINCRISTINE [Suspect]
     Active Substance: VINCRISTINE
     Dosage: UNK; ; ADDITIONAL INFO: ROUTE:
  508. VINCRISTINE [Suspect]
     Active Substance: VINCRISTINE
     Dosage: UNK; ; ADDITIONAL INFO: ROUTE:
  509. VINCRISTINE [Suspect]
     Active Substance: VINCRISTINE
     Dosage: UNK ROUTE OF ADMIN (FREE TEXT): UNKNOWN ROUTE; ADDITIONAL INFO: ROUTE:
  510. VINCRISTINE [Suspect]
     Active Substance: VINCRISTINE
     Dosage: UNK ROUTE OF ADMIN (FREE TEXT): UNKNOWN ROUTE; ADDITIONAL INFO: ROUTE:
  511. VINCRISTINE [Suspect]
     Active Substance: VINCRISTINE
     Dosage: UNK ROUTE OF ADMIN (FREE TEXT): UNKNOWN ROUTE; ADDITIONAL INFO: ROUTE:
  512. VINCRISTINE [Suspect]
     Active Substance: VINCRISTINE
     Dosage: 9 MG/M2, THREE TIMES IN WEEK, TOTAL VOLUME: 50 ML DATE OF MOST RECENT DOSE PRIOR TO FIRST
     Route: 042
     Dates: start: 20201121
  513. VINCRISTINE [Suspect]
     Active Substance: VINCRISTINE
     Dosage: 9 MG/M2, THREE TIMES IN WEEK, TOTAL VOLUME: 50 ML DATE OF MOST RECENT DOSE PRIOR TO FIRST
     Route: 042
  514. VINCRISTINE [Suspect]
     Active Substance: VINCRISTINE
     Dosage: 6MG/M2 1 PER WEEK (DOSAGE TEXT: 9 MG/M2, THREE TIMES IN WEEK, TOTAL VOLUME: 50 ML DATE OF MOST RECEN
     Dates: start: 20201121
  515. VINCRISTINE [Suspect]
     Active Substance: VINCRISTINE
     Dosage: 2 MG/M2, 3/WEEK (DOSAGE TEXT: 9 MG/M2, THREE TIMES IN WEEK, 2 MILLIGRAM/SQ. METER, TOTAL VOLUME: 50
     Dates: start: 20201124
  516. VINCRISTINE [Suspect]
     Active Substance: VINCRISTINE
     Dosage: 27 MG/M2, 1/WEEK (DOSAGE TEXT: 9 MG/M2, THREE TIMES IN WEEK, TOTAL VOLUME: 50 ML DATE OF MOST RECENT
  517. VINCRISTINE [Suspect]
     Active Substance: VINCRISTINE
     Dosage: (DOSAGE TEXT: 9 MG/M2, THREE TIMES IN WEEK, TOTAL VOLUME: 50 ML DATE OF MOST RECENT DOSE PRIOR TO FI
  518. VINCRISTINE [Suspect]
     Active Substance: VINCRISTINE
     Dosage: 9 MG/M2, THREE TIMES IN WEEK, TOTAL VOLUME: 50 ML DATE OF MOST RECENT DOSE PRIOR TO FIRST EPISODE OF
     Route: 050
     Dates: start: 20201124
  519. VINCRISTINE [Suspect]
     Active Substance: VINCRISTINE
     Dosage: UNK
     Route: 050
  520. VINCRISTINE [Suspect]
     Active Substance: VINCRISTINE
     Dosage: 9 MG/M2, THREE TIMES IN WEEK, TOTAL VOLUME: 50 ML DATE OF MOST RECENT DOSE PRIOR TO FIRST EPISODE OF
     Route: 050
     Dates: start: 20201124
  521. VINCRISTINE [Suspect]
     Active Substance: VINCRISTINE
     Dosage: UNK
     Route: 050
  522. VINCRISTINE [Suspect]
     Active Substance: VINCRISTINE
     Dosage: UNK
     Route: 050
  523. VINCRISTINE [Suspect]
     Active Substance: VINCRISTINE
     Dosage: 9 MG/M2, THREE TIMES IN WEEK, TOTAL VOLUME: 50 ML DATE OF MOST RECENT DOSE PRIOR TO FIRST EPISODE OF
     Route: 050
     Dates: start: 20201124
  524. BENDAMUSTINE HYDROCHLORIDE [Suspect]
     Active Substance: BENDAMUSTINE HYDROCHLORIDE
     Indication: Product used for unknown indication
     Dosage: UNK
     Route: 065
  525. BENDAMUSTINE HYDROCHLORIDE [Suspect]
     Active Substance: BENDAMUSTINE HYDROCHLORIDE
     Dosage: UNK
     Route: 065
  526. ALLOPURINOL [Concomitant]
     Active Substance: ALLOPURINOL
     Indication: Prophylaxis
     Dosage: ADDITIONAL INFO: ROUTE:/UNK; ;
     Route: 065
     Dates: start: 20201118
  527. ALLOPURINOL [Concomitant]
     Active Substance: ALLOPURINOL
     Dosage: UNK
     Dates: start: 20201118
  528. ALLOPURINOL [Concomitant]
     Active Substance: ALLOPURINOL
     Dosage: UNK; ADDITIONAL INFO: ROUTE:UNKNOWNADDITIONAL INFO: ROUTE:
     Dates: start: 20201118
  529. ALLOPURINOL [Concomitant]
     Active Substance: ALLOPURINOL
     Dosage: (DOSAGE TEXT: UNK ROUTE OF ADMIN (FREE TEXT): UNKNOWN ROUTE); ADDITIONAL INFO: ROUTE:UNKNOWNADDITION
     Dates: start: 20201118
  530. ALLOPURINOL [Concomitant]
     Active Substance: ALLOPURINOL
     Dosage: UNKUNK; ADDITIONAL INFO: ROUTE:UNKNOWNADDITIONAL INFO: ROUTE:
     Dates: start: 20201118
  531. ALLOPURINOL [Concomitant]
     Active Substance: ALLOPURINOL
     Dosage: UNKUNK; ADDITIONAL INFO: ROUTE:UNKNOWNADDITIONAL INFO: ROUTE:
     Dates: start: 20201118
  532. ALLOPURINOL [Concomitant]
     Active Substance: ALLOPURINOL
     Dosage: (DOSAGE TEXT: UNK ROUTE OF ADMIN (FREE TEXT): UNKNOWN ROUTE); ADDITIONAL INFO: ROUTE:UNKNOWNADDITION
     Dates: start: 20201118
  533. ALLOPURINOL [Concomitant]
     Active Substance: ALLOPURINOL
     Dosage: UNK; ADDITIONAL INFO: ROUTE:UNKNOWNADDITIONAL INFO: ROUTE:
     Dates: start: 20201118
  534. ALLOPURINOL [Concomitant]
     Active Substance: ALLOPURINOL
     Dosage: (DOSAGE TEXT: UNK ROUTE OF ADMIN (FREE TEXT): UNKNOWN ROUTE); ADDITIONAL INFO: ROUTE:UNKNOWNADDITION
     Dates: start: 20201118
  535. ALLOPURINOL [Concomitant]
     Active Substance: ALLOPURINOL
     Dosage: (DOSAGE TEXT: UNK ROUTE OF ADMIN (FREE TEXT): UNKNOWN ROUTE); ADDITIONAL INFO: ROUTE:UNKNOWNADDITION
     Dates: start: 20201118
  536. ALLOPURINOL [Concomitant]
     Active Substance: ALLOPURINOL
     Dosage: (DOSAGE TEXT: UNK ROUTE OF ADMIN (FREE TEXT): UNKNOWN ROUTE); ADDITIONAL INFO: ROUTE:UNKNOWNADDITION
     Dates: start: 20201118
  537. ALLOPURINOL [Concomitant]
     Active Substance: ALLOPURINOL
     Dosage: (DOSAGE TEXT: UNK ROUTE OF ADMIN (FREE TEXT): UNKNOWN ROUTE); ADDITIONAL INFO: ROUTE:UNKNOWNADDITION
     Dates: start: 20201118
  538. ALLOPURINOL [Concomitant]
     Active Substance: ALLOPURINOL
     Dosage: (DOSAGE TEXT: UNK ROUTE OF ADMIN (FREE TEXT): UNKNOWN ROUTE); ADDITIONAL INFO: ROUTE:UNKNOWNADDITION
     Dates: start: 20201118
  539. CHLORPHENIRAMINE MALEATE [Concomitant]
     Active Substance: CHLORPHENIRAMINE MALEATE
     Indication: Prophylaxis
     Dosage: 10 MG EVRY 3 WEEKS / DOSE LAST STUDY DRUG ADMIN PRIOR AE 1260 MG START AD END DATE OF MOST RECENT DO
     Route: 065
     Dates: start: 20201124, end: 20201124
  540. CHLORPHENIRAMINE MALEATE [Concomitant]
     Active Substance: CHLORPHENIRAMINE MALEATE
     Indication: Rash maculo-papular
     Dosage: 10 MG
     Route: 042
     Dates: start: 20201215, end: 20201215
  541. CHLORPHENIRAMINE MALEATE [Concomitant]
     Active Substance: CHLORPHENIRAMINE MALEATE
     Dosage: 10 MG
     Route: 042
     Dates: start: 20210126, end: 20210126
  542. CHLORPHENIRAMINE MALEATE [Concomitant]
     Active Substance: CHLORPHENIRAMINE MALEATE
     Dosage: 10 MG
     Route: 042
     Dates: start: 20210302, end: 20210302
  543. CHLORPHENIRAMINE MALEATE [Concomitant]
     Active Substance: CHLORPHENIRAMINE MALEATE
     Dosage: 10 MG
     Route: 042
     Dates: start: 20210323, end: 20210323
  544. CHLORPHENIRAMINE MALEATE [Concomitant]
     Active Substance: CHLORPHENIRAMINE MALEATE
     Dosage: 10 MG
     Route: 042
     Dates: start: 20210216, end: 20210216
  545. CHLORPHENIRAMINE MALEATE [Concomitant]
     Active Substance: CHLORPHENIRAMINE MALEATE
     Dosage: 10 MG; DURATION: 1 DAY; ADDITIONAL INFO: ROUTE:
     Route: 042
     Dates: start: 20210119, end: 20210119
  546. CHLORPHENIRAMINE MALEATE [Concomitant]
     Active Substance: CHLORPHENIRAMINE MALEATE
     Dosage: 10 MG
     Route: 042
     Dates: start: 20210309, end: 20210309
  547. CHLORPHENIRAMINE MALEATE [Concomitant]
     Active Substance: CHLORPHENIRAMINE MALEATE
     Dosage: 10 MG
     Route: 042
     Dates: start: 20210209, end: 20210209
  548. CHLORPHENIRAMINE MALEATE [Concomitant]
     Active Substance: CHLORPHENIRAMINE MALEATE
     Dosage: 10 MG
     Route: 065
     Dates: start: 20201217
  549. CHLORPHENIRAMINE MALEATE [Concomitant]
     Active Substance: CHLORPHENIRAMINE MALEATE
     Dosage: 10 MG; DURATION: 1 DAY; ;
     Route: 050
     Dates: start: 20210323, end: 20210323
  550. CHLORPHENIRAMINE MALEATE [Concomitant]
     Active Substance: CHLORPHENIRAMINE MALEATE
     Dosage: 10 MG; DURATION: 1 DAY; ; ADDITIONAL INFO: ROUTE:
     Route: 065
     Dates: start: 20201215, end: 20201215
  551. CHLORPHENIRAMINE MALEATE [Concomitant]
     Active Substance: CHLORPHENIRAMINE MALEATE
     Dosage: 10 MG; DURATION: 1 DAY; ADDITIONAL INFO: ROUTE:
     Route: 065
     Dates: start: 20210309, end: 20210309
  552. CHLORPHENIRAMINE MALEATE [Concomitant]
     Active Substance: CHLORPHENIRAMINE MALEATE
     Dosage: 10 MG; DURATION: 1 DAY;
     Route: 065
     Dates: start: 20210119, end: 20210119
  553. CHLORPHENIRAMINE MALEATE [Concomitant]
     Active Substance: CHLORPHENIRAMINE MALEATE
     Dosage: UNK; (DOSAGE TEXT: 10 MG)
     Route: 065
     Dates: start: 20201217
  554. CHLORPHENIRAMINE MALEATE [Concomitant]
     Active Substance: CHLORPHENIRAMINE MALEATE
     Dosage: 10 MG; DURATION: 1 DAY; ADDITIONAL INFO: ROUTE:
     Route: 065
     Dates: start: 20210302, end: 20210302
  555. CHLORPHENIRAMINE MALEATE [Concomitant]
     Active Substance: CHLORPHENIRAMINE MALEATE
     Dosage: 10 MG; DURATION: 1 DAY; ADDITIONAL INFO: ROUTE:
     Route: 065
     Dates: start: 20210126, end: 20210126
  556. CHLORPHENIRAMINE MALEATE [Concomitant]
     Active Substance: CHLORPHENIRAMINE MALEATE
     Dosage: 10 MG;
     Route: 065
     Dates: start: 20210216, end: 20210216
  557. CHLORPHENIRAMINE MALEATE [Concomitant]
     Active Substance: CHLORPHENIRAMINE MALEATE
     Dosage: 10 MG; DURATION: 1 DAY; ADDITIONAL INFO: ROUTE:
     Route: 065
     Dates: start: 20210209, end: 20210209
  558. CHLORPHENIRAMINE MALEATE [Concomitant]
     Active Substance: CHLORPHENIRAMINE MALEATE
     Dosage: DOSE LAST STUDY DRUG ADMIN PRIOR AE 1260 MGSTART AD END DATE OF MOST RECENT DOSE OF STUDY DRUG PRI
     Route: 050
     Dates: start: 20210209, end: 20210209
  559. CHLORPHENIRAMINE MALEATE [Concomitant]
     Active Substance: CHLORPHENIRAMINE MALEATE
     Dosage: 10 MG;
     Route: 050
     Dates: start: 20211206, end: 20211206
  560. CHLORPHENIRAMINE MALEATE [Concomitant]
     Active Substance: CHLORPHENIRAMINE MALEATE
     Dosage: UNK
     Route: 050
     Dates: start: 20210209, end: 20210209
  561. CHLORPHENIRAMINE MALEATE [Concomitant]
     Active Substance: CHLORPHENIRAMINE MALEATE
     Dosage: UNK
     Route: 050
     Dates: start: 20210309, end: 20210309
  562. CHLORPHENIRAMINE MALEATE [Concomitant]
     Active Substance: CHLORPHENIRAMINE MALEATE
     Dosage: UNK
     Route: 050
     Dates: start: 20210302, end: 20210302
  563. CHLORPHENIRAMINE MALEATE [Concomitant]
     Active Substance: CHLORPHENIRAMINE MALEATE
     Dosage: UNK; DURATION: 1 DAY; ADDITIONAL INFO: ROUTE:
     Route: 065
     Dates: start: 20210323, end: 20210323
  564. CHLORPHENIRAMINE MALEATE [Concomitant]
     Active Substance: CHLORPHENIRAMINE MALEATE
     Dosage: UNK
     Route: 050
     Dates: start: 20210216, end: 20210216
  565. CHLORPHENIRAMINE MALEATE [Concomitant]
     Active Substance: CHLORPHENIRAMINE MALEATE
     Dosage: UNK
     Route: 065
     Dates: start: 20201217
  566. CHLORPHENIRAMINE MALEATE [Concomitant]
     Active Substance: CHLORPHENIRAMINE MALEATE
     Dosage: UNK
     Route: 050
     Dates: start: 20201215, end: 20201215
  567. CHLORPHENIRAMINE MALEATE [Concomitant]
     Active Substance: CHLORPHENIRAMINE MALEATE
     Dosage: UNK
     Route: 050
     Dates: start: 20201124, end: 20201124
  568. CHLORPHENIRAMINE MALEATE [Concomitant]
     Active Substance: CHLORPHENIRAMINE MALEATE
     Dosage: 10MG
     Route: 065
     Dates: start: 20210119, end: 20210119
  569. CHLORPHENIRAMINE MALEATE [Concomitant]
     Active Substance: CHLORPHENIRAMINE MALEATE
     Dosage: 10 MG EVRY 3 WEEKS / DOSE LAST STUDY DRUG ADMIN PRIOR AE 1260 MG START AD END DATE OF MOST RECENT DO
     Route: 042
     Dates: start: 20201124, end: 20201124
  570. CHLORPHENIRAMINE MALEATE [Concomitant]
     Active Substance: CHLORPHENIRAMINE MALEATE
     Dosage: 10 MG; DURATION: 1 DAY;
     Route: 042
     Dates: start: 20210309, end: 20210309
  571. CHLORPHENIRAMINE MALEATE [Concomitant]
     Active Substance: CHLORPHENIRAMINE MALEATE
     Dosage: UNK
     Route: 042
     Dates: start: 20210323, end: 20210323
  572. CHLORPHENIRAMINE MALEATE [Concomitant]
     Active Substance: CHLORPHENIRAMINE MALEATE
     Dosage: 10 MG
     Route: 042
     Dates: start: 20210126, end: 20210126
  573. CHLORPHENIRAMINE MALEATE [Concomitant]
     Active Substance: CHLORPHENIRAMINE MALEATE
     Dosage: 10 MG
     Route: 042
     Dates: start: 20210209, end: 20210209
  574. CHLORPHENIRAMINE MALEATE [Concomitant]
     Active Substance: CHLORPHENIRAMINE MALEATE
     Dosage: 10 MG
     Route: 042
     Dates: start: 20210119, end: 20210119
  575. CHLORPHENIRAMINE MALEATE [Concomitant]
     Active Substance: CHLORPHENIRAMINE MALEATE
     Dosage: 10 MG
     Dates: start: 20210309, end: 20210309
  576. CHLORPHENIRAMINE MALEATE [Concomitant]
     Active Substance: CHLORPHENIRAMINE MALEATE
     Dosage: 10 MG; DURATION: 1 DAY; ;
     Route: 050
     Dates: start: 20210323, end: 20210323
  577. CHLORPHENIRAMINE MALEATE [Concomitant]
     Active Substance: CHLORPHENIRAMINE MALEATE
     Dosage: 10 MG ROUTE OF ADMIN (FREE TEXT): UNKNOWN ROUTE
     Dates: start: 20201217
  578. CHLORPHENIRAMINE MALEATE [Concomitant]
     Active Substance: CHLORPHENIRAMINE MALEATE
     Dosage: 10 MG ROUTE OF ADMIN (FREE TEXT): UNKNOWN ROUTE
     Dates: start: 20210302, end: 20210302
  579. CHLORPHENIRAMINE MALEATE [Concomitant]
     Active Substance: CHLORPHENIRAMINE MALEATE
     Dosage: 10 MG ROUTE OF ADMIN (FREE TEXT): UNKNOWN ROUTE
     Dates: start: 20210216, end: 20210216
  580. CHLORPHENIRAMINE MALEATE [Concomitant]
     Active Substance: CHLORPHENIRAMINE MALEATE
     Dosage: 10 MG ROUTE OF ADMIN (FREE TEXT): UNKNOWN ROUTE
     Dates: start: 20210216, end: 20210216
  581. CHLORPHENIRAMINE MALEATE [Concomitant]
     Active Substance: CHLORPHENIRAMINE MALEATE
     Dosage: UNK MG
     Dates: start: 20210209, end: 20210209
  582. CHLORPHENIRAMINE MALEATE [Concomitant]
     Active Substance: CHLORPHENIRAMINE MALEATE
     Dosage: 10 MG ROUTE OF ADMIN (FREE TEXT): UNKNOWN ROUTE
     Dates: start: 20201215, end: 20201215
  583. CHLORPHENIRAMINE MALEATE [Concomitant]
     Active Substance: CHLORPHENIRAMINE MALEATE
     Dosage: 10MG
     Dates: start: 20201215, end: 20201215
  584. CHLORPHENIRAMINE MALEATE [Concomitant]
     Active Substance: CHLORPHENIRAMINE MALEATE
     Dosage: 10 MG, 3 TIMES A WEEK, DOSE LAST STUDY DRUG ADMIN PRIOR AE 1260 MGSTART AD END DATE OF MOST RECENT D
     Dates: start: 20201124, end: 20201124
  585. CHLORPHENIRAMINE MALEATE [Concomitant]
     Active Substance: CHLORPHENIRAMINE MALEATE
     Dosage: UNK ROUTE OF ADMIN (FREE TEXT): UNKNOWN ROUTE
     Dates: start: 20210323, end: 20210323
  586. CHLORPHENIRAMINE MALEATE [Concomitant]
     Active Substance: CHLORPHENIRAMINE MALEATE
     Dosage: 10 MG; ADDITIONAL INFO: ROUTE:
     Dates: start: 20210216, end: 20210216
  587. CHLORPHENIRAMINE MALEATE [Concomitant]
     Active Substance: CHLORPHENIRAMINE MALEATE
     Dosage: 10 MG, EVERY 3 WEEK, DOSE LAST STUDY DRUG ADMIN PRIOR AE 1260 MG START AD END DATE OF MOST RECENT DO
     Dates: start: 20201124, end: 20201124
  588. CHLORPHENIRAMINE MALEATE [Concomitant]
     Active Substance: CHLORPHENIRAMINE MALEATE
     Dosage: 10 MG ROUTE OF ADMIN (FREE TEXT): UNKNOWN ROUTE
     Dates: start: 20210209, end: 20210209
  589. CHLORPHENIRAMINE MALEATE [Concomitant]
     Active Substance: CHLORPHENIRAMINE MALEATE
     Indication: Prophylaxis
     Dosage: 10 MG ROUTE OF ADMIN (FREE TEXT): UNKNOWN ROUTE
     Dates: start: 20210119, end: 20210119
  590. CHLORPHENIRAMINE MALEATE [Concomitant]
     Active Substance: CHLORPHENIRAMINE MALEATE
     Indication: Rash maculo-papular
     Dosage: 10 MG ROUTE OF ADMIN (FREE TEXT): UNKNOWN ROUTE
     Dates: start: 20210126, end: 20210126
  591. CHLORPHENIRAMINE MALEATE [Concomitant]
     Active Substance: CHLORPHENIRAMINE MALEATE
     Dosage: 10 MG ROUTE OF ADMIN (FREE TEXT): UNKNOWN ROUTE
     Dates: start: 20210309, end: 20210309
  592. CHLORPHENIRAMINE MALEATE [Concomitant]
     Active Substance: CHLORPHENIRAMINE MALEATE
     Dosage: 10 MG ROUTE OF ADMIN (FREE TEXT): UNKNOWN ROUTE
     Dates: start: 20210323, end: 20210323
  593. CHLORPHENIRAMINE MALEATE [Concomitant]
     Active Substance: CHLORPHENIRAMINE MALEATE
     Dosage: 10 MG ROUTE OF ADMIN (FREE TEXT): UNKNOWN ROUTE
     Dates: start: 20210309, end: 20210309
  594. CHLORPHENIRAMINE MALEATE [Concomitant]
     Active Substance: CHLORPHENIRAMINE MALEATE
     Dosage: 10 MG ROUTE OF ADMIN (FREE TEXT): UNKNOWN ROUTE
     Dates: start: 20210309, end: 20210309
  595. CHLORPHENIRAMINE MALEATE [Concomitant]
     Active Substance: CHLORPHENIRAMINE MALEATE
     Dosage: 10 MG ROUTE OF ADMIN (FREE TEXT): UNKNOWN ROUTE
     Dates: start: 20210126, end: 20210126
  596. CHLORPHENIRAMINE MALEATE [Concomitant]
     Active Substance: CHLORPHENIRAMINE MALEATE
     Dosage: 10 MG ROUTE OF ADMIN (FREE TEXT): UNKNOWN ROUTE
     Dates: start: 20210126, end: 20210126
  597. CHLORPHENIRAMINE MALEATE [Concomitant]
     Active Substance: CHLORPHENIRAMINE MALEATE
     Dosage: 10 MG ROUTE OF ADMIN (FREE TEXT): UNKNOWN ROUTE
     Dates: start: 20210119, end: 20210119
  598. CHLORPHENIRAMINE MALEATE [Concomitant]
     Active Substance: CHLORPHENIRAMINE MALEATE
     Dosage: 10 MG ROUTE OF ADMIN (FREE TEXT): UNKNOWN ROUTE
     Dates: start: 20210119, end: 20210119
  599. CHLORPHENIRAMINE MALEATE [Concomitant]
     Active Substance: CHLORPHENIRAMINE MALEATE
     Dosage: 10 MG ROUTE OF ADMIN (FREE TEXT): UNKNOWN ROUTE
     Dates: start: 20210323, end: 20210323
  600. CHLORPHENIRAMINE MALEATE [Concomitant]
     Active Substance: CHLORPHENIRAMINE MALEATE
     Dosage: 10 MG ROUTE OF ADMIN (FREE TEXT): UNKNOWN ROUTE
     Dates: start: 20210323, end: 20210323
  601. CHLORPHENIRAMINE MALEATE [Concomitant]
     Active Substance: CHLORPHENIRAMINE MALEATE
     Dosage: 10 MG ROUTE OF ADMIN (FREE TEXT): UNKNOWN ROUTE
     Dates: start: 20210209, end: 20210209
  602. CHLORPHENIRAMINE MALEATE [Concomitant]
     Active Substance: CHLORPHENIRAMINE MALEATE
     Dosage: 10 MG ROUTE OF ADMIN (FREE TEXT): UNKNOWN ROUTE
     Dates: start: 20210209, end: 20210209
  603. CHLORPHENIRAMINE MALEATE [Concomitant]
     Active Substance: CHLORPHENIRAMINE MALEATE
     Dosage: 10 MG ROUTE OF ADMIN (FREE TEXT): UNKNOWN ROUTE
     Dates: start: 20210119, end: 20210119
  604. CHLORPHENIRAMINE MALEATE [Concomitant]
     Active Substance: CHLORPHENIRAMINE MALEATE
     Dosage: 10 MG ROUTE OF ADMIN (FREE TEXT): UNKNOWN ROUTE
     Dates: start: 20210119, end: 20210119
  605. CHLORPHENIRAMINE MALEATE [Concomitant]
     Active Substance: CHLORPHENIRAMINE MALEATE
     Dosage: 10 MG, EVERY 3 WEEK, DOSE LAST STUDY DRUG ADMIN PRIOR AE 1260 MG START AD END DATE OF MOST RECENT DO
     Dates: start: 20201124, end: 20201124
  606. CHLORPHENIRAMINE MALEATE [Concomitant]
     Active Substance: CHLORPHENIRAMINE MALEATE
     Dosage: 10 MG, EVERY 3 WEEK, DOSE LAST STUDY DRUG ADMIN PRIOR AE 1260 MG START AD END DATE OF MOST RECENT DO
     Dates: start: 20201124, end: 20201124
  607. CHLORPHENIRAMINE MALEATE [Concomitant]
     Active Substance: CHLORPHENIRAMINE MALEATE
     Dosage: 10 MG ROUTE OF ADMIN (FREE TEXT): UNKNOWN ROUTE
     Dates: start: 20210323, end: 20210323
  608. CHLORPHENIRAMINE MALEATE [Concomitant]
     Active Substance: CHLORPHENIRAMINE MALEATE
     Dosage: 10 MG ROUTE OF ADMIN (FREE TEXT): UNKNOWN ROUTE
     Dates: start: 20210323, end: 20210323
  609. CHLORPHENIRAMINE MALEATE [Concomitant]
     Active Substance: CHLORPHENIRAMINE MALEATE
     Dosage: 10 MG ROUTE OF ADMIN (FREE TEXT): UNKNOWN ROUTE
     Dates: start: 20210309, end: 20210309
  610. CHLORPHENIRAMINE MALEATE [Concomitant]
     Active Substance: CHLORPHENIRAMINE MALEATE
     Dosage: 10 MG ROUTE OF ADMIN (FREE TEXT): UNKNOWN ROUTE
     Dates: start: 20210309, end: 20210309
  611. CHLORPHENIRAMINE MALEATE [Concomitant]
     Active Substance: CHLORPHENIRAMINE MALEATE
     Dosage: 10 MG ROUTE OF ADMIN (FREE TEXT): UNKNOWN ROUTE
     Dates: start: 20210209, end: 20210209
  612. CHLORPHENIRAMINE MALEATE [Concomitant]
     Active Substance: CHLORPHENIRAMINE MALEATE
     Dosage: 10 MG ROUTE OF ADMIN (FREE TEXT): UNKNOWN ROUTE
     Dates: start: 20210209, end: 20210209
  613. CHLORPHENIRAMINE MALEATE [Concomitant]
     Active Substance: CHLORPHENIRAMINE MALEATE
     Dosage: 10 MG ROUTE OF ADMIN (FREE TEXT): UNKNOWN ROUTE
     Dates: start: 20210126, end: 20210126
  614. CHLORPHENIRAMINE MALEATE [Concomitant]
     Active Substance: CHLORPHENIRAMINE MALEATE
     Dosage: 10 MG ROUTE OF ADMIN (FREE TEXT): UNKNOWN ROUTE
     Dates: start: 20210126, end: 20210126
  615. CHLORPHENIRAMINE MALEATE [Concomitant]
     Active Substance: CHLORPHENIRAMINE MALEATE
     Dosage: 10 MG, DURATION: 1 DAY;
     Dates: start: 20210206, end: 20210206
  616. CHLORPHENIRAMINE MALEATE [Concomitant]
     Active Substance: CHLORPHENIRAMINE MALEATE
     Dosage: 10 MG, DURATION: 1 DAY;
     Dates: start: 20210206, end: 20210206
  617. CHLORPHENIRAMINE MALEATE [Concomitant]
     Active Substance: CHLORPHENIRAMINE MALEATE
     Dosage: UNK
  618. CHLORPHENIRAMINE MALEATE [Concomitant]
     Active Substance: CHLORPHENIRAMINE MALEATE
     Dosage: UNK
  619. CHLORPHENIRAMINE MALEATE [Concomitant]
     Active Substance: CHLORPHENIRAMINE MALEATE
     Dosage: 10 MILLIGRAM (10 MG)
     Dates: start: 20201217
  620. CHLORPHENIRAMINE MALEATE [Concomitant]
     Active Substance: CHLORPHENIRAMINE MALEATE
     Dosage: UNK
  621. CHLORPHENIRAMINE MALEATE [Concomitant]
     Active Substance: CHLORPHENIRAMINE MALEATE
     Dosage: UNK
  622. CHLORPHENIRAMINE MALEATE [Concomitant]
     Active Substance: CHLORPHENIRAMINE MALEATE
     Dosage: 10 MILLIGRAM, Q3W (DOSE LAST STUDY DRUG ADMIN PRIOR AE 1260 MG START AD END DATE OF MOST RECENT DOSE
     Dates: start: 20201124, end: 20201124
  623. CHLORPHENIRAMINE MALEATE [Concomitant]
     Active Substance: CHLORPHENIRAMINE MALEATE
     Dosage: UNK; ; ADDITIONAL INFO: ROUTE:
     Dates: start: 20201217
  624. CHLORPHENIRAMINE MALEATE [Concomitant]
     Active Substance: CHLORPHENIRAMINE MALEATE
     Dosage: 10 MG
     Dates: start: 20201217
  625. CHLORPHENIRAMINE MALEATE [Concomitant]
     Active Substance: CHLORPHENIRAMINE MALEATE
     Dosage: 10 MG
     Dates: start: 20210216, end: 20210216
  626. CHLORPHENIRAMINE MALEATE [Concomitant]
     Active Substance: CHLORPHENIRAMINE MALEATE
     Dosage: 10 MG
     Dates: start: 20210216, end: 20210216
  627. CHLORPHENIRAMINE MALEATE [Concomitant]
     Active Substance: CHLORPHENIRAMINE MALEATE
     Dosage: UNK
     Route: 042
     Dates: start: 20210323, end: 20210323
  628. CHLORPHENIRAMINE MALEATE [Concomitant]
     Active Substance: CHLORPHENIRAMINE MALEATE
     Dosage: 10 MG ROUTE OF ADMIN (FREE TEXT): UNKNOWN ROUTE
     Dates: start: 20210216, end: 20210216
  629. CHLORPHENIRAMINE MALEATE [Concomitant]
     Active Substance: CHLORPHENIRAMINE MALEATE
     Dosage: 10 MG
     Dates: start: 20210302, end: 20210302
  630. CHLORPHENIRAMINE MALEATE [Concomitant]
     Active Substance: CHLORPHENIRAMINE MALEATE
     Dosage: 10 MG
     Dates: start: 20210126, end: 20210126
  631. CHLORPHENIRAMINE MALEATE [Concomitant]
     Active Substance: CHLORPHENIRAMINE MALEATE
     Dosage: 10 MG ROUTE OF ADMIN (FREE TEXT): UNKNOWN ROUTE
     Dates: start: 20210126, end: 20210126
  632. CHLORPHENIRAMINE MALEATE [Concomitant]
     Active Substance: CHLORPHENIRAMINE MALEATE
     Dosage: 10 MG
     Dates: start: 20210302, end: 20210302
  633. CHLORPHENIRAMINE MALEATE [Concomitant]
     Active Substance: CHLORPHENIRAMINE MALEATE
     Dosage: 10 MG
     Dates: start: 20210119, end: 20210119
  634. CHLORPHENIRAMINE MALEATE [Concomitant]
     Active Substance: CHLORPHENIRAMINE MALEATE
     Dosage: 10 MG
     Dates: start: 20210119, end: 20210119
  635. CHLORPHENIRAMINE MALEATE [Concomitant]
     Active Substance: CHLORPHENIRAMINE MALEATE
     Dosage: 10 MG ROUTE OF ADMIN (FREE TEXT): UNKNOWN ROUTE
     Dates: start: 20210209, end: 20210209
  636. CHLORPHENIRAMINE MALEATE [Concomitant]
     Active Substance: CHLORPHENIRAMINE MALEATE
     Dosage: 10 MG
     Dates: start: 20210309, end: 20210309
  637. CHLORPHENIRAMINE MALEATE [Concomitant]
     Active Substance: CHLORPHENIRAMINE MALEATE
     Dosage: 10 MG
     Dates: start: 20210309, end: 20210309
  638. CHLORPHENIRAMINE MALEATE [Concomitant]
     Active Substance: CHLORPHENIRAMINE MALEATE
     Dosage: 10 MG ROUTE OF ADMIN (FREE TEXT): UNKNOWN ROUTE
     Dates: start: 20201215, end: 20201215
  639. CHLORPHENIRAMINE MALEATE [Concomitant]
     Active Substance: CHLORPHENIRAMINE MALEATE
     Indication: Prophylaxis
     Dosage: 10 MILLIGRAM, Q3W (DOSE LAST STUDY DRUG ADMIN PRIOR AE 1260 MG START AD END DATE OF MOST RECENT DO)
     Dates: start: 20201124, end: 20201124
  640. CHLORPHENIRAMINE MALEATE [Concomitant]
     Active Substance: CHLORPHENIRAMINE MALEATE
     Indication: Rash maculo-papular
     Dosage: 10 MG (DOSAGE TEXT: 10 MG, 3 TIMES A WEEK, DOSE LAST STUDY DRUG ADMIN PRIOR AE 1260 MGSTART AD END D
     Dates: start: 20201124, end: 20201124
  641. CHLORPHENIRAMINE MALEATE [Concomitant]
     Active Substance: CHLORPHENIRAMINE MALEATE
     Dosage: DOSAGE TEXT: 10 MG
     Dates: start: 20210126, end: 20210126
  642. CHLORPHENIRAMINE MALEATE [Concomitant]
     Active Substance: CHLORPHENIRAMINE MALEATE
     Dosage: DOSAGE TEXT: 10 MG ROUTE OF ADMIN (FREE TEXT): UNKNOWN ROUTE
     Dates: start: 20201215, end: 20201215
  643. CODEINE [Concomitant]
     Active Substance: CODEINE
     Indication: Pain
     Dosage: UNK; ADDITIONAL INFO: ROUTE: ROUTE:
     Route: 065
     Dates: start: 20201123
  644. CODEINE [Concomitant]
     Active Substance: CODEINE
     Dosage: 30 MILLIGRAM (AS NECESSARY); DURATION: 1 DAY; ADDITIONAL INFO: ROUTE: ROUTE:
     Route: 065
     Dates: start: 20201224, end: 20201224
  645. CODEINE [Concomitant]
     Active Substance: CODEINE
     Dosage: UNK
     Route: 050
     Dates: start: 20201123
  646. CODEINE [Concomitant]
     Active Substance: CODEINE
     Dosage: 30 MILLIGRAM (AS NECESSARY)
     Route: 065
     Dates: start: 20201224, end: 20201224
  647. CODEINE [Concomitant]
     Active Substance: CODEINE
     Dosage: 30 MILLIGRAM (AS NECESSARY)
     Route: 065
     Dates: start: 20201123
  648. CODEINE [Concomitant]
     Active Substance: CODEINE
     Dosage: (DOSAGE TEXT: 30 MG, AS NECESSARY ROUTE OF ADMIN (FREE TEXT): UNKNOWN ROUTE)
     Dates: start: 20201224, end: 20201224
  649. CODEINE [Concomitant]
     Active Substance: CODEINE
     Dosage: 10 MG ((DOSAGE TEXT: 30 MG, AS NECESSARY ROUTE OF ADMIN (FREE TEXT): UNKNOWN ROUTE)
     Dates: start: 20201123
  650. CODEINE [Concomitant]
     Active Substance: CODEINE
     Dosage: (DOSAGE TEXT: 30 MG, AS NECESSARY ROUTE OF ADMIN (FREE TEXT): UNKNOWN ROUTE)
     Dates: start: 20201224, end: 20201224
  651. DEXAMETHASONE SODIUM SUCCINATE [Concomitant]
     Active Substance: DEXAMETHASONE SODIUM SUCCINATE
     Indication: Product used for unknown indication
     Dosage: 20 MILLIGRAM
     Route: 065
     Dates: start: 20210119, end: 20210119
  652. DEXAMETHASONE SODIUM SUCCINATE [Concomitant]
     Active Substance: DEXAMETHASONE SODIUM SUCCINATE
     Dosage: 20 MILLIGRAM
     Route: 065
     Dates: start: 20210209, end: 20210209
  653. DEXAMETHASONE SODIUM SUCCINATE [Concomitant]
     Active Substance: DEXAMETHASONE SODIUM SUCCINATE
     Dosage: 20 MILLIGRAM
     Route: 065
     Dates: start: 20210302, end: 20210302
  654. DEXAMETHASONE SODIUM SUCCINATE [Concomitant]
     Active Substance: DEXAMETHASONE SODIUM SUCCINATE
     Dosage: 20 MILLIGRAM / 20 MG, DURATION: 1 DAY;
     Route: 042
     Dates: start: 20210323, end: 20210323
  655. DEXAMETHASONE SODIUM SUCCINATE [Concomitant]
     Active Substance: DEXAMETHASONE SODIUM SUCCINATE
     Dosage: 20 MILLIGRAM, UNK
     Route: 042
     Dates: start: 20210302, end: 20210302
  656. DEXAMETHASONE SODIUM SUCCINATE [Concomitant]
     Active Substance: DEXAMETHASONE SODIUM SUCCINATE
     Dosage: 20 MILLIGRAM
     Route: 042
     Dates: start: 20210323, end: 20210323
  657. DEXAMETHASONE SODIUM SUCCINATE [Concomitant]
     Active Substance: DEXAMETHASONE SODIUM SUCCINATE
     Dosage: 20 MILLIGRAM, UNK
     Route: 042
     Dates: start: 20210119, end: 20210119
  658. DEXAMETHASONE SODIUM SUCCINATE [Concomitant]
     Active Substance: DEXAMETHASONE SODIUM SUCCINATE
     Dosage: 20 MILLIGRAM, UNK
     Route: 042
     Dates: start: 20210209, end: 20210209
  659. DEXAMETHASONE SODIUM SUCCINATE [Concomitant]
     Active Substance: DEXAMETHASONE SODIUM SUCCINATE
     Dosage: 20 MILLIGRAM
     Dates: start: 20210302, end: 20210302
  660. DEXAMETHASONE SODIUM SUCCINATE [Concomitant]
     Active Substance: DEXAMETHASONE SODIUM SUCCINATE
     Dosage: 20 MILLIGRAM; DURATION: 1 DAY;
     Dates: start: 20210302, end: 20210302
  661. DEXAMETHASONE SODIUM SUCCINATE [Concomitant]
     Active Substance: DEXAMETHASONE SODIUM SUCCINATE
     Dosage: 20 MG ROUTE OF ADMIN (FREE TEXT): UNKNOWN ROUTE
     Dates: start: 20210119, end: 20210119
  662. DEXAMETHASONE SODIUM SUCCINATE [Concomitant]
     Active Substance: DEXAMETHASONE SODIUM SUCCINATE
     Dosage: 20 MG ROUTE OF ADMIN (FREE TEXT): UNKNOWN ROUTE
     Dates: start: 20210119, end: 20210119
  663. DEXAMETHASONE SODIUM SUCCINATE [Concomitant]
     Active Substance: DEXAMETHASONE SODIUM SUCCINATE
     Dosage: 20 MILLIGRAM; DURATION: 1 DAY;
     Dates: start: 20210302, end: 20210302
  664. DEXAMETHASONE SODIUM SUCCINATE [Concomitant]
     Active Substance: DEXAMETHASONE SODIUM SUCCINATE
     Dosage: 20 MILLIGRAM; DURATION: 1 DAY;
     Dates: start: 20210302, end: 20210302
  665. DEXAMETHASONE SODIUM SUCCINATE [Concomitant]
     Active Substance: DEXAMETHASONE SODIUM SUCCINATE
     Dosage: 20 MILLIGRAM, UNK
     Route: 042
     Dates: start: 20210302, end: 20210302
  666. DEXAMETHASONE SODIUM SUCCINATE [Concomitant]
     Active Substance: DEXAMETHASONE SODIUM SUCCINATE
     Dosage: 20 MILLIGRAM; DURATION: 1 DAY;
     Route: 065
     Dates: start: 20210302, end: 20210302
  667. DEXAMETHASONE SODIUM SUCCINATE [Concomitant]
     Active Substance: DEXAMETHASONE SODIUM SUCCINATE
     Dosage: 20 MILLIGRAM, UNK
     Route: 042
     Dates: start: 20210209, end: 20210209
  668. DEXAMETHASONE SODIUM SUCCINATE [Concomitant]
     Active Substance: DEXAMETHASONE SODIUM SUCCINATE
     Dosage: 20 MILLIGRAM, UNK
     Route: 042
     Dates: start: 20210119, end: 20210119
  669. DEXAMETHASONE SODIUM SUCCINATE [Concomitant]
     Active Substance: DEXAMETHASONE SODIUM SUCCINATE
     Dosage: 20 MILLIGRAM, UNK
     Route: 042
     Dates: start: 20210323, end: 20210323
  670. DEXAMETHASONE SODIUM SUCCINATE [Concomitant]
     Active Substance: DEXAMETHASONE SODIUM SUCCINATE
     Dosage: 20 MILLIGRAM, UNK
     Route: 042
     Dates: start: 20210323, end: 20210323
  671. DEXAMETHASONE SODIUM SUCCINATE [Concomitant]
     Active Substance: DEXAMETHASONE SODIUM SUCCINATE
     Dosage: 20 MG ROUTE OF ADMIN (FREE TEXT): UNKNOWN ROUTE
     Dates: start: 20210323, end: 20210323
  672. DEXAMETHASONE SODIUM SUCCINATE [Concomitant]
     Active Substance: DEXAMETHASONE SODIUM SUCCINATE
     Dosage: 20 MG ROUTE OF ADMIN (FREE TEXT): UNKNOWN ROUTE
     Dates: start: 20210209, end: 20210209
  673. DEXAMETHASONE SODIUM SUCCINATE [Concomitant]
     Active Substance: DEXAMETHASONE SODIUM SUCCINATE
     Dosage: 20 MG ROUTE OF ADMIN (FREE TEXT): UNKNOWN ROUTE
     Dates: start: 20210302, end: 20210302
  674. DEXAMETHASONE SODIUM SUCCINATE [Concomitant]
     Active Substance: DEXAMETHASONE SODIUM SUCCINATE
     Dosage: 20 MG ROUTE OF ADMIN (FREE TEXT): UNKNOWN ROUTE
     Dates: start: 20210323, end: 20210323
  675. DEXAMETHASONE SODIUM SUCCINATE [Concomitant]
     Active Substance: DEXAMETHASONE SODIUM SUCCINATE
     Dosage: 20 MG ROUTE OF ADMIN (FREE TEXT): UNKNOWN ROUTE
     Dates: start: 20210323, end: 20210323
  676. DEXAMETHASONE SODIUM SUCCINATE [Concomitant]
     Active Substance: DEXAMETHASONE SODIUM SUCCINATE
     Dosage: 20 MG ROUTE OF ADMIN (FREE TEXT): UNKNOWN ROUTE
     Dates: start: 20210209, end: 20210209
  677. DEXAMETHASONE SODIUM SUCCINATE [Concomitant]
     Active Substance: DEXAMETHASONE SODIUM SUCCINATE
     Dosage: 20 MG ROUTE OF ADMIN (FREE TEXT): UNKNOWN ROUTE
     Dates: start: 20210302, end: 20210302
  678. DEXAMETHASONE SODIUM SUCCINATE [Concomitant]
     Active Substance: DEXAMETHASONE SODIUM SUCCINATE
     Dosage: 20 MG ROUTE OF ADMIN (FREE TEXT): UNKNOWN ROUTE
     Dates: start: 20210323, end: 20210323
  679. DEXAMETHASONE SODIUM SUCCINATE [Concomitant]
     Active Substance: DEXAMETHASONE SODIUM SUCCINATE
     Dosage: 20 MG ROUTE OF ADMIN (FREE TEXT): UNKNOWN ROUTE
     Dates: start: 20210323, end: 20210323
  680. DEXAMETHASONE SODIUM SUCCINATE [Concomitant]
     Active Substance: DEXAMETHASONE SODIUM SUCCINATE
     Dosage: 20 MG ROUTE OF ADMIN (FREE TEXT): UNKNOWN ROUTE
     Dates: start: 20210209, end: 20210209
  681. DEXAMETHASONE SODIUM SUCCINATE [Concomitant]
     Active Substance: DEXAMETHASONE SODIUM SUCCINATE
     Dosage: 20 MG ROUTE OF ADMIN (FREE TEXT): UNKNOWN ROUTE
     Dates: start: 20210209, end: 20210209
  682. DEXAMETHASONE SODIUM SUCCINATE [Concomitant]
     Active Substance: DEXAMETHASONE SODIUM SUCCINATE
     Dosage: 20 MG ROUTE OF ADMIN (FREE TEXT): UNKNOWN ROUTE
     Dates: start: 20210302, end: 20210302
  683. DEXAMETHASONE SODIUM SUCCINATE [Concomitant]
     Active Substance: DEXAMETHASONE SODIUM SUCCINATE
     Dosage: 20 MG ROUTE OF ADMIN (FREE TEXT): UNKNOWN ROUTE
     Dates: start: 20210302, end: 20210302
  684. DEXAMETHASONE SODIUM SUCCINATE [Concomitant]
     Active Substance: DEXAMETHASONE SODIUM SUCCINATE
     Dosage: 20 MG ROUTE OF ADMIN (FREE TEXT): UNKNOWN ROUTE
     Dates: start: 20210323, end: 20210323
  685. DEXAMETHASONE SODIUM SUCCINATE [Concomitant]
     Active Substance: DEXAMETHASONE SODIUM SUCCINATE
     Dosage: 20 MG ROUTE OF ADMIN (FREE TEXT): UNKNOWN ROUTE
     Dates: start: 20210323, end: 20210323
  686. DEXAMETHASONE SODIUM SUCCINATE [Concomitant]
     Active Substance: DEXAMETHASONE SODIUM SUCCINATE
     Dosage: 20 MG ROUTE OF ADMIN (FREE TEXT): UNKNOWN ROUTE
     Dates: start: 20210302, end: 20210302
  687. DEXAMETHASONE SODIUM SUCCINATE [Concomitant]
     Active Substance: DEXAMETHASONE SODIUM SUCCINATE
     Dosage: 20 MG ROUTE OF ADMIN (FREE TEXT): UNKNOWN ROUTE
     Dates: start: 20210302, end: 20210302
  688. DEXAMETHASONE SODIUM SUCCINATE [Concomitant]
     Active Substance: DEXAMETHASONE SODIUM SUCCINATE
     Dosage: 20 MG ROUTE OF ADMIN (FREE TEXT): UNKNOWN ROUTE
     Dates: start: 20210209, end: 20210209
  689. DEXAMETHASONE SODIUM SUCCINATE [Concomitant]
     Active Substance: DEXAMETHASONE SODIUM SUCCINATE
     Dosage: 20 MG ROUTE OF ADMIN (FREE TEXT): UNKNOWN ROUTE
     Dates: start: 20210209, end: 20210209
  690. DEXAMETHASONE SODIUM SUCCINATE [Concomitant]
     Active Substance: DEXAMETHASONE SODIUM SUCCINATE
     Dosage: 20 MG ROUTE OF ADMIN (FREE TEXT): UNKNOWN ROUTE
     Dates: start: 20210209, end: 20210209
  691. DEXAMETHASONE SODIUM SUCCINATE [Concomitant]
     Active Substance: DEXAMETHASONE SODIUM SUCCINATE
     Dosage: 20 MG ROUTE OF ADMIN (FREE TEXT): UNKNOWN ROUTE
     Dates: start: 20210209, end: 20210209
  692. DEXAMETHASONE SODIUM SUCCINATE [Concomitant]
     Active Substance: DEXAMETHASONE SODIUM SUCCINATE
     Dosage: 20 MG ROUTE OF ADMIN (FREE TEXT): UNKNOWN ROUTE
     Dates: start: 20210323, end: 20210323
  693. DEXAMETHASONE SODIUM SUCCINATE [Concomitant]
     Active Substance: DEXAMETHASONE SODIUM SUCCINATE
     Dosage: 20 MG ROUTE OF ADMIN (FREE TEXT): UNKNOWN ROUTE
     Dates: start: 20210323, end: 20210323
  694. DEXAMETHASONE SODIUM SUCCINATE [Concomitant]
     Active Substance: DEXAMETHASONE SODIUM SUCCINATE
     Dosage: 20 MG ROUTE OF ADMIN (FREE TEXT): UNKNOWN ROUTE
     Dates: start: 20210302, end: 20210302
  695. DEXAMETHASONE SODIUM SUCCINATE [Concomitant]
     Active Substance: DEXAMETHASONE SODIUM SUCCINATE
     Dosage: 20 MG ROUTE OF ADMIN (FREE TEXT): UNKNOWN ROUTE
     Dates: start: 20210302, end: 20210302
  696. DEXAMETHASONE SODIUM SUCCINATE [Concomitant]
     Active Substance: DEXAMETHASONE SODIUM SUCCINATE
     Dosage: 20 MG ROUTE OF ADMIN (FREE TEXT): UNKNOWN ROUTE
     Dates: start: 20210209, end: 20210209
  697. DEXAMETHASONE SODIUM SUCCINATE [Concomitant]
     Active Substance: DEXAMETHASONE SODIUM SUCCINATE
     Dosage: 20 MG ROUTE OF ADMIN (FREE TEXT): UNKNOWN ROUTE
     Dates: start: 20210209, end: 20210209
  698. DEXAMETHASONE SODIUM SUCCINATE [Concomitant]
     Active Substance: DEXAMETHASONE SODIUM SUCCINATE
     Dosage: DURATION: 1 DAY;
     Route: 065
     Dates: start: 20210119, end: 20210119
  699. DEXAMETHASONE SODIUM SUCCINATE [Concomitant]
     Active Substance: DEXAMETHASONE SODIUM SUCCINATE
     Dosage: DURATION: 1 DAY;
     Dates: start: 20210119, end: 20210119
  700. DEXAMETHASONE SODIUM SUCCINATE [Concomitant]
     Active Substance: DEXAMETHASONE SODIUM SUCCINATE
     Dosage: 20 MG ROUTE OF ADMIN (FREE TEXT): UNKNOWN ROUTE
     Dates: start: 20210302, end: 20210302
  701. DEXAMETHASONE SODIUM SUCCINATE [Concomitant]
     Active Substance: DEXAMETHASONE SODIUM SUCCINATE
     Indication: Product used for unknown indication
     Dosage: 20 MG ROUTE OF ADMIN (FREE TEXT): UNKNOWN ROUTE
     Dates: start: 20210302, end: 20210302
  702. DEXAMETHASONE SODIUM SUCCINATE [Concomitant]
     Active Substance: DEXAMETHASONE SODIUM SUCCINATE
     Dosage: 20 MG ROUTE OF ADMIN (FREE TEXT): UNKNOWN ROUTE
     Dates: start: 20210302, end: 20210302
  703. DEXAMETHASONE SODIUM SUCCINATE [Concomitant]
     Active Substance: DEXAMETHASONE SODIUM SUCCINATE
     Dosage: 20 MG ROUTE OF ADMIN (FREE TEXT): UNKNOWN ROUTE
     Dates: start: 20210302, end: 20210302
  704. DEXAMETHASONE SODIUM SUCCINATE [Concomitant]
     Active Substance: DEXAMETHASONE SODIUM SUCCINATE
     Dosage: 20 MG ROUTE OF ADMIN (FREE TEXT): UNKNOWN ROUTE
     Dates: start: 20210209, end: 20210209
  705. DEXAMETHASONE SODIUM SUCCINATE [Concomitant]
     Active Substance: DEXAMETHASONE SODIUM SUCCINATE
     Dosage: 20 MG ROUTE OF ADMIN (FREE TEXT): UNKNOWN ROUTE
     Dates: start: 20210209, end: 20210209
  706. DEXAMETHASONE SODIUM SUCCINATE [Concomitant]
     Active Substance: DEXAMETHASONE SODIUM SUCCINATE
     Dosage: 20 MGUNK
     Dates: start: 20210323, end: 20210323
  707. DEXAMETHASONE SODIUM SUCCINATE [Concomitant]
     Active Substance: DEXAMETHASONE SODIUM SUCCINATE
     Dosage: 20 MGUNK
     Dates: start: 20210323, end: 20210323
  708. DEXAMETHASONE SODIUM SUCCINATE [Concomitant]
     Active Substance: DEXAMETHASONE SODIUM SUCCINATE
     Dosage: 20 MG ROUTE OF ADMIN (FREE TEXT): UNKNOWN ROUTE
     Dates: start: 20210302, end: 20210302
  709. DEXAMETHASONE SODIUM SUCCINATE [Concomitant]
     Active Substance: DEXAMETHASONE SODIUM SUCCINATE
     Dosage: 20 MG ROUTE OF ADMIN (FREE TEXT): UNKNOWN ROUTE
     Dates: start: 20210302, end: 20210302
  710. DEXAMETHASONE SODIUM SUCCINATE [Concomitant]
     Active Substance: DEXAMETHASONE SODIUM SUCCINATE
     Dosage: 20 MG ROUTE OF ADMIN (FREE TEXT): UNKNOWN ROUTE
     Dates: start: 20210323, end: 20210323
  711. DEXAMETHASONE SODIUM SUCCINATE [Concomitant]
     Active Substance: DEXAMETHASONE SODIUM SUCCINATE
     Dosage: 20 MG ROUTE OF ADMIN (FREE TEXT): UNKNOWN ROUTE
     Dates: start: 20210323, end: 20210323
  712. DEXAMETHASONE SODIUM SUCCINATE [Concomitant]
     Active Substance: DEXAMETHASONE SODIUM SUCCINATE
     Dosage: DURATION: 1 DAY;
     Route: 065
     Dates: start: 20210323, end: 20210323
  713. DEXAMETHASONE SODIUM SUCCINATE [Concomitant]
     Active Substance: DEXAMETHASONE SODIUM SUCCINATE
     Dosage: DURATION: 1 DAY;
     Dates: start: 20210323, end: 20210323
  714. DEXAMETHASONE SODIUM SUCCINATE [Concomitant]
     Active Substance: DEXAMETHASONE SODIUM SUCCINATE
     Dosage: 20 MG ROUTE OF ADMIN (FREE TEXT): UNKNOWN ROUTE
     Dates: start: 20210209, end: 20210209
  715. DEXAMETHASONE SODIUM SUCCINATE [Concomitant]
     Active Substance: DEXAMETHASONE SODIUM SUCCINATE
     Dosage: 20 MG ROUTE OF ADMIN (FREE TEXT): UNKNOWN ROUTE
     Dates: start: 20210209, end: 20210209
  716. DEXAMETHASONE SODIUM SUCCINATE [Concomitant]
     Active Substance: DEXAMETHASONE SODIUM SUCCINATE
     Dosage: 20 MG ROUTE OF ADMIN (FREE TEXT): UNKNOWN ROUTE
     Dates: start: 20210302, end: 20210302
  717. DEXAMETHASONE SODIUM SUCCINATE [Concomitant]
     Active Substance: DEXAMETHASONE SODIUM SUCCINATE
     Dosage: 20 MG ROUTE OF ADMIN (FREE TEXT): UNKNOWN ROUTE
     Dates: start: 20210302, end: 20210302
  718. DEXAMETHASONE SODIUM SUCCINATE [Concomitant]
     Active Substance: DEXAMETHASONE SODIUM SUCCINATE
     Dosage: 20 MG
     Dates: start: 20210302, end: 20210302
  719. DEXAMETHASONE SODIUM SUCCINATE [Concomitant]
     Active Substance: DEXAMETHASONE SODIUM SUCCINATE
     Dosage: 20 MG
     Dates: start: 20210302, end: 20210302
  720. DEXAMETHASONE SODIUM SUCCINATE [Concomitant]
     Active Substance: DEXAMETHASONE SODIUM SUCCINATE
     Dosage: 20 MG ROUTE OF ADMIN (FREE TEXT): UNKNOWN ROUTE
     Dates: start: 20210209, end: 20210209
  721. DEXAMETHASONE SODIUM SUCCINATE [Concomitant]
     Active Substance: DEXAMETHASONE SODIUM SUCCINATE
     Dosage: 20 MG ROUTE OF ADMIN (FREE TEXT): UNKNOWN ROUTE
     Dates: start: 20210209, end: 20210209
  722. DEXAMETHASONE SODIUM SUCCINATE [Concomitant]
     Active Substance: DEXAMETHASONE SODIUM SUCCINATE
     Dosage: 20 MG ROUTE OF ADMIN (FREE TEXT): UNKNOWN ROUTE
     Dates: start: 20210323, end: 20210323
  723. DEXAMETHASONE SODIUM SUCCINATE [Concomitant]
     Active Substance: DEXAMETHASONE SODIUM SUCCINATE
     Dosage: 20 MG ROUTE OF ADMIN (FREE TEXT): UNKNOWN ROUTE
     Dates: start: 20210323, end: 20210323
  724. DEXAMETHASONE SODIUM SUCCINATE [Concomitant]
     Active Substance: DEXAMETHASONE SODIUM SUCCINATE
     Dosage: 20 MG ROUTE OF ADMIN (FREE TEXT): UNKNOWN ROUTE
     Dates: start: 20210323, end: 20210323
  725. DEXAMETHASONE SODIUM SUCCINATE [Concomitant]
     Active Substance: DEXAMETHASONE SODIUM SUCCINATE
     Dosage: 20 MG ROUTE OF ADMIN (FREE TEXT): UNKNOWN ROUTE
     Dates: start: 20210323, end: 20210323
  726. DEXAMETHASONE SODIUM SUCCINATE [Concomitant]
     Active Substance: DEXAMETHASONE SODIUM SUCCINATE
     Dosage: 20 MG ROUTE OF ADMIN (FREE TEXT): UNKNOWN ROUTE
     Dates: start: 20210323, end: 20210323
  727. DEXAMETHASONE SODIUM SUCCINATE [Concomitant]
     Active Substance: DEXAMETHASONE SODIUM SUCCINATE
     Dosage: 20 MG ROUTE OF ADMIN (FREE TEXT): UNKNOWN ROUTE
     Dates: start: 20210323, end: 20210323
  728. DEXAMETHASONE SODIUM SUCCINATE [Concomitant]
     Active Substance: DEXAMETHASONE SODIUM SUCCINATE
     Dosage: DURATION: 1 DAY;
     Route: 065
     Dates: start: 20210209, end: 20210209
  729. DEXAMETHASONE SODIUM SUCCINATE [Concomitant]
     Active Substance: DEXAMETHASONE SODIUM SUCCINATE
     Dosage: DURATION: 1 DAY;
     Dates: start: 20210209, end: 20210209
  730. DEXAMETHASONE SODIUM SUCCINATE [Concomitant]
     Active Substance: DEXAMETHASONE SODIUM SUCCINATE
     Dosage: 20 MG ROUTE OF ADMIN (FREE TEXT): UNKNOWN ROUTE
     Dates: start: 20210209, end: 20210209
  731. DEXAMETHASONE SODIUM SUCCINATE [Concomitant]
     Active Substance: DEXAMETHASONE SODIUM SUCCINATE
     Dosage: 20 MG ROUTE OF ADMIN (FREE TEXT): UNKNOWN ROUTE
     Dates: start: 20210209, end: 20210209
  732. DEXAMETHASONE SODIUM SUCCINATE [Concomitant]
     Active Substance: DEXAMETHASONE SODIUM SUCCINATE
     Dosage: DURATION: 1 DAY;
     Dates: start: 20210119, end: 20210119
  733. DEXAMETHASONE SODIUM SUCCINATE [Concomitant]
     Active Substance: DEXAMETHASONE SODIUM SUCCINATE
     Dosage: DURATION: 1 DAY;
     Dates: start: 20210119, end: 20210119
  734. DEXAMETHASONE SODIUM SUCCINATE [Concomitant]
     Active Substance: DEXAMETHASONE SODIUM SUCCINATE
     Dosage: DURATION: 1 DAY;
     Dates: start: 20210209, end: 20210209
  735. DEXAMETHASONE SODIUM SUCCINATE [Concomitant]
     Active Substance: DEXAMETHASONE SODIUM SUCCINATE
     Dosage: DURATION: 1 DAY;
     Dates: start: 20210209, end: 20210209
  736. DEXAMETHASONE SODIUM SUCCINATE [Concomitant]
     Active Substance: DEXAMETHASONE SODIUM SUCCINATE
     Dosage: 20 MG ROUTE OF ADMIN (FREE TEXT): UNKNOWN ROUTE
     Dates: start: 20210323, end: 20210323
  737. DEXAMETHASONE SODIUM SUCCINATE [Concomitant]
     Active Substance: DEXAMETHASONE SODIUM SUCCINATE
     Dosage: 20 MG ROUTE OF ADMIN (FREE TEXT): UNKNOWN ROUTE
     Dates: start: 20210323, end: 20210323
  738. DEXAMETHASONE SODIUM SUCCINATE [Concomitant]
     Active Substance: DEXAMETHASONE SODIUM SUCCINATE
     Dosage: 20 MG ROUTE OF ADMIN (FREE TEXT): UNKNOWN ROUTE
     Dates: start: 20210302, end: 20210302
  739. DEXAMETHASONE SODIUM SUCCINATE [Concomitant]
     Active Substance: DEXAMETHASONE SODIUM SUCCINATE
     Dosage: 20 MG ROUTE OF ADMIN (FREE TEXT): UNKNOWN ROUTE
     Dates: start: 20210302, end: 20210302
  740. DEXAMETHASONE SODIUM SUCCINATE [Concomitant]
     Active Substance: DEXAMETHASONE SODIUM SUCCINATE
     Dosage: 20 MG ROUTE OF ADMIN (FREE TEXT): UNKNOWN ROUTE
     Dates: start: 20210209, end: 20210209
  741. DEXAMETHASONE SODIUM SUCCINATE [Concomitant]
     Active Substance: DEXAMETHASONE SODIUM SUCCINATE
     Dosage: 20 MG ROUTE OF ADMIN (FREE TEXT): UNKNOWN ROUTE
     Dates: start: 20210209, end: 20210209
  742. DEXAMETHASONE SODIUM SUCCINATE [Concomitant]
     Active Substance: DEXAMETHASONE SODIUM SUCCINATE
     Dosage: 20 MG ROUTE OF ADMIN (FREE TEXT): UNKNOWN ROUTE
     Dates: start: 20210323, end: 20210323
  743. DEXAMETHASONE SODIUM SUCCINATE [Concomitant]
     Active Substance: DEXAMETHASONE SODIUM SUCCINATE
     Dosage: 20 MG ROUTE OF ADMIN (FREE TEXT): UNKNOWN ROUTE
     Dates: start: 20210323, end: 20210323
  744. DEXAMETHASONE SODIUM SUCCINATE [Concomitant]
     Active Substance: DEXAMETHASONE SODIUM SUCCINATE
     Dosage: 20 MG ROUTE OF ADMIN (FREE TEXT): UNKNOWN ROUTE
     Dates: start: 20210209, end: 20210209
  745. DEXAMETHASONE SODIUM SUCCINATE [Concomitant]
     Active Substance: DEXAMETHASONE SODIUM SUCCINATE
     Dosage: 20 MG ROUTE OF ADMIN (FREE TEXT): UNKNOWN ROUTE
     Dates: start: 20210209, end: 20210209
  746. DEXAMETHASONE SODIUM SUCCINATE [Concomitant]
     Active Substance: DEXAMETHASONE SODIUM SUCCINATE
     Dosage: 20 MG ROUTE OF ADMIN (FREE TEXT): UNKNOWN ROUTE
     Dates: start: 20210323, end: 20210323
  747. DEXAMETHASONE SODIUM SUCCINATE [Concomitant]
     Active Substance: DEXAMETHASONE SODIUM SUCCINATE
     Dosage: 20 MG ROUTE OF ADMIN (FREE TEXT): UNKNOWN ROUTE
     Dates: start: 20210323, end: 20210323
  748. DEXAMETHASONE SODIUM SUCCINATE [Concomitant]
     Active Substance: DEXAMETHASONE SODIUM SUCCINATE
     Dosage: 20 MG ROUTE OF ADMIN (FREE TEXT): UNKNOWN ROUTE
     Dates: start: 20210302, end: 20210302
  749. DEXAMETHASONE SODIUM SUCCINATE [Concomitant]
     Active Substance: DEXAMETHASONE SODIUM SUCCINATE
     Dosage: 20 MG ROUTE OF ADMIN (FREE TEXT): UNKNOWN ROUTE
     Dates: start: 20210302, end: 20210302
  750. DEXAMETHASONE SODIUM SUCCINATE [Concomitant]
     Active Substance: DEXAMETHASONE SODIUM SUCCINATE
     Dosage: DURATION: 1 DAY;
     Dates: start: 20210323, end: 20210323
  751. DEXAMETHASONE SODIUM SUCCINATE [Concomitant]
     Active Substance: DEXAMETHASONE SODIUM SUCCINATE
     Indication: Product used for unknown indication
     Dosage: DURATION: 1 DAY;
     Dates: start: 20210323, end: 20210323
  752. DEXAMETHASONE SODIUM SUCCINATE [Concomitant]
     Active Substance: DEXAMETHASONE SODIUM SUCCINATE
     Dosage: 20 MG ROUTE OF ADMIN (FREE TEXT): UNKNOWN ROUTE
     Dates: start: 20210323, end: 20210323
  753. DEXAMETHASONE SODIUM SUCCINATE [Concomitant]
     Active Substance: DEXAMETHASONE SODIUM SUCCINATE
     Dosage: 20 MG ROUTE OF ADMIN (FREE TEXT): UNKNOWN ROUTE
     Dates: start: 20210323, end: 20210323
  754. DEXAMETHASONE SODIUM SUCCINATE [Concomitant]
     Active Substance: DEXAMETHASONE SODIUM SUCCINATE
     Dosage: 20 MG ROUTE OF ADMIN (FREE TEXT): UNKNOWN ROUTE
     Dates: start: 20210209, end: 20210209
  755. DEXAMETHASONE SODIUM SUCCINATE [Concomitant]
     Active Substance: DEXAMETHASONE SODIUM SUCCINATE
     Dosage: 20 MG ROUTE OF ADMIN (FREE TEXT): UNKNOWN ROUTE
     Dates: start: 20210209, end: 20210209
  756. DEXAMETHASONE SODIUM SUCCINATE [Concomitant]
     Active Substance: DEXAMETHASONE SODIUM SUCCINATE
     Dosage: 20 MGUNK
     Dates: start: 20210323, end: 20210323
  757. DEXAMETHASONE SODIUM SUCCINATE [Concomitant]
     Active Substance: DEXAMETHASONE SODIUM SUCCINATE
     Dosage: 20 MG ROUTE OF ADMIN (FREE TEXT): UNKNOWN ROUTE
     Dates: start: 20210302, end: 20210302
  758. DEXAMETHASONE SODIUM SUCCINATE [Concomitant]
     Active Substance: DEXAMETHASONE SODIUM SUCCINATE
     Dosage: 20 MG ROUTE OF ADMIN (FREE TEXT): UNKNOWN ROUTE
     Dates: start: 20210302, end: 20210302
  759. DEXAMETHASONE SODIUM SUCCINATE [Concomitant]
     Active Substance: DEXAMETHASONE SODIUM SUCCINATE
     Dosage: 20 MG ROUTE OF ADMIN (FREE TEXT): UNKNOWN ROUTE
     Dates: start: 20210302, end: 20210302
  760. DEXAMETHASONE SODIUM SUCCINATE [Concomitant]
     Active Substance: DEXAMETHASONE SODIUM SUCCINATE
     Dosage: 20 MG ROUTE OF ADMIN (FREE TEXT): UNKNOWN ROUTE
     Dates: start: 20210302, end: 20210302
  761. DEXAMETHASONE SODIUM SUCCINATE [Concomitant]
     Active Substance: DEXAMETHASONE SODIUM SUCCINATE
     Dosage: 20 MG ROUTE OF ADMIN (FREE TEXT): UNKNOWN ROUTE
     Dates: start: 20210209, end: 20210209
  762. DEXAMETHASONE SODIUM SUCCINATE [Concomitant]
     Active Substance: DEXAMETHASONE SODIUM SUCCINATE
     Dosage: 20 MG ROUTE OF ADMIN (FREE TEXT): UNKNOWN ROUTE
     Dates: start: 20210209, end: 20210209
  763. DEXAMETHASONE SODIUM SUCCINATE [Concomitant]
     Active Substance: DEXAMETHASONE SODIUM SUCCINATE
     Dosage: 20 MG ROUTE OF ADMIN (FREE TEXT): UNKNOWN ROUTE
     Dates: start: 20210323, end: 20210323
  764. DEXAMETHASONE SODIUM SUCCINATE [Concomitant]
     Active Substance: DEXAMETHASONE SODIUM SUCCINATE
     Dosage: 20 MG ROUTE OF ADMIN (FREE TEXT): UNKNOWN ROUTE
     Dates: start: 20210323, end: 20210323
  765. DEXAMETHASONE SODIUM SUCCINATE [Concomitant]
     Active Substance: DEXAMETHASONE SODIUM SUCCINATE
     Dosage: 20 MG ROUTE OF ADMIN (FREE TEXT): UNKNOWN ROUTE/20 MILLIGRAM, UNK
     Route: 042
     Dates: start: 20210302, end: 20210302
  766. DEXAMETHASONE SODIUM SUCCINATE [Concomitant]
     Active Substance: DEXAMETHASONE SODIUM SUCCINATE
     Dosage: 20 MG ROUTE OF ADMIN (FREE TEXT): UNKNOWN ROUTE
     Route: 065
     Dates: start: 20210302, end: 20210302
  767. DEXAMETHASONE SODIUM SUCCINATE [Concomitant]
     Active Substance: DEXAMETHASONE SODIUM SUCCINATE
     Dosage: DURATION: 1 DAY;
     Dates: start: 20210209, end: 20210209
  768. DEXAMETHASONE SODIUM SUCCINATE [Concomitant]
     Active Substance: DEXAMETHASONE SODIUM SUCCINATE
     Dosage: DURATION: 1 DAY;
     Dates: start: 20210209, end: 20210209
  769. DEXAMETHASONE SODIUM SUCCINATE [Concomitant]
     Active Substance: DEXAMETHASONE SODIUM SUCCINATE
     Dosage: 20 MG ROUTE OF ADMIN (FREE TEXT): UNKNOWN ROUTE
     Route: 065
     Dates: start: 20210219, end: 20210219
  770. DEXAMETHASONE SODIUM SUCCINATE [Concomitant]
     Active Substance: DEXAMETHASONE SODIUM SUCCINATE
     Dosage: 20 MG, DURATION: 1 DAY;
     Route: 042
     Dates: start: 20210323, end: 20210323
  771. DEXAMETHASONE SODIUM SUCCINATE [Concomitant]
     Active Substance: DEXAMETHASONE SODIUM SUCCINATE
     Dosage: 20 MG
     Dates: start: 20210119, end: 20210119
  772. DEXAMETHASONE SODIUM SUCCINATE [Concomitant]
     Active Substance: DEXAMETHASONE SODIUM SUCCINATE
     Dosage: 20 MG
     Dates: start: 20210302, end: 20210302
  773. FILGRASTIM [Concomitant]
     Active Substance: FILGRASTIM
     Indication: Prophylaxis
     Dosage: UNK
     Dates: start: 20201129, end: 20201206
  774. FILGRASTIM [Concomitant]
     Active Substance: FILGRASTIM
     Dosage: UNK; ADDITIONAL INFO: ROUTE:UNKNOWN ROUTE:UNKNOWN
     Dates: start: 20201220
  775. FILGRASTIM [Concomitant]
     Active Substance: FILGRASTIM
     Dosage: UNK; ADDITIONAL INFO: ROUTE:UNKNOWN ROUTE:UNKNOWN
     Dates: start: 20201220
  776. FILGRASTIM [Concomitant]
     Active Substance: FILGRASTIM
     Dosage: (DOSAGE TEXT: UNK ROUTE OF ADMIN (FREE TEXT): UNKNOWN ROUTE); ADDITIONAL INFO: ROUTE:UNKNOWN ROUTE:U
     Dates: start: 20201220
  777. FILGRASTIM [Concomitant]
     Active Substance: FILGRASTIM
     Dosage: UNK; ADDITIONAL INFO: ROUTE:UNKNOWN ROUTE:UNKNOWN
     Dates: start: 20201129, end: 20201206
  778. FILGRASTIM [Concomitant]
     Active Substance: FILGRASTIM
     Dosage: (DOSAGE TEXT: UNK ROUTE OF ADMIN (FREE TEXT): UNKNOWN ROUTE);  ADDITIONAL INFO: ROUTE:UNKNOWN ROUTE:
     Dates: start: 20201129, end: 20201206
  779. FILGRASTIM [Concomitant]
     Active Substance: FILGRASTIM
     Dosage: (DOSAGE TEXT: UNKUNK);  ADDITIONAL INFO: ROUTE:UNKNOWN ROUTE:UNKNOWN
     Dates: start: 20201129, end: 20201206
  780. FILGRASTIM [Concomitant]
     Active Substance: FILGRASTIM
     Dosage: (DOSAGE TEXT: UNKUNK);  ADDITIONAL INFO: ROUTE:UNKNOWN ROUTE:UNKNOWN
     Dates: start: 20201129, end: 20201206
  781. FILGRASTIM [Concomitant]
     Active Substance: FILGRASTIM
     Dosage: (DOSAGE TEXT: UNK ROUTE OF ADMIN (FREE TEXT): UNKNOWN ROUTE);  ADDITIONAL INFO: ROUTE:UNKNOWN ROUTE:
     Dates: start: 20201220
  782. FILGRASTIM [Concomitant]
     Active Substance: FILGRASTIM
     Dosage: (DOSAGE TEXT: UNKUNK)
     Dates: start: 20201129, end: 20201206
  783. FILGRASTIM [Concomitant]
     Active Substance: FILGRASTIM
     Dosage: (DOSAGE TEXT: UNK ROUTE OF ADMIN (FREE TEXT): UNKNOWN ROUTE); ADDITIONAL INFO: ROUTE:UNKNOWN ROUTE:U
     Dates: start: 20201220
  784. FILGRASTIM [Concomitant]
     Active Substance: FILGRASTIM
     Dosage: (DOSAGE TEXT: UNK ROUTE OF ADMIN (FREE TEXT): UNKNOWN ROUTE); ADDITIONAL INFO: ROUTE:UNKNOWN ROUTE:U
     Dates: start: 20201220
  785. FILGRASTIM [Concomitant]
     Active Substance: FILGRASTIM
     Dosage: (DOSAGE TEXT: UNKUNK)
     Dates: start: 20201129, end: 20201206
  786. FILGRASTIM [Concomitant]
     Active Substance: FILGRASTIM
     Dosage: (DOSAGE TEXT: UNKUNK)
     Dates: start: 20201129, end: 20201206
  787. FILGRASTIM [Concomitant]
     Active Substance: FILGRASTIM
     Dosage: (DOSAGE TEXT: UNK ROUTE OF ADMIN (FREE TEXT): UNKNOWN ROUTE); ADDITIONAL INFO: ROUTE:UNKNOWN ROUTE:U
     Dates: start: 20201220
  788. FILGRASTIM [Concomitant]
     Active Substance: FILGRASTIM
     Dosage: (DOSAGE TEXT: UNKUNK)
     Dates: start: 20201129, end: 20201206
  789. FILGRASTIM [Concomitant]
     Active Substance: FILGRASTIM
     Dosage: (DOSAGE TEXT: UNK ROUTE OF ADMIN (FREE TEXT): UNKNOWN ROUTE); ADDITIONAL INFO: ROUTE:UNKNOWN ROUTE:U
     Dates: start: 20201220
  790. FILGRASTIM [Concomitant]
     Active Substance: FILGRASTIM
     Dosage: (DOSAGE TEXT: UNK ROUTE OF ADMIN (FREE TEXT): UNKNOWN ROUTE); ADDITIONAL INFO: ROUTE:UNKNOWN ROUTE:U
     Dates: start: 20201220
  791. FILGRASTIM [Concomitant]
     Active Substance: FILGRASTIM
     Dosage: (DOSAGE TEXT: UNKUNK)
     Dates: start: 20201129, end: 20201206
  792. FILGRASTIM [Concomitant]
     Active Substance: FILGRASTIM
     Dosage: (DOSAGE TEXT: UNKUNK)
     Dates: start: 20201129, end: 20201206
  793. FILGRASTIM [Concomitant]
     Active Substance: FILGRASTIM
     Dosage: (DOSAGE TEXT: UNK ROUTE OF ADMIN (FREE TEXT): UNKNOWN ROUTE); ADDITIONAL INFO: ROUTE:UNKNOWN ROUTE:U
     Dates: start: 20201220
  794. FILGRASTIM [Concomitant]
     Active Substance: FILGRASTIM
     Dosage: (DOSAGE TEXT: UNKUNK); ADDITIONAL INFO: ROUTE:UNKNOWN ROUTE:UNKNOWN
     Dates: start: 20201129, end: 20201206
  795. FILGRASTIM [Concomitant]
     Active Substance: FILGRASTIM
     Dosage: UNK ROUTE OF ADMIN (FREE TEXT): UNKNOWN ROUTE; ADDITIONAL INFO: ROUTE:UNKNOWN ROUTE:UNKNOWN
     Dates: start: 20201129, end: 20201206
  796. FILGRASTIM [Concomitant]
     Active Substance: FILGRASTIM
     Dosage: UNK ROUTE OF ADMIN (FREE TEXT): UNKNOWN ROUTE; ADDITIONAL INFO: ROUTE:UNKNOWN ROUTE:UNKNOWN
     Dates: start: 20201129, end: 20201206
  797. FILGRASTIM [Concomitant]
     Active Substance: FILGRASTIM
     Dosage: UNK ROUTE OF ADMIN (FREE TEXT): UNKNOWN ROUTE; ADDITIONAL INFO: ROUTE:UNKNOWN ROUTE:UNKNOWN
     Dates: start: 20201129, end: 20201206
  798. FILGRASTIM [Concomitant]
     Active Substance: FILGRASTIM
     Dosage: UNK ROUTE OF ADMIN (FREE TEXT): UNKNOWN ROUTE; ADDITIONAL INFO: ROUTE:UNKNOWN ROUTE:UNKNOWN
     Dates: start: 20201129, end: 20201206
  799. FILGRASTIM [Concomitant]
     Active Substance: FILGRASTIM
     Dosage: UNK ROUTE OF ADMIN (FREE TEXT): UNKNOWN ROUTE; ADDITIONAL INFO: ROUTE:UNKNOWN ROUTE:UNKNOWN
     Dates: start: 20201129, end: 20201206
  800. FILGRASTIM [Concomitant]
     Active Substance: FILGRASTIM
     Dosage: UNK ROUTE OF ADMIN (FREE TEXT): UNKNOWN ROUTE; ADDITIONAL INFO: ROUTE:UNKNOWN ROUTE:UNKNOWN
     Dates: start: 20201129, end: 20201206
  801. FILGRASTIM [Concomitant]
     Active Substance: FILGRASTIM
     Dosage: UNK ROUTE OF ADMIN (FREE TEXT): UNKNOWN ROUTE; ADDITIONAL INFO: ROUTE:UNKNOWN ROUTE:UNKNOWN
     Dates: start: 20201129, end: 20201206
  802. FILGRASTIM [Concomitant]
     Active Substance: FILGRASTIM
     Indication: Prophylaxis
     Dosage: UNK
     Route: 065
     Dates: start: 20201129, end: 20201206
  803. FILGRASTIM [Concomitant]
     Active Substance: FILGRASTIM
     Dosage: UNK
     Route: 065
     Dates: start: 20201220, end: 20210513
  804. FILGRASTIM [Concomitant]
     Active Substance: FILGRASTIM
     Dosage: UNK
     Route: 065
     Dates: start: 20201220
  805. OMEPRAZOLE [Concomitant]
     Active Substance: OMEPRAZOLE
     Indication: Gastrointestinal disorder prophylaxis
     Dosage: UNK
     Route: 050
     Dates: start: 20201118
  806. OMEPRAZOLE [Concomitant]
     Active Substance: OMEPRAZOLE
     Dosage: UNK; ADDITIONAL INFO: ROUTE:UNKNOWNADDITIONAL INFO: ROUTE:
     Route: 065
  807. OMEPRAZOLE [Concomitant]
     Active Substance: OMEPRAZOLE
     Dosage: UNK (ADDITIONAL INFO: ROUTE:)
     Route: 065
     Dates: start: 20201118
  808. OMEPRAZOLE [Concomitant]
     Active Substance: OMEPRAZOLE
     Dosage: UNK; ADDITIONAL INFO: ROUTE:UNKNOWNADDITIONAL INFO: ROUTE:
     Dates: start: 20201118
  809. OMEPRAZOLE [Concomitant]
     Active Substance: OMEPRAZOLE
     Dosage: UNK
     Dates: start: 20201118
  810. OMEPRAZOLE [Concomitant]
     Active Substance: OMEPRAZOLE
     Dosage: (DOSAGE TEXT: UNK ROUTE OF ADMIN (FREE TEXT): UNKNOWN ROUTE); ADDITIONAL INFO: ROUTE:UNKNOWNADDITION
  811. OMEPRAZOLE [Concomitant]
     Active Substance: OMEPRAZOLE
     Dosage: (DOSAGE TEXT: UNK ROUTE OF ADMIN (FREE TEXT): UNKNOWN ROUTE); ADDITIONAL INFO: ROUTE:UNKNOWNADDITION
  812. OMEPRAZOLE [Concomitant]
     Active Substance: OMEPRAZOLE
     Dosage: (DOSAGE TEXT: UNK ROUTE OF ADMIN (FREE TEXT): UNKNOWN ROUTE); ADDITIONAL INFO: ROUTE:UNKNOWNADDITION
     Dates: start: 20201118
  813. OMEPRAZOLE [Concomitant]
     Active Substance: OMEPRAZOLE
     Dosage: (DOSAGE TEXT: UNK ROUTE OF ADMIN (FREE TEXT): UNKNOWN ROUTE); ADDITIONAL INFO: ROUTE:UNKNOWNADDITION
  814. OMEPRAZOLE [Concomitant]
     Active Substance: OMEPRAZOLE
     Dosage: (DOSAGE TEXT: UNK ROUTE OF ADMIN (FREE TEXT): UNKNOWN ROUTE); ADDITIONAL INFO: ROUTE:UNKNOWNADDITION
  815. OMEPRAZOLE [Concomitant]
     Active Substance: OMEPRAZOLE
     Dosage: (DOSAGE TEXT: UNK ROUTE OF ADMIN (FREE TEXT): UNKNOWN ROUTE); ADDITIONAL INFO: ROUTE:UNKNOWNADDITION
  816. OMEPRAZOLE [Concomitant]
     Active Substance: OMEPRAZOLE
     Dosage: (DOSAGE TEXT: UNK ROUTE OF ADMIN (FREE TEXT): UNKNOWN ROUTE); ADDITIONAL INFO: ROUTE:UNKNOWNADDITION
  817. OMEPRAZOLE [Concomitant]
     Active Substance: OMEPRAZOLE
     Dosage: (DOSAGE TEXT: UNK ROUTE OF ADMIN (FREE TEXT): UNKNOWN ROUTE); ADDITIONAL INFO: ROUTE:UNKNOWNADDITION
  818. OMEPRAZOLE [Concomitant]
     Active Substance: OMEPRAZOLE
     Dosage: (DOSAGE TEXT: UNK ROUTE OF ADMIN (FREE TEXT): UNKNOWN ROUTE); ADDITIONAL INFO: ROUTE:UNKNOWNADDITION
  819. OMEPRAZOLE [Concomitant]
     Active Substance: OMEPRAZOLE
     Dosage: (DOSAGE TEXT: UNK ROUTE OF ADMIN (FREE TEXT): UNKNOWN ROUTE); ADDITIONAL INFO: ROUTE:UNKNOWNADDITION
  820. OMEPRAZOLE [Concomitant]
     Active Substance: OMEPRAZOLE
     Dosage: (DOSAGE TEXT: UNK ROUTE OF ADMIN (FREE TEXT): UNKNOWN ROUTE); ADDITIONAL INFO: ROUTE:UNKNOWNADDITION
  821. OMEPRAZOLE [Concomitant]
     Active Substance: OMEPRAZOLE
     Dosage: (DOSAGE TEXT: UNK ROUTE OF ADMIN (FREE TEXT): UNKNOWN ROUTE); ADDITIONAL INFO: ROUTE:UNKNOWNADDITION
  822. OMEPRAZOLE [Concomitant]
     Active Substance: OMEPRAZOLE
     Dosage: (DOSAGE TEXT: UNK ROUTE OF ADMIN (FREE TEXT): UNKNOWN ROUTE); ADDITIONAL INFO: ROUTE:UNKNOWNADDITION
  823. OMEPRAZOLE [Concomitant]
     Active Substance: OMEPRAZOLE
     Dosage: (DOSAGE TEXT: UNK ROUTE OF ADMIN (FREE TEXT): UNKNOWN ROUTE); ADDITIONAL INFO: ROUTE:UNKNOWNADDITION
  824. OMEPRAZOLE [Concomitant]
     Active Substance: OMEPRAZOLE
     Dosage: (DOSAGE TEXT: UNK ROUTE OF ADMIN (FREE TEXT): UNKNOWN ROUTE); ADDITIONAL INFO: ROUTE:UNKNOWNADDITION
  825. OMEPRAZOLE [Concomitant]
     Active Substance: OMEPRAZOLE
     Dosage: (DOSAGE TEXT: UNK ROUTE OF ADMIN (FREE TEXT): UNKNOWN ROUTE); ADDITIONAL INFO: ROUTE:UNKNOWNADDITION
  826. OMEPRAZOLE [Concomitant]
     Active Substance: OMEPRAZOLE
     Dosage: UNK
  827. OMEPRAZOLE [Concomitant]
     Active Substance: OMEPRAZOLE
     Dosage: UNK
     Dates: start: 20201118
  828. ACETAMINOPHEN [Concomitant]
     Active Substance: ACETAMINOPHEN
     Indication: Prophylaxis
     Dosage: UNK (ADDITIONAL INFORMATION ON DRUG (FREE TEXT): ADDITIONAL INFO: ROUTE:UNKNOWN ROUTE:UNKNOWN ROUTE:
     Route: 065
     Dates: start: 20201123
  829. ACETAMINOPHEN [Concomitant]
     Active Substance: ACETAMINOPHEN
     Dosage: 1000 MG / ADDITIONAL INFO: ROUTE:; DURATION: 1 DAY; (ADDITIONAL INFORMATION ON DRUG (FREE TEXT): ADD
     Route: 065
     Dates: start: 20201124, end: 20201124
  830. ACETAMINOPHEN [Concomitant]
     Active Substance: ACETAMINOPHEN
     Dosage: 1000 MG; DURATION: 1 DAY; (ADDITIONAL INFORMATION ON DRUG (FREE TEXT): ADDITIONAL INFO: ROUTE:UNKNOW
     Route: 065
     Dates: start: 20201215, end: 20201215
  831. ACETAMINOPHEN [Concomitant]
     Active Substance: ACETAMINOPHEN
     Dosage: 1000 MG; DURATION: 1 DAY; (ADDITIONAL INFORMATION ON DRUG (FREE TEXT): ADDITIONAL INFO: ROUTE:UNKNOW
     Route: 065
     Dates: start: 20210119, end: 20210119
  832. ACETAMINOPHEN [Concomitant]
     Active Substance: ACETAMINOPHEN
     Dosage: 1000 MG;  ADDITIONAL INFO: ROUTE:UNKNOWN ROUTE:UNKNOWN ROUTE:UNKNOWN ROUTE:UNKNOWN
     Route: 048
     Dates: start: 20210126, end: 20210126
  833. ACETAMINOPHEN [Concomitant]
     Active Substance: ACETAMINOPHEN
     Dosage: 100 MG; DURATION: 1 DAY; (ADDITIONAL INFORMATION ON DRUG (FREE TEXT): ADDITIONAL INFO: ROUTE:UNKNOWN
     Route: 065
     Dates: start: 20210126, end: 20210126
  834. ACETAMINOPHEN [Concomitant]
     Active Substance: ACETAMINOPHEN
     Dosage: 1000 MG; DURATION: 1 DAY;
     Route: 050
     Dates: start: 20210126, end: 20210126
  835. ACETAMINOPHEN [Concomitant]
     Active Substance: ACETAMINOPHEN
     Dosage: 1000 MG; DURATION: 1 DAY; (ADDITIONAL INFORMATION ON DRUG (FREE TEXT): ADDITIONAL INFO: ROUTE:UNKNOW
     Route: 065
     Dates: start: 20210209, end: 20210209
  836. ACETAMINOPHEN [Concomitant]
     Active Substance: ACETAMINOPHEN
     Dosage: 1000 MG; DURATION: 1 DAY; (ADDITIONAL INFORMATION ON DRUG (FREE TEXT): ADDITIONAL INFO: ROUTE:UNKNOW
     Route: 065
     Dates: start: 20210216, end: 20210216
  837. ACETAMINOPHEN [Concomitant]
     Active Substance: ACETAMINOPHEN
     Dosage: 1000 MG; DURATION: 1 DAY; (ADDITIONAL INFORMATION ON DRUG (FREE TEXT): ADDITIONAL INFO: ROUTE:UNKNOW
     Route: 065
     Dates: start: 20210302, end: 20210302
  838. ACETAMINOPHEN [Concomitant]
     Active Substance: ACETAMINOPHEN
     Dosage: 1000 MG; DURATION: 1 DAY; (ADDITIONAL INFORMATION ON DRUG (FREE TEXT): ADDITIONAL INFO: ROUTE:UNKNOW
     Route: 065
     Dates: start: 20210309, end: 20210309
  839. ACETAMINOPHEN [Concomitant]
     Active Substance: ACETAMINOPHEN
     Dosage: 1000 MG; DURATION: 1 DAY; (ADDITIONAL INFORMATION ON DRUG (FREE TEXT): ADDITIONAL INFO: ROUTE:UNKNOW
     Route: 048
     Dates: start: 20210323, end: 20210323
  840. ACETAMINOPHEN [Concomitant]
     Active Substance: ACETAMINOPHEN
     Dosage: 1000 MG;  ADDITIONAL INFO: ROUTE:UNKNOWN ROUTE:UNKNOWN ROUTE:UNKNOWN ROUTE:UNKNOWN ROUTE:UNKNOWN ROU
     Route: 065
     Dates: start: 20210323, end: 20210323
  841. ACETAMINOPHEN [Concomitant]
     Active Substance: ACETAMINOPHEN
     Dosage: 100 MG DURATION: 1 DAY;
     Route: 065
     Dates: start: 20210126, end: 20210126
  842. ACETAMINOPHEN [Concomitant]
     Active Substance: ACETAMINOPHEN
     Dosage: 1000 MG; DURATION: 1 DAY; (ADDITIONAL INFORMATION ON DRUG (FREE TEXT): ADDITIONAL INFO: ROUTE:UNKNOW
     Route: 048
     Dates: start: 20201215, end: 20201215
  843. ACETAMINOPHEN [Concomitant]
     Active Substance: ACETAMINOPHEN
     Dosage: 1000 MG / ADDITIONAL INFO: ROUTE:; DURATION: 1 DAY; (ADDITIONAL INFORMATION ON DRUG (FREE TEXT): ADD
     Route: 048
     Dates: start: 20201124, end: 20201124
  844. ACETAMINOPHEN [Concomitant]
     Active Substance: ACETAMINOPHEN
     Dosage: 1000 MG; DURATION: 1 DAY; (ADDITIONAL INFORMATION ON DRUG (FREE TEXT): ADDITIONAL INFO: ROUTE:UNKNOW
     Route: 048
     Dates: start: 20210309, end: 20210309
  845. ACETAMINOPHEN [Concomitant]
     Active Substance: ACETAMINOPHEN
     Dosage: 1000 MG; DURATION: 1 DAY; (ADDITIONAL INFORMATION ON DRUG (FREE TEXT): ADDITIONAL INFO: ROUTE:UNKNOW
     Route: 048
     Dates: start: 20210323, end: 20210323
  846. ACETAMINOPHEN [Concomitant]
     Active Substance: ACETAMINOPHEN
     Dosage: 1000 MG; DURATION: 1 DAY; (ADDITIONAL INFORMATION ON DRUG (FREE TEXT): ADDITIONAL INFO: ROUTE:UNKNOW
     Route: 048
     Dates: start: 20210302, end: 20210302
  847. ACETAMINOPHEN [Concomitant]
     Active Substance: ACETAMINOPHEN
     Dosage: 1000 MG; DURATION: 1 DAY; (ADDITIONAL INFORMATION ON DRUG (FREE TEXT): ADDITIONAL INFO: ROUTE:UNKNOW
     Route: 048
     Dates: start: 20210209, end: 20210209
  848. ACETAMINOPHEN [Concomitant]
     Active Substance: ACETAMINOPHEN
     Dosage: 1000 MG; DURATION: 1 DAY; (ADDITIONAL INFORMATION ON DRUG (FREE TEXT): ADDITIONAL INFO: ROUTE:UNKNOW
     Route: 048
     Dates: start: 20210119, end: 20210119
  849. ACETAMINOPHEN [Concomitant]
     Active Substance: ACETAMINOPHEN
     Dosage: 1000 MG; DURATION: 1 DAY; (ADDITIONAL INFORMATION ON DRUG (FREE TEXT): ADDITIONAL INFO: ROUTE:UNKNOW
     Route: 048
     Dates: start: 20210216, end: 20210216
  850. ACETAMINOPHEN [Concomitant]
     Active Substance: ACETAMINOPHEN
     Dosage: 1000 MG; DURATION: 1 DAY;
     Route: 048
     Dates: start: 20210126, end: 20210126
  851. ACETAMINOPHEN [Concomitant]
     Active Substance: ACETAMINOPHEN
     Dosage: 1000 MG;  ADDITIONAL INFO: ROUTE:UNKNOWN ROUTE:UNKNOWN ROUTE:UNKNOWN ROUTE:UNKNOWN ROUTE:UNKNOWN ROU
     Route: 048
     Dates: start: 20201124, end: 20201124
  852. ACETAMINOPHEN [Concomitant]
     Active Substance: ACETAMINOPHEN
     Dosage: 1000 MG; ADDITIONAL INFO: ROUTE:UNKNOWN ROUTE:UNKNOWN ROUTE:UNKNOWN ROUTE:UNKNOWN
     Dates: start: 20210209, end: 20210209
  853. ACETAMINOPHEN [Concomitant]
     Active Substance: ACETAMINOPHEN
     Dosage: 1000 MG; ADDITIONAL INFO: ROUTE:UNKNOWN ROUTE:UNKNOWN ROUTE:UNKNOWN ROUTE:UNKNOWN
     Route: 048
     Dates: start: 20210323, end: 20210323
  854. ACETAMINOPHEN [Concomitant]
     Active Substance: ACETAMINOPHEN
     Dosage: 1000 MG; UNK ROUTE OF ADMIN (FREE TEXT): UNKNOWN ROUTE
     Dates: start: 20210126, end: 20210126
  855. ACETAMINOPHEN [Concomitant]
     Active Substance: ACETAMINOPHEN
     Dosage: 100 MG;  ADDITIONAL INFO: ROUTE:UNKNOWN ROUTE:UNKNOWN ROUTE:UNKNOWN ROUTE:UNKNOWN
     Route: 048
     Dates: start: 20210126, end: 20210126
  856. ACETAMINOPHEN [Concomitant]
     Active Substance: ACETAMINOPHEN
     Dosage: 1000 MG ROUTE OF ADMIN (FREE TEXT): UNKNOWN ROUTE;  ADDITIONAL INFO: ROUTE:UNKNOWN ROUTE:UNKNOWN ROU
     Route: 065
     Dates: start: 20210323, end: 20210323
  857. ACETAMINOPHEN [Concomitant]
     Active Substance: ACETAMINOPHEN
     Dosage: UNK ROUTE OF ADMIN (FREE TEXT): UNKNOWN ROUTE;  ADDITIONAL INFO: ROUTE:UNKNOWN ROUTE:UNKNOWN ROUTE:U
     Dates: start: 20201123
  858. ACETAMINOPHEN [Concomitant]
     Active Substance: ACETAMINOPHEN
     Dosage: UNK; ADDITIONAL INFO: ROUTE:UNKNOWN ROUTE:UNKNOWN ROUTE:UNKNOWN ROUTE:UNKNOWN
     Dates: start: 20201123
  859. ACETAMINOPHEN [Concomitant]
     Active Substance: ACETAMINOPHEN
     Dosage: UNK ROUTE OF ADMIN (FREE TEXT): UNKNOWN ROUTE; ADDITIONAL INFO: ROUTE:UNKNOWN ROUTE:UNKNOWN ROUTE:UN
     Dates: start: 20201123
  860. ACETAMINOPHEN [Concomitant]
     Active Substance: ACETAMINOPHEN
     Dosage: 1000 MG;  ADDITIONAL INFO: ROUTE:UNKNOWN ROUTE:UNKNOWN ROUTE:UNKNOWN ROUTE:UNKNOWN ROUTE:UNKNOWN ROU
     Dates: start: 20210323, end: 20210323
  861. ACETAMINOPHEN [Concomitant]
     Active Substance: ACETAMINOPHEN
     Dosage: 1000 MG; ADDITIONAL INFO: ROUTE:UNKNOWN ROUTE:UNKNOWN ROUTE:UNKNOWN ROUTE:UNKNOWN ROUTE:UNKNOWN ROUT
     Dates: start: 20210209, end: 20210209
  862. ACETAMINOPHEN [Concomitant]
     Active Substance: ACETAMINOPHEN
     Dosage: 1000 MG; ADDITIONAL INFO: ROUTE:UNKNOWN ROUTE:UNKNOWN ROUTE:UNKNOWN ROUTE:UNKNOWN
     Route: 048
     Dates: start: 20201215, end: 20201215
  863. ACETAMINOPHEN [Concomitant]
     Active Substance: ACETAMINOPHEN
     Dosage: 1000 MG; ADDITIONAL INFO: ROUTE:UNKNOWN ROUTE:UNKNOWN ROUTE:UNKNOWN ROUTE:UNKNOWN
     Route: 048
     Dates: start: 20210119, end: 20210119
  864. ACETAMINOPHEN [Concomitant]
     Active Substance: ACETAMINOPHEN
     Dosage: 1000 MG; ADDITIONAL INFO: ROUTE:UNKNOWN ROUTE:UNKNOWN ROUTE:UNKNOWN ROUTE:UNKNOWN
     Dates: start: 20210302, end: 20210302
  865. ACETAMINOPHEN [Concomitant]
     Active Substance: ACETAMINOPHEN
     Dosage: 1000 UNK
     Dates: start: 20210216, end: 20210216
  866. ACETAMINOPHEN [Concomitant]
     Active Substance: ACETAMINOPHEN
     Dosage: 1000 MG; ADDITIONAL INFO: ROUTE:UNKNOWN ROUTE:UNKNOWN ROUTE:UNKNOWN ROUTE:UNKNOWN
     Dates: start: 20210309, end: 20210309
  867. ACETAMINOPHEN [Concomitant]
     Active Substance: ACETAMINOPHEN
     Dosage: 1000 MG ROUTE OF ADMIN (FREE TEXT): UNKNOWN ROUTE
     Route: 065
     Dates: start: 20210126, end: 20210126
  868. ACETAMINOPHEN [Concomitant]
     Active Substance: ACETAMINOPHEN
     Dosage: 1000 MGUNK; UNK ROUTE OF ADMIN (FREE TEXT): UNKNOWN ROUTE
     Dates: start: 20210309, end: 20210309
  869. ACETAMINOPHEN [Concomitant]
     Active Substance: ACETAMINOPHEN
     Dosage: 1000 MG;  ADDITIONAL INFO: ROUTE:UNKNOWN ROUTE:UNKNOWN ROUTE:UNKNOWN ROUTE:UNKNOWN ROUTE:UNKNOWN ROU
     Dates: start: 20210119, end: 20210119
  870. ACETAMINOPHEN [Concomitant]
     Active Substance: ACETAMINOPHEN
     Dosage: 1000 MG ROUTE OF ADMIN (FREE TEXT): UNKNOWN ROUTE;  ADDITIONAL INFO: ROUTE:UNKNOWN ROUTE:UNKNOWN ROU
     Route: 065
     Dates: start: 20210126, end: 20210126
  871. ACETAMINOPHEN [Concomitant]
     Active Substance: ACETAMINOPHEN
     Dosage: UNK MG
     Dates: start: 20210302, end: 20210302
  872. ACETAMINOPHEN [Concomitant]
     Active Substance: ACETAMINOPHEN
     Dosage: UNK MG
     Dates: start: 20201215, end: 20201215
  873. ACETAMINOPHEN [Concomitant]
     Active Substance: ACETAMINOPHEN
     Dosage: 1000 MG ROUTE OF ADMIN (FREE TEXT): UNKNOWN ROUTE; ADDITIONAL INFO: ROUTE:UNKNOWN ROUTE:UNKNOWN ROUT
     Route: 065
     Dates: start: 20210126, end: 20210126
  874. ACETAMINOPHEN [Concomitant]
     Active Substance: ACETAMINOPHEN
     Dosage: 1000 MG; ADDITIONAL INFO: ROUTE:UNKNOWN ROUTE:UNKNOWN ROUTE:UNKNOWN ROUTE:UNKNOWN
     Dates: start: 20210216, end: 20210216
  875. ACETAMINOPHEN [Concomitant]
     Active Substance: ACETAMINOPHEN
     Dosage: DURATION: 1 DAY; ROUTE OF ADMIN (FREE TEXT): UNKNOWN ROUTE; ADDITIONAL INFO: ROUTE:UNKNOWN ROUTE:UNK
     Dates: start: 20210309, end: 20210309
  876. ACETAMINOPHEN [Concomitant]
     Active Substance: ACETAMINOPHEN
     Dosage: 1000 MG; ADDITIONAL INFO: ROUTE:UNKNOWN ROUTE:UNKNOWN ROUTE:UNKNOWN ROUTE:UNKNOWN ROUTE:UNKNOWN ROUT
     Dates: start: 20210216, end: 20210216
  877. ACETAMINOPHEN [Concomitant]
     Active Substance: ACETAMINOPHEN
     Dosage: 1000 MG ROUTE OF ADMIN (FREE TEXT): UNKNOWN ROUTE; ADDITIONAL INFO: ROUTE:UNKNOWN ROUTE:UNKNOWN ROUT
     Route: 065
     Dates: start: 20210216, end: 20210216
  878. ACETAMINOPHEN [Concomitant]
     Active Substance: ACETAMINOPHEN
     Indication: Prophylaxis
     Dosage: 1000 MG;  ADDITIONAL INFO: ROUTE:UNKNOWN ROUTE:UNKNOWN ROUTE:UNKNOWN ROUTE:UNKNOWN ROUTE:UNKNOWN ROU
     Dates: start: 20201215, end: 20201215
  879. ACETAMINOPHEN [Concomitant]
     Active Substance: ACETAMINOPHEN
     Dosage: 1000 MG ROUTE OF ADMIN (FREE TEXT): UNKNOWN ROUTE
     Dates: start: 20201215, end: 20201215
  880. ACETAMINOPHEN [Concomitant]
     Active Substance: ACETAMINOPHEN
     Dosage: 1000 MG; ADDITIONAL INFO: ROUTE:UNKNOWN ROUTE:UNKNOWN ROUTE:UNKNOWN ROUTE:UNKNOWN ROUTE:UNKNOWN ROUT
     Dates: start: 20210119, end: 20210119
  881. ACETAMINOPHEN [Concomitant]
     Active Substance: ACETAMINOPHEN
     Dosage: 1000 MG ROUTE OF ADMIN (FREE TEXT): UNKNOWN ROUTE
     Dates: start: 20210119, end: 20210119
  882. ACETAMINOPHEN [Concomitant]
     Active Substance: ACETAMINOPHEN
     Dosage: 1000 MG ROUTE OF ADMIN (FREE TEXT): UNKNOWN ROUTE;  ADDITIONAL INFO: ROUTE:UNKNOWN ROUTE:UNKNOWN ROU
     Dates: start: 20210126, end: 20210126
  883. ACETAMINOPHEN [Concomitant]
     Active Substance: ACETAMINOPHEN
     Dosage: 1000 MG ROUTE OF ADMIN (FREE TEXT): UNKNOWN ROUTE; ADDITIONAL INFO: ROUTE:UNKNOWN ROUTE:UNKNOWN ROUT
     Dates: start: 20201124, end: 20201124
  884. ACETAMINOPHEN [Concomitant]
     Active Substance: ACETAMINOPHEN
     Dosage: 1000 MG ROUTE OF ADMIN (FREE TEXT): UNKNOWN ROUTE; ADDITIONAL INFO: ROUTE:UNKNOWN ROUTE:UNKNOWN ROUT
     Dates: start: 20210209, end: 20210209
  885. ACETAMINOPHEN [Concomitant]
     Active Substance: ACETAMINOPHEN
     Dosage: 1000 MG ROUTE OF ADMIN (FREE TEXT): UNKNOWN ROUTE;  ADDITIONAL INFO: ROUTE:UNKNOWN ROUTE:UNKNOWN ROU
     Dates: start: 20210126, end: 20210126
  886. ACETAMINOPHEN [Concomitant]
     Active Substance: ACETAMINOPHEN
     Dosage: DURATION: 1 DAY;  ADDITIONAL INFO: ROUTE:UNKNOWN ROUTE:UNKNOWN ROUTE:UNKNOWN ROUTE:UNKNOWN ROUTE:UNK
     Dates: start: 20210309, end: 20210309
  887. ACETAMINOPHEN [Concomitant]
     Active Substance: ACETAMINOPHEN
     Dosage: DURATION: 1 DAY; ROUTE OF ADMIN (FREE TEXT): UNKNOWN ROUTE;  ADDITIONAL INFO: ROUTE:UNKNOWN ROUTE:UN
     Dates: start: 20210309, end: 20210309
  888. ACETAMINOPHEN [Concomitant]
     Active Substance: ACETAMINOPHEN
     Dosage: 1000 MG;  ADDITIONAL INFO: ROUTE:UNKNOWN ROUTE:UNKNOWN ROUTE:UNKNOWN ROUTE:UNKNOWN ROUTE:UNKNOWN ROU
     Dates: start: 20210302, end: 20210302
  889. ACETAMINOPHEN [Concomitant]
     Active Substance: ACETAMINOPHEN
     Dosage: 1000 MG ROUTE OF ADMIN (FREE TEXT): UNKNOWN ROUTE;  ADDITIONAL INFO: ROUTE:UNKNOWN ROUTE:UNKNOWN ROU
     Dates: start: 20210126, end: 20210126
  890. ACETAMINOPHEN [Concomitant]
     Active Substance: ACETAMINOPHEN
     Dosage: 1000 MG ROUTE OF ADMIN (FREE TEXT): UNKNOWN ROUTE; ADDITIONAL INFO: ROUTE:UNKNOWN ROUTE:UNKNOWN ROUT
     Dates: start: 20210302, end: 20210302
  891. ACETAMINOPHEN [Concomitant]
     Active Substance: ACETAMINOPHEN
     Dosage: 1000 MG ROUTE OF ADMIN (FREE TEXT): UNKNOWN ROUTE; ADDITIONAL INFO: ROUTE:UNKNOWN ROUTE:UNKNOWN ROUT
     Dates: start: 20210119, end: 20210119
  892. ACETAMINOPHEN [Concomitant]
     Active Substance: ACETAMINOPHEN
     Dosage: 1000 MG ROUTE OF ADMIN (FREE TEXT): UNKNOWN ROUTE; ADDITIONAL INFO: ROUTE:UNKNOWN ROUTE:UNKNOWN ROUT
     Dates: start: 20210216, end: 20210216
  893. ACETAMINOPHEN [Concomitant]
     Active Substance: ACETAMINOPHEN
     Dosage: 1000 MG ROUTE OF ADMIN (FREE TEXT): UNKNOWN ROUTE; ADDITIONAL INFO: ROUTE:UNKNOWN ROUTE:UNKNOWN ROUT
     Dates: start: 20201215, end: 20201215
  894. ACETAMINOPHEN [Concomitant]
     Active Substance: ACETAMINOPHEN
     Dosage: 1000 MG ROUTE OF ADMIN (FREE TEXT): UNKNOWN ROUTE; ADDITIONAL INFO: ROUTE:UNKNOWN ROUTE:UNKNOWN ROUT
     Dates: start: 20201124, end: 20201124
  895. ACETAMINOPHEN [Concomitant]
     Active Substance: ACETAMINOPHEN
     Dosage: 1000 MG ROUTE OF ADMIN (FREE TEXT): UNKNOWN ROUTE;  ADDITIONAL INFO: ROUTE:UNKNOWN ROUTE:UNKNOWN ROU
     Dates: start: 20210126, end: 20210126
  896. ACETAMINOPHEN [Concomitant]
     Active Substance: ACETAMINOPHEN
     Dosage: 1000 MG ROUTE OF ADMIN (FREE TEXT): UNKNOWN ROUTE
     Dates: start: 20210302, end: 20210302
  897. ACETAMINOPHEN [Concomitant]
     Active Substance: ACETAMINOPHEN
     Dosage: 1000 MG ROUTE OF ADMIN (FREE TEXT): UNKNOWN ROUTE; ADDITIONAL INFO: ROUTE:UNKNOWN ROUTE:UNKNOWN ROUT
     Dates: start: 20210209, end: 20210209
  898. ACETAMINOPHEN [Concomitant]
     Active Substance: ACETAMINOPHEN
     Dosage: 1000 MG ROUTE OF ADMIN (FREE TEXT): UNKNOWN ROUTE; ADDITIONAL INFO: ROUTE:UNKNOWN ROUTE:UNKNOWN ROUT
     Dates: start: 20210126, end: 20210126
  899. ACETAMINOPHEN [Concomitant]
     Active Substance: ACETAMINOPHEN
     Dosage: 1000 MG ROUTE OF ADMIN (FREE TEXT): UNKNOWN ROUTE
     Dates: start: 20210309, end: 20210309
  900. ACETAMINOPHEN [Concomitant]
     Active Substance: ACETAMINOPHEN
     Dosage: 1000 MG ROUTE OF ADMIN (FREE TEXT): UNKNOWN ROUTE;  ADDITIONAL INFO: ROUTE:UNKNOWN ROUTE:UNKNOWN ROU
     Dates: start: 20210126, end: 20210126
  901. ACETAMINOPHEN [Concomitant]
     Active Substance: ACETAMINOPHEN
     Dosage: 1000 MG ROUTE OF ADMIN (FREE TEXT): UNKNOWN ROUTE;  ADDITIONAL INFO: ROUTE:UNKNOWN ROUTE:UNKNOWN ROU
     Dates: start: 20210216, end: 20210216
  902. ACETAMINOPHEN [Concomitant]
     Active Substance: ACETAMINOPHEN
     Dosage: 1000 MG ROUTE OF ADMIN (FREE TEXT): UNKNOWN ROUTE
     Dates: start: 20210216, end: 20210216
  903. ACETAMINOPHEN [Concomitant]
     Active Substance: ACETAMINOPHEN
     Dosage: 1000 MG ROUTE OF ADMIN (FREE TEXT): UNKNOWN ROUTE;  ADDITIONAL INFO: ROUTE:UNKNOWN ROUTE:UNKNOWN ROU
     Dates: start: 20210302, end: 20210302
  904. ACETAMINOPHEN [Concomitant]
     Active Substance: ACETAMINOPHEN
     Dosage: 1000 MG ROUTE OF ADMIN (FREE TEXT): UNKNOWN ROUTE;  ADDITIONAL INFO: ROUTE:UNKNOWN ROUTE:UNKNOWN ROU
     Dates: start: 20210302, end: 20210302
  905. ACETAMINOPHEN [Concomitant]
     Active Substance: ACETAMINOPHEN
     Dosage: 1000 MG ROUTE OF ADMIN (FREE TEXT): UNKNOWN ROUTE; ADDITIONAL INFO: ROUTE:UNKNOWN ROUTE:UNKNOWN ROUT
     Dates: start: 20201124, end: 20201124
  906. ACETAMINOPHEN [Concomitant]
     Active Substance: ACETAMINOPHEN
     Dosage: 1000 MG ROUTE OF ADMIN (FREE TEXT): UNKNOWN ROUTE
     Dates: start: 20201124, end: 20201124
  907. ACETAMINOPHEN [Concomitant]
     Active Substance: ACETAMINOPHEN
     Dosage: 1000 MG ROUTE OF ADMIN (FREE TEXT): UNKNOWN ROUTE; ADDITIONAL INFO: ROUTE:UNKNOWN ROUTE:UNKNOWN ROUT
     Dates: start: 20210119, end: 20210119
  908. ACETAMINOPHEN [Concomitant]
     Active Substance: ACETAMINOPHEN
     Dosage: 1000 MG ROUTE OF ADMIN (FREE TEXT): UNKNOWN ROUTE; ADDITIONAL INFO: ROUTE:UNKNOWN ROUTE:UNKNOWN ROUT
     Dates: start: 20210119, end: 20210119
  909. ACETAMINOPHEN [Concomitant]
     Active Substance: ACETAMINOPHEN
     Dosage: 1000 MG ROUTE OF ADMIN (FREE TEXT): UNKNOWN ROUTE; ADDITIONAL INFO: ROUTE:UNKNOWN ROUTE:UNKNOWN ROUT
     Dates: start: 20201215, end: 20201215
  910. ACETAMINOPHEN [Concomitant]
     Active Substance: ACETAMINOPHEN
     Dosage: 1000 MG ROUTE OF ADMIN (FREE TEXT): UNKNOWN ROUTE; ADDITIONAL INFO: ROUTE:UNKNOWN ROUTE:UNKNOWN ROUT
     Dates: start: 20201215, end: 20201215
  911. ACETAMINOPHEN [Concomitant]
     Active Substance: ACETAMINOPHEN
     Dosage: 1000 MG ROUTE OF ADMIN (FREE TEXT): UNKNOWN ROUTE; ADDITIONAL INFO: ROUTE:UNKNOWN ROUTE:UNKNOWN ROUT
     Dates: start: 20210309, end: 20210309
  912. ACETAMINOPHEN [Concomitant]
     Active Substance: ACETAMINOPHEN
     Dosage: 1000 MG ROUTE OF ADMIN (FREE TEXT): UNKNOWN ROUTE; ADDITIONAL INFO: ROUTE:UNKNOWN ROUTE:UNKNOWN ROUT
     Dates: start: 20210309, end: 20210309
  913. ACETAMINOPHEN [Concomitant]
     Active Substance: ACETAMINOPHEN
     Dosage: 1000 MG ROUTE OF ADMIN (FREE TEXT): UNKNOWN ROUTE; ADDITIONAL INFO: ROUTE:UNKNOWN ROUTE:UNKNOWN ROUT
     Dates: start: 20210209, end: 20210209
  914. ACETAMINOPHEN [Concomitant]
     Active Substance: ACETAMINOPHEN
     Dosage: 1000 MG ROUTE OF ADMIN (FREE TEXT): UNKNOWN ROUTE; ADDITIONAL INFO: ROUTE:UNKNOWN ROUTE:UNKNOWN ROUT
     Dates: start: 20210209, end: 20210209
  915. ACETAMINOPHEN [Concomitant]
     Active Substance: ACETAMINOPHEN
     Dosage: 1000 MG ROUTE OF ADMIN (FREE TEXT): UNKNOWN ROUTE; ADDITIONAL INFO: ROUTE:UNKNOWN ROUTE:UNKNOWN ROUT
     Dates: start: 20210126, end: 20210126
  916. ACETAMINOPHEN [Concomitant]
     Active Substance: ACETAMINOPHEN
     Dosage: 1000 MG ROUTE OF ADMIN (FREE TEXT): UNKNOWN ROUTE; ADDITIONAL INFO: ROUTE:UNKNOWN ROUTE:UNKNOWN ROUT
     Dates: start: 20210126, end: 20210126
  917. ACETAMINOPHEN [Concomitant]
     Active Substance: ACETAMINOPHEN
     Dosage: 1000 MG ROUTE OF ADMIN (FREE TEXT): UNKNOWN ROUTE; ADDITIONAL INFO: ROUTE:UNKNOWN ROUTE:UNKNOWN ROUT
     Dates: start: 20210126, end: 20210126
  918. ACETAMINOPHEN [Concomitant]
     Active Substance: ACETAMINOPHEN
     Dosage: 1000 MG ROUTE OF ADMIN (FREE TEXT): UNKNOWN ROUTE; ADDITIONAL INFO: ROUTE:UNKNOWN ROUTE:UNKNOWN ROUT
     Dates: start: 20210126, end: 20210126
  919. ACETAMINOPHEN [Concomitant]
     Active Substance: ACETAMINOPHEN
     Dosage: 1000 MG ROUTE OF ADMIN (FREE TEXT): UNKNOWN ROUTE; ADDITIONAL INFO: ROUTE:UNKNOWN ROUTE:UNKNOWN ROUT
     Dates: start: 20201124, end: 20201124
  920. ACETAMINOPHEN [Concomitant]
     Active Substance: ACETAMINOPHEN
     Dosage: 1000 MG ROUTE OF ADMIN (FREE TEXT): UNKNOWN ROUTE
     Dates: start: 20201124, end: 20201124
  921. ACETAMINOPHEN [Concomitant]
     Active Substance: ACETAMINOPHEN
     Dosage: 1000 MG ROUTE OF ADMIN (FREE TEXT): UNKNOWN ROUTE; ADDITIONAL INFO: ROUTE:UNKNOWN ROUTE:UNKNOWN ROUT
     Dates: start: 20210323, end: 20210323
  922. ACETAMINOPHEN [Concomitant]
     Active Substance: ACETAMINOPHEN
     Dosage: 1000 MG ROUTE OF ADMIN (FREE TEXT): UNKNOWN ROUTE; ADDITIONAL INFO: ROUTE:UNKNOWN ROUTE:UNKNOWN ROUT
     Dates: start: 20210323, end: 20210323
  923. ACETAMINOPHEN [Concomitant]
     Active Substance: ACETAMINOPHEN
     Dosage: 1000 MG ROUTE OF ADMIN (FREE TEXT): UNKNOWN ROUTE; ADDITIONAL INFO: ROUTE:UNKNOWN ROUTE:UNKNOWN ROUT
     Dates: start: 20210309, end: 20210309
  924. ACETAMINOPHEN [Concomitant]
     Active Substance: ACETAMINOPHEN
     Dosage: 1000 MG ROUTE OF ADMIN (FREE TEXT): UNKNOWN ROUTE; ADDITIONAL INFO: ROUTE:UNKNOWN ROUTE:UNKNOWN ROUT
     Dates: start: 20210309, end: 20210309
  925. ACETAMINOPHEN [Concomitant]
     Active Substance: ACETAMINOPHEN
     Dosage: 1000 MG ROUTE OF ADMIN (FREE TEXT): UNKNOWN ROUTE; ADDITIONAL INFO: ROUTE:UNKNOWN ROUTE:UNKNOWN ROUT
     Dates: start: 20210126, end: 20210126
  926. ACETAMINOPHEN [Concomitant]
     Active Substance: ACETAMINOPHEN
     Dosage: 1000 MG ROUTE OF ADMIN (FREE TEXT): UNKNOWN ROUTE; ADDITIONAL INFO: ROUTE:UNKNOWN ROUTE:UNKNOWN ROUT
     Dates: start: 20210126, end: 20210126
  927. ACETAMINOPHEN [Concomitant]
     Active Substance: ACETAMINOPHEN
     Dosage: 1000 MG ROUTE OF ADMIN (FREE TEXT): UNKNOWN ROUTE; ADDITIONAL INFO: ROUTE:UNKNOWN ROUTE:UNKNOWN ROUT
     Dates: start: 20210119, end: 20210119
  928. ACETAMINOPHEN [Concomitant]
     Active Substance: ACETAMINOPHEN
     Indication: Prophylaxis
     Dosage: 1000 MG ROUTE OF ADMIN (FREE TEXT): UNKNOWN ROUTE; ADDITIONAL INFO: ROUTE:UNKNOWN ROUTE:UNKNOWN ROUT
     Dates: start: 20210119, end: 20210119
  929. ACETAMINOPHEN [Concomitant]
     Active Substance: ACETAMINOPHEN
     Dosage: 1000 MG ROUTE OF ADMIN (FREE TEXT): UNKNOWN ROUTE
     Dates: start: 20210209, end: 20210209
  930. ACETAMINOPHEN [Concomitant]
     Active Substance: ACETAMINOPHEN
     Dosage: 1000 MG ROUTE OF ADMIN (FREE TEXT): UNKNOWN ROUTE
     Dates: start: 20210209, end: 20210209
  931. ACETAMINOPHEN [Concomitant]
     Active Substance: ACETAMINOPHEN
     Dosage: 1000 MG ROUTE OF ADMIN (FREE TEXT): UNKNOWN ROUTE; ADDITIONAL INFO: ROUTE:UNKNOWN ROUTE:UNKNOWN ROUT
     Dates: start: 20210216, end: 20210216
  932. ACETAMINOPHEN [Concomitant]
     Active Substance: ACETAMINOPHEN
     Dosage: 1000 MG ROUTE OF ADMIN (FREE TEXT): UNKNOWN ROUTE
     Dates: start: 20210216, end: 20210216
  933. ACETAMINOPHEN [Concomitant]
     Active Substance: ACETAMINOPHEN
     Dosage: 1000 MG ROUTE OF ADMIN (FREE TEXT): UNKNOWN ROUTE
     Dates: start: 20201215, end: 20201215
  934. ACETAMINOPHEN [Concomitant]
     Active Substance: ACETAMINOPHEN
     Dosage: 1000 MG ROUTE OF ADMIN (FREE TEXT): UNKNOWN ROUTE
     Dates: start: 20201215, end: 20201215
  935. ACETAMINOPHEN [Concomitant]
     Active Substance: ACETAMINOPHEN
     Dosage: 1000 MG ROUTE OF ADMIN (FREE TEXT): UNKNOWN ROUTE; ADDITIONAL INFO: ROUTE:UNKNOWN ROUTE:UNKNOWN ROUT
     Dates: start: 20210302, end: 20210302
  936. ACETAMINOPHEN [Concomitant]
     Active Substance: ACETAMINOPHEN
     Dosage: 1000 MG ROUTE OF ADMIN (FREE TEXT): UNKNOWN ROUTE
     Dates: start: 20210302, end: 20210302
  937. ACETAMINOPHEN [Concomitant]
     Active Substance: ACETAMINOPHEN
     Dosage: UNK
     Dates: start: 20201215, end: 20201215
  938. ACETAMINOPHEN [Concomitant]
     Active Substance: ACETAMINOPHEN
     Dosage: 1000 MG;  ADDITIONAL INFO: ROUTE:UNKNOWN ROUTE:UNKNOWN ROUTE:UNKNOWN ROUTE:UNKNOWN ROUTE:UNKNOWN ROU
     Dates: start: 20210126, end: 20210126
  939. ACETAMINOPHEN [Concomitant]
     Active Substance: ACETAMINOPHEN
     Dosage: 100 MG ROUTE OF ADMIN (FREE TEXT): UNKNOWN ROUTE;  ADDITIONAL INFO: ROUTE:UNKNOWN ROUTE:UNKNOWN ROUT
     Dates: start: 20210126, end: 20210126
  940. ACETAMINOPHEN [Concomitant]
     Active Substance: ACETAMINOPHEN
     Dosage: 1000 MG; ADDITIONAL INFO: ROUTE:UNKNOWN ROUTE:UNKNOWN ROUTE:UNKNOWN ROUTE:UNKNOWN ROUTE:UNKNOWN ROUT
     Dates: start: 20201215, end: 20201215
  941. ACETAMINOPHEN [Concomitant]
     Active Substance: ACETAMINOPHEN
     Dosage: UNK; ADDITIONAL INFO: ROUTE:UNKNOWN ROUTE:UNKNOWN ROUTE:UNKNOWN ROUTE:UNKNOWN ROUTE:UNKNOWN ROUTE:UN
     Dates: start: 20201123
  942. ACETAMINOPHEN [Concomitant]
     Active Substance: ACETAMINOPHEN
     Dosage: 1000 MG; ADDITIONAL INFO: ROUTE:UNKNOWN ROUTE:UNKNOWN ROUTE:UNKNOWN ROUTE:UNKNOWN ROUTE:UNKNOWN ROUT
     Dates: start: 20201124, end: 20201124
  943. ACETAMINOPHEN [Concomitant]
     Active Substance: ACETAMINOPHEN
     Dosage: 100 MG ROUTE OF ADMIN (FREE TEXT): UNKNOWN ROUTE; ADDITIONAL INFO: ROUTE:UNKNOWN ROUTE:UNKNOWN ROUTE
     Dates: start: 20210126, end: 20210126
  944. ACETAMINOPHEN [Concomitant]
     Active Substance: ACETAMINOPHEN
     Dosage: 1000 MG; ADDITIONAL INFO: ROUTE:UNKNOWN ROUTE:UNKNOWN ROUTE:UNKNOWN ROUTE:UNKNOWN ROUTE:UNKNOWN ROUT
     Dates: start: 20210209, end: 20210209
  945. ACETAMINOPHEN [Concomitant]
     Active Substance: ACETAMINOPHEN
     Dosage: 100 MG ROUTE OF ADMIN (FREE TEXT): UNKNOWN ROUTE; ADDITIONAL INFO: ROUTE:UNKNOWN ROUTE:UNKNOWN ROUTE
     Dates: start: 20210126, end: 20210126
  946. ACETAMINOPHEN [Concomitant]
     Active Substance: ACETAMINOPHEN
     Dosage: 1000 MG; ADDITIONAL INFO: ROUTE:UNKNOWN ROUTE:UNKNOWN ROUTE:UNKNOWN ROUTE:UNKNOWN ROUTE:UNKNOWN ROUT
     Dates: start: 20210302, end: 20210302
  947. ACETAMINOPHEN [Concomitant]
     Active Substance: ACETAMINOPHEN
     Dosage: 1000 MG, DURATION: 1 DAY ROUTE OF ADMIN (FREE TEXT): UNKNOWN ROUTE;  ADDITIONAL INFO: ROUTE:UNKNOWN
     Dates: start: 20210309, end: 20210309
  948. ACETAMINOPHEN [Concomitant]
     Active Substance: ACETAMINOPHEN
     Dosage: UNK ROUTE OF ADMIN (FREE TEXT): UNKNOWN ROUTE; ADDITIONAL INFO: ROUTE:UNKNOWN ROUTE:UNKNOWN ROUTE:UN
     Dates: start: 20201123
  949. ACETAMINOPHEN [Concomitant]
     Active Substance: ACETAMINOPHEN
     Dosage: UNK ROUTE OF ADMIN (FREE TEXT): UNKNOWN ROUTE; ADDITIONAL INFO: ROUTE:UNKNOWN ROUTE:UNKNOWN ROUTE:UN
     Dates: start: 20201123
  950. ACETAMINOPHEN [Concomitant]
     Active Substance: ACETAMINOPHEN
     Dosage: 1000 MG
     Route: 048
     Dates: start: 20210323, end: 20210323
  951. ACETAMINOPHEN [Concomitant]
     Active Substance: ACETAMINOPHEN
     Dosage: 1000 MG
     Route: 048
     Dates: start: 20210119, end: 20210119
  952. ACETAMINOPHEN [Concomitant]
     Active Substance: ACETAMINOPHEN
     Dosage: UNK
     Route: 065
     Dates: start: 20201123
  953. ACETAMINOPHEN [Concomitant]
     Active Substance: ACETAMINOPHEN
     Dosage: 1000 MG
     Route: 048
     Dates: start: 20210209, end: 20210209
  954. ACETAMINOPHEN [Concomitant]
     Active Substance: ACETAMINOPHEN
     Dosage: 1000 MG
     Route: 048
     Dates: start: 20210126, end: 20210126
  955. ACETAMINOPHEN [Concomitant]
     Active Substance: ACETAMINOPHEN
     Dosage: 1000 MG
     Route: 048
     Dates: start: 20210309, end: 20210309
  956. ACETAMINOPHEN [Concomitant]
     Active Substance: ACETAMINOPHEN
     Dosage: 1000 MG
     Route: 048
     Dates: start: 20201215, end: 20201215
  957. ACETAMINOPHEN [Concomitant]
     Active Substance: ACETAMINOPHEN
     Dosage: 1000 MG
     Route: 048
     Dates: start: 20210216, end: 20210216
  958. ACETAMINOPHEN [Concomitant]
     Active Substance: ACETAMINOPHEN
     Dosage: 1000 MG
     Route: 048
     Dates: start: 20210302, end: 20210302
  959. ACETAMINOPHEN [Concomitant]
     Active Substance: ACETAMINOPHEN
     Dosage: 1000 MG
     Route: 048
     Dates: start: 20201124, end: 20201124
  960. ACETAMINOPHEN [Concomitant]
     Active Substance: ACETAMINOPHEN
     Dosage: 1000 MG
     Dates: start: 20210323, end: 20210323
  961. ACETAMINOPHEN [Concomitant]
     Active Substance: ACETAMINOPHEN
     Dosage: 1000 MG
     Route: 048
     Dates: start: 20210123, end: 20210123
  962. PREDNISOLONE [Concomitant]
     Active Substance: PREDNISOLONE
     Indication: Diffuse large B-cell lymphoma
     Dosage: ADDITIONAL INFO: ROUTE:
     Route: 048
     Dates: start: 20201118, end: 20201122
  963. PREDNISOLONE [Concomitant]
     Active Substance: PREDNISOLONE
     Dosage: UNK
     Route: 048
     Dates: start: 20201118, end: 20201122
  964. PREDNISOLONE [Concomitant]
     Active Substance: PREDNISOLONE
     Dosage: 100 MG, DATE OF MOST RECENT DOSE PRIOR TO FIRST EPISODE OF NEUTROPENIA 24/NOV/202. DATE OF
     Route: 050
     Dates: start: 20201124
  965. PREDNISOLONE [Concomitant]
     Active Substance: PREDNISOLONE
     Dosage: UNK
     Route: 050
     Dates: start: 20201118, end: 20201122
  966. SENNA [Concomitant]
     Active Substance: SENNA LEAF\SENNOSIDES\SENNOSIDES A AND B
     Indication: Constipation
     Dosage: UNK; ADDITIONAL INFO: ROUTE:
     Route: 065
     Dates: start: 20201124
  967. SENNA [Concomitant]
     Active Substance: SENNA LEAF\SENNOSIDES\SENNOSIDES A AND B
     Dosage: UNK
     Dates: start: 20201124
  968. SENNA [Concomitant]
     Active Substance: SENNA LEAF\SENNOSIDES\SENNOSIDES A AND B
     Dosage: UNK
     Dates: start: 20201124
  969. SENNA [Concomitant]
     Active Substance: SENNA LEAF\SENNOSIDES\SENNOSIDES A AND B
     Dosage: (DOSAGE TEXT: UNK ROUTE OF ADMIN (FREE TEXT): UNKNOWN ROUTE)
     Dates: start: 20201124
  970. SENNA [Concomitant]
     Active Substance: SENNA LEAF\SENNOSIDES\SENNOSIDES A AND B
     Dosage: UNKUNK
     Dates: start: 20201124
  971. SENNA [Concomitant]
     Active Substance: SENNA LEAF\SENNOSIDES\SENNOSIDES A AND B
     Dosage: UNKUNK
     Dates: start: 20201124
  972. SENNA [Concomitant]
     Active Substance: SENNA LEAF\SENNOSIDES\SENNOSIDES A AND B
     Dosage: (DOSAGE TEXT: UNK ROUTE OF ADMIN (FREE TEXT): UNKNOWN ROUTE)
     Dates: start: 20201124
  973. SENNA [Concomitant]
     Active Substance: SENNA LEAF\SENNOSIDES\SENNOSIDES A AND B
     Dosage: UNK
     Dates: start: 20201124
  974. SENNA [Concomitant]
     Active Substance: SENNA LEAF\SENNOSIDES\SENNOSIDES A AND B
     Dosage: (DOSAGE TEXT: UNK ROUTE OF ADMIN (FREE TEXT): UNKNOWN ROUTE)
     Dates: start: 20201124
  975. SENNA [Concomitant]
     Active Substance: SENNA LEAF\SENNOSIDES\SENNOSIDES A AND B
     Dosage: (DOSAGE TEXT: UNK ROUTE OF ADMIN (FREE TEXT): UNKNOWN ROUTE)
     Dates: start: 20201124
  976. SENNA [Concomitant]
     Active Substance: SENNA LEAF\SENNOSIDES\SENNOSIDES A AND B
     Dosage: (DOSAGE TEXT: UNK ROUTE OF ADMIN (FREE TEXT): UNKNOWN ROUTE)
     Dates: start: 20201124
  977. SENNA [Concomitant]
     Active Substance: SENNA LEAF\SENNOSIDES\SENNOSIDES A AND B
     Dosage: (DOSAGE TEXT: UNK ROUTE OF ADMIN (FREE TEXT): UNKNOWN ROUTE)
     Dates: start: 20201124
  978. SENNA [Concomitant]
     Active Substance: SENNA LEAF\SENNOSIDES\SENNOSIDES A AND B
     Dosage: (DOSAGE TEXT: UNK ROUTE OF ADMIN (FREE TEXT): UNKNOWN ROUTE)
     Dates: start: 20201124
  979. SENOKOT [Concomitant]
     Active Substance: SENNOSIDES
     Indication: Constipation
     Dosage: UNK, SENNA PODS POWDERED; ADDITIONAL INFO: ADDITIONAL INFO: ROUTE:
     Route: 065
  980. SENOKOT [Concomitant]
     Active Substance: SENNOSIDES
     Dosage: UNK, SENNA PODS POWDERED; ADDITIONAL INFO: ADDITIONAL INFO: ROUTE:
  981. SENOKOT [Concomitant]
     Active Substance: SENNOSIDES
     Dosage: UNK; ADDITIONAL INFO: ADDITIONAL INFO: ROUTE:
  982. SENOKOT [Concomitant]
     Active Substance: SENNOSIDES
     Dosage: UNK, SENNA PODS POWDERED ROUTE OF ADMIN (FREE TEXT): UNKNOWN ROUTE/ ADDITIONAL INFO: ADDITIONAL INFO
  983. SENOKOT [Concomitant]
     Active Substance: SENNOSIDES
     Dosage: UNK, SENNA PODS POWDERED ROUTE OF ADMIN (FREE TEXT): UNKNOWN ROUTE; ADDITIONAL INFO: ADDITIONAL INFO
  984. SENOKOT [Concomitant]
     Active Substance: SENNOSIDES
     Dosage: UNK; ADDITIONAL INFO: ADDITIONAL INFO: ROUTE:
  985. SENOKOT [Concomitant]
     Active Substance: SENNOSIDES
     Dosage: UNK; ADDITIONAL INFO: ADDITIONAL INFO: ROUTE:
  986. SENOKOT [Concomitant]
     Active Substance: SENNOSIDES
     Dosage: UNK; ADDITIONAL INFO: ADDITIONAL INFO: ROUTE:
     Dates: start: 20201124
  987. SENOKOT [Concomitant]
     Active Substance: SENNOSIDES
     Dosage: UNK (SENNA PODS POWDERED); ADDITIONAL INFO: ADDITIONAL INFO: ROUTE:
     Dates: start: 20201124
  988. SENOKOT [Concomitant]
     Active Substance: SENNOSIDES
     Dosage: UNK, SENNA PODS POWDERED ROUTE OF ADMIN (FREE TEXT): UNKNOWN ROUTE; ADDITIONAL INFO: ADDITIONAL INFO
  989. SENOKOT [Concomitant]
     Active Substance: SENNOSIDES
     Dosage: UNK, SENNA PODS POWDERED ROUTE OF ADMIN (FREE TEXT): UNKNOWN ROUTE; ADDITIONAL INFO: ADDITIONAL INFO
  990. SENOKOT [Concomitant]
     Active Substance: SENNOSIDES
     Dosage: UNK, SENNA PODS POWDERED ROUTE OF ADMIN (FREE TEXT): UNKNOWN ROUTE; ADDITIONAL INFO: ADDITIONAL INFO
  991. SENOKOT [Concomitant]
     Active Substance: SENNOSIDES
     Dosage: UNK, SENNA PODS POWDERED ROUTE OF ADMIN (FREE TEXT): UNKNOWN ROUTE; ADDITIONAL INFO: ADDITIONAL INFO
  992. SENOKOT [Concomitant]
     Active Substance: SENNOSIDES
     Dosage: UNK, SENNA PODS POWDERED; ADDITIONAL INFO: ADDITIONAL INFO: ROUTE
  993. SENOKOT [Concomitant]
     Active Substance: SENNOSIDES
     Dosage: UNK, SENNA PODS POWDERED; ADDITIONAL INFO: ADDITIONAL INFO: ROUTE:
  994. SENOKOT [Concomitant]
     Active Substance: SENNOSIDES
     Dosage: UNK, SENNA PODS POWDERED ROUTE OF ADMIN (FREE TEXT): UNKNOWN ROUTE; ADDITIONAL INFO: ADDITIONAL INFO
  995. SENOKOT [Concomitant]
     Active Substance: SENNOSIDES
     Dosage: UNK, SENNA PODS POWDERED ROUTE OF ADMIN (FREE TEXT): UNKNOWN ROUTE; ADDITIONAL INFO: ADDITIONAL INFO
  996. SENOKOT [Concomitant]
     Active Substance: SENNOSIDES
     Dosage: UNK, SENNA PODS POWDERED; ADDITIONAL INFO: ADDITIONAL INFO: ROUTE:
  997. SENOKOT [Concomitant]
     Active Substance: SENNOSIDES
     Dosage: UNK, SENNA PODS POWDERED; ADDITIONAL INFO: ADDITIONAL INFO: ROUTE:
  998. SENOKOT [Concomitant]
     Active Substance: SENNOSIDES
     Dosage: UNK, SENNA PODS POWDERED ROUTE OF ADMIN (FREE TEXT): UNKNOWN ROUTE; ADDITIONAL INFO: ADDITIONAL INFO
  999. SENOKOT [Concomitant]
     Active Substance: SENNOSIDES
     Dosage: UNK, SENNA PODS POWDERED ROUTE OF ADMIN (FREE TEXT): UNKNOWN ROUTE; ADDITIONAL INFO: ADDITIONAL INFO
  1000. SENOKOT [Concomitant]
     Active Substance: SENNOSIDES
     Dosage: UNK, SENNA PODS POWDERED ROUTE OF ADMIN (FREE TEXT): UNKNOWN ROUTE; ADDITIONAL INFO: ADDITIONAL INFO
  1001. SENOKOT [Concomitant]
     Active Substance: SENNOSIDES
     Dosage: UNK, SENNA PODS POWDERED ROUTE OF ADMIN (FREE TEXT): UNKNOWN ROUTE; ADDITIONAL INFO: ADDITIONAL INFO
  1002. SENOKOT [Concomitant]
     Active Substance: SENNOSIDES
     Dosage: UNK, SENNA PODS POWDERED ROUTE OF ADMIN (FREE TEXT): UNKNOWN ROUTE; ADDITIONAL INFO: ADDITIONAL INFO
  1003. SENOKOT [Concomitant]
     Active Substance: SENNOSIDES
     Dosage: UNK, SENNA PODS POWDERED ROUTE OF ADMIN (FREE TEXT): UNKNOWN ROUTE; ADDITIONAL INFO: ADDITIONAL INFO
  1004. SENOKOT [Concomitant]
     Active Substance: SENNOSIDES
     Dosage: UNK; ADDITIONAL INFO: ADDITIONAL INFO: ROUTE:
  1005. SENOKOT [Concomitant]
     Active Substance: SENNOSIDES
     Dosage: UNK, SENNA PODS POWDERED ROUTE OF ADMIN (FREE TEXT): UNKNOWN ROUTE; ADDITIONAL INFO: ADDITIONAL INFO
  1006. SENOKOT [Concomitant]
     Active Substance: SENNOSIDES
     Dosage: UNK, SENNA PODS POWDERED ROUTE OF ADMIN (FREE TEXT): UNKNOWN ROUTE; ADDITIONAL INFO: ADDITIONAL INFO
  1007. SENOKOT [Concomitant]
     Active Substance: SENNOSIDES
     Dosage: UNK, SENNA PODS POWDERED ROUTE OF ADMIN (FREE TEXT): UNKNOWN ROUTE; ADDITIONAL INFO: ADDITIONAL INFO
     Dates: start: 20201124
  1008. SENOKOT [Concomitant]
     Active Substance: SENNOSIDES
     Dosage: UNK, SENNA PODS POWDERED ROUTE OF ADMIN (FREE TEXT): UNKNOWN ROUTE; ADDITIONAL INFO: ADDITIONAL INFO
     Dates: start: 20201124
  1009. SENOKOT [Concomitant]
     Active Substance: SENNOSIDES
     Dosage: UNK, SENNA PODS POWDERED ROUTE OF ADMIN (FREE TEXT): UNKNOWN ROUTE; ADDITIONAL INFO: ADDITIONAL INFO
     Dates: start: 20201124
  1010. SENOKOT [Concomitant]
     Active Substance: SENNOSIDES
     Dosage: UNK, SENNA PODS POWDERED ROUTE OF ADMIN (FREE TEXT): UNKNOWN ROUTE; ADDITIONAL INFO: ADDITIONAL INFO
     Dates: start: 20201124
  1011. SENOKOT [Concomitant]
     Active Substance: SENNOSIDES
     Dosage: UNK, SENNA PODS POWDERED ROUTE OF ADMIN (FREE TEXT): UNKNOWN ROUTE; ADDITIONAL INFO: ADDITIONAL INFO
     Dates: start: 20201124
  1012. SENOKOT [Concomitant]
     Active Substance: SENNOSIDES
     Dosage: UNK, SENNA PODS POWDERED ROUTE OF ADMIN (FREE TEXT): UNKNOWN ROUTE; ADDITIONAL INFO: ADDITIONAL INFO
     Dates: start: 20201124
  1013. SENOKOT [Concomitant]
     Active Substance: SENNOSIDES
     Dosage: UNK, SENNA PODS POWDERED ROUTE OF ADMIN (FREE TEXT): UNKNOWN ROUTE; ADDITIONAL INFO: ADDITIONAL INFO
     Dates: start: 20201124
  1014. SENOKOT [Concomitant]
     Active Substance: SENNOSIDES
     Dosage: UNK, SENNA PODS POWDERED ROUTE OF ADMIN (FREE TEXT): UNKNOWN ROUTE; ADDITIONAL INFO: ADDITIONAL INFO
     Dates: start: 20201124
  1015. SENOKOT [Concomitant]
     Active Substance: SENNOSIDES
     Dosage: UNK, SENNA PODS POWDERED ROUTE OF ADMIN (FREE TEXT): UNKNOWN ROUTE; ADDITIONAL INFO: ADDITIONAL INFO
     Dates: start: 20201124
  1016. SENOKOT [Concomitant]
     Active Substance: SENNOSIDES
     Dosage: UNK, SENNA PODS POWDERED ROUTE OF ADMIN (FREE TEXT): UNKNOWN ROUTE; ADDITIONAL INFO: ADDITIONAL INFO
     Dates: start: 20201124
  1017. SENOKOT [Concomitant]
     Active Substance: SENNOSIDES
     Dosage: UNK, SENNA PODS POWDERED ROUTE OF ADMIN (FREE TEXT): UNKNOWN ROUTE; ADDITIONAL INFO: ADDITIONAL INFO
     Dates: start: 20201124
  1018. SENOKOT [Concomitant]
     Active Substance: SENNOSIDES
     Dosage: UNK, SENNA PODS POWDERED ROUTE OF ADMIN (FREE TEXT): UNKNOWN ROUTE; ADDITIONAL INFO: ADDITIONAL INFO
     Dates: start: 20201124
  1019. SENOKOT [Concomitant]
     Active Substance: SENNOSIDES
     Dosage: UNK, SENNA PODS POWDERED ROUTE OF ADMIN (FREE TEXT): UNKNOWN ROUTE; ADDITIONAL INFO: ADDITIONAL INFO
     Dates: start: 20201124
  1020. SENOKOT [Concomitant]
     Active Substance: SENNOSIDES
     Dosage: UNK, SENNA PODS POWDERED ROUTE OF ADMIN (FREE TEXT): UNKNOWN ROUTE; ADDITIONAL INFO: ADDITIONAL INFO
     Dates: start: 20201124
  1021. SENOKOT [Concomitant]
     Active Substance: SENNOSIDES
     Dosage: UNK, SENNA PODS POWDERED ROUTE OF ADMIN (FREE TEXT): UNKNOWN ROUTE; ADDITIONAL INFO: ADDITIONAL INFO
     Dates: start: 20201124
  1022. SENOKOT [Concomitant]
     Active Substance: SENNOSIDES
     Dosage: UNK, SENNA PODS POWDERED ROUTE OF ADMIN (FREE TEXT): UNKNOWN ROUTE; ADDITIONAL INFO: ADDITIONAL INFO
     Dates: start: 20201124
  1023. SENOKOT [Concomitant]
     Active Substance: SENNOSIDES
     Dosage: UNK, SENNA PODS POWDERED ROUTE OF ADMIN (FREE TEXT): UNKNOWN ROUTE; ADDITIONAL INFO: ADDITIONAL INFO
     Dates: start: 20201124
  1024. SENOKOT [Concomitant]
     Active Substance: SENNOSIDES
     Dosage: UNK, SENNA PODS POWDERED ROUTE OF ADMIN (FREE TEXT): UNKNOWN ROUTE; ADDITIONAL INFO: ADDITIONAL INFO
     Dates: start: 20201124
  1025. SENOKOT [Concomitant]
     Active Substance: SENNOSIDES
     Dosage: UNK, SENNA PODS POWDERED ROUTE OF ADMIN (FREE TEXT): UNKNOWN ROUTE; ADDITIONAL INFO: ADDITIONAL INFO
     Dates: start: 20201124
  1026. SENOKOT [Concomitant]
     Active Substance: SENNOSIDES
     Dosage: UNK, SENNA PODS POWDERED ROUTE OF ADMIN (FREE TEXT): UNKNOWN ROUTE; ADDITIONAL INFO: ADDITIONAL INFO
     Dates: start: 20201124
  1027. SENOKOT [Concomitant]
     Active Substance: SENNOSIDES
     Dosage: UNK, SENNA PODS POWDERED ROUTE OF ADMIN (FREE TEXT): UNKNOWN ROUTE; ADDITIONAL INFO: ADDITIONAL INFO
     Dates: start: 20201124
  1028. SENOKOT [Concomitant]
     Active Substance: SENNOSIDES
     Dosage: UNK, SENNA PODS POWDERED ROUTE OF ADMIN (FREE TEXT): UNKNOWN ROUTE; ADDITIONAL INFO: ADDITIONAL INFO
     Dates: start: 20201124
  1029. SENOKOT [Concomitant]
     Active Substance: SENNOSIDES
     Indication: Constipation
     Dosage: UNK, SENNA PODS POWDERED ROUTE OF ADMIN (FREE TEXT): UNKNOWN ROUTE; ADDITIONAL INFO: ADDITIONAL INFO
  1030. SENOKOT [Concomitant]
     Active Substance: SENNOSIDES
     Dosage: UNK, SENNA PODS POWDERED ROUTE OF ADMIN (FREE TEXT): UNKNOWN ROUTE; ADDITIONAL INFO: ADDITIONAL INFO
  1031. SENOKOT [Concomitant]
     Active Substance: SENNOSIDES
     Dosage: UNK, SENNA PODS POWDERED ROUTE OF ADMIN (FREE TEXT): UNKNOWN ROUTE; ADDITIONAL INFO: ADDITIONAL INFO
  1032. SENOKOT [Concomitant]
     Active Substance: SENNOSIDES
     Dosage: UNK; ADDITIONAL INFO: ADDITIONAL INFO: ROUTE:
     Dates: start: 20201124
  1033. SENOKOT [Concomitant]
     Active Substance: SENNOSIDES
     Dosage: UNK; ADDITIONAL INFO: ADDITIONAL INFO: ROUTE:
     Dates: start: 20201124
  1034. SENOKOT [Concomitant]
     Active Substance: SENNOSIDES
     Dosage: UNK; ADDITIONAL INFO: ADDITIONAL INFO: ROUTE:
     Dates: start: 20201124
  1035. SENOKOT [Concomitant]
     Active Substance: SENNOSIDES
     Dosage: UNK; ADDITIONAL INFO: ADDITIONAL INFO: ROUTE:
     Dates: start: 20201124
  1036. SENOKOT [Concomitant]
     Active Substance: SENNOSIDES
     Dosage: UNK; ADDITIONAL INFO: ADDITIONAL INFO: ROUTE:
     Dates: start: 20201124
  1037. SENOKOT [Concomitant]
     Active Substance: SENNOSIDES
     Dosage: UNK, SENNA PODS POWDERED ROUTE OF ADMIN (FREE TEXT): UNKNOWN ROUTE; ADDITIONAL INFO: ADDITIONAL INFO
     Dates: start: 20201124
  1038. SENOKOT [Concomitant]
     Active Substance: SENNOSIDES
     Dosage: UNK, SENNA PODS POWDERED ROUTE OF ADMIN (FREE TEXT): UNKNOWN ROUTE; ADDITIONAL INFO: ADDITIONAL INFO
     Dates: start: 20201124
  1039. SENOKOT [Concomitant]
     Active Substance: SENNOSIDES
     Dosage: UNK, SENNA PODS POWDERED ROUTE OF ADMIN (FREE TEXT): UNKNOWN ROUTE; ADDITIONAL INFO: ADDITIONAL INFO
     Dates: start: 20201124
  1040. SENOKOT [Concomitant]
     Active Substance: SENNOSIDES
     Dosage: UNK, SENNA PODS POWDERED ROUTE OF ADMIN (FREE TEXT): UNKNOWN ROUTE; ADDITIONAL INFO: ADDITIONAL INFO
     Dates: start: 20201124
  1041. SENOKOT [Concomitant]
     Active Substance: SENNOSIDES
     Dosage: UNK, SENNA PODS POWDERED ROUTE OF ADMIN (FREE TEXT): UNKNOWN ROUTE; ADDITIONAL INFO: ADDITIONAL INFO
     Dates: start: 20201124
  1042. SENOKOT [Concomitant]
     Active Substance: SENNOSIDES
     Dosage: UNK, SENNA PODS POWDERED ROUTE OF ADMIN (FREE TEXT): UNKNOWN ROUTE; ADDITIONAL INFO: ADDITIONAL INFO
     Dates: start: 20201124
  1043. CODEINE [Concomitant]
     Active Substance: CODEINE
     Indication: Pain
     Dosage: UNK; ADDITIONAL INFO: ROUTE:UNKNOWNADDITIONAL INFO: ROUTE: ROUTE:
     Dates: start: 20201123
  1044. CODEINE [Concomitant]
     Active Substance: CODEINE
     Dosage: 30 MG (DURATION: 1 DAY; AS NECESSARY); ADDITIONAL INFO: ROUTE:UNKNOWNADDITIONAL INFO: ROUTE: ROUTE:
     Dates: start: 20201224, end: 20201224
  1045. CODEINE [Concomitant]
     Active Substance: CODEINE
     Dosage: UNK; ADDITIONAL INFO: ROUTE:UNKNOWNADDITIONAL INFO: ROUTE: ROUTE:
     Dates: start: 20201123
  1046. CODEINE [Concomitant]
     Active Substance: CODEINE
     Dosage: (DOSAGE TEXT: UNK ROUTE OF ADMIN (FREE TEXT): UNKNOWN ROUTE); ADDITIONAL INFO: ROUTE:UNKNOWNADDITION
     Dates: start: 20201123
  1047. CODEINE [Concomitant]
     Active Substance: CODEINE
     Dosage: (DOSAGE TEXT: 30 MG, AS NECESSARY)
     Dates: start: 20201224, end: 20201224
  1048. CODEINE [Concomitant]
     Active Substance: CODEINE
     Dosage: (DOSAGE TEXT: 30 MG, AS NECESSARY ROUTE OF ADMIN (FREE TEXT): UNKNOWN ROUTE); ADDITIONAL INFO: ROUTE
     Dates: start: 20201224, end: 20201224
  1049. CODEINE [Concomitant]
     Active Substance: CODEINE
     Dosage: UNK; ADDITIONAL INFO: ROUTE:UNKNOWNADDITIONAL INFO: ROUTE: ROUTE:
     Dates: start: 20201123
  1050. CODEINE [Concomitant]
     Active Substance: CODEINE
     Dosage: (DOSAGE TEXT: 30 MG, AS NECESSARY ROUTE OF ADMIN (FREE TEXT): UNKNOWN ROUTE); ADDITIONAL INFO: ROUTE
     Dates: start: 20201224, end: 20201224
  1051. CODEINE [Concomitant]
     Active Substance: CODEINE
     Dosage: UNK; ADDITIONAL INFO: ROUTE:UNKNOWNADDITIONAL INFO: ROUTE: ROUTE:
     Dates: start: 20201123
  1052. CODEINE [Concomitant]
     Active Substance: CODEINE
     Dosage: (DOSAGE TEXT: 30 MG, AS NECESSARY ROUTE OF ADMIN (FREE TEXT): UNKNOWN ROUTE); ADDITIONAL INFO: ROUTE
     Dates: start: 20201224, end: 20201224
  1053. CODEINE [Concomitant]
     Active Substance: CODEINE
     Dosage: (DOSAGE TEXT: 30 MG, AS NECESSARY ROUTE OF ADMIN (FREE TEXT): UNKNOWN ROUTE); ADDITIONAL INFO: ROUTE
     Dates: start: 20201224, end: 20201224
  1054. CODEINE [Concomitant]
     Active Substance: CODEINE
     Dosage: (DOSAGE TEXT: 30 MG, AS NECESSARY ROUTE OF ADMIN (FREE TEXT): UNKNOWN ROUTE); ADDITIONAL INFO: ROUTE
     Dates: start: 20201224, end: 20201224
  1055. CODEINE [Concomitant]
     Active Substance: CODEINE
     Dosage: (DOSAGE TEXT: 30 MG, AS NECESSARY ROUTE OF ADMIN (FREE TEXT): UNKNOWN ROUTE); ADDITIONAL INFO: ROUTE
     Dates: start: 20201224, end: 20201224
  1056. CODEINE [Concomitant]
     Active Substance: CODEINE
     Dosage: (DOSAGE TEXT: 30 MG, AS NECESSARY ROUTE OF ADMIN (FREE TEXT): UNKNOWN ROUTE); ADDITIONAL INFO: ROUTE
     Dates: start: 20201224, end: 20201224
  1057. CODEINE [Concomitant]
     Active Substance: CODEINE
     Dosage: (DOSAGE TEXT: 30 MG, AS NECESSARY); ADDITIONAL INFO: ROUTE:UNKNOWNADDITIONAL INFO: ROUTE: ROUTE:
     Dates: start: 20201224, end: 20201224
  1058. CODEINE [Concomitant]
     Active Substance: CODEINE
     Dosage: (DOSAGE TEXT: 30 MG, AS NECESSARY ROUTE OF ADMIN (FREE TEXT): UNKNOWN ROUTE); ADDITIONAL INFO: ROUTE
     Dates: start: 20201224, end: 20201224
  1059. CODEINE [Concomitant]
     Active Substance: CODEINE
     Dosage: (DOSAGE TEXT: 30 MG, AS NECESSARY ROUTE OF ADMIN (FREE TEXT): UNKNOWN ROUTE); ADDITIONAL INFO: ROUTE
     Dates: start: 20201224, end: 20201224
  1060. CODEINE [Concomitant]
     Active Substance: CODEINE
     Dosage: (DOSAGE TEXT: 30 MG, AS NECESSARY ROUTE OF ADMIN (FREE TEXT): UNKNOWN ROUTE); ADDITIONAL INFO: ROUTE
     Dates: start: 20201224, end: 20201224
  1061. CODEINE [Concomitant]
     Active Substance: CODEINE
     Dosage: (DOSAGE TEXT: 30 MG, AS NECESSARY ROUTE OF ADMIN (FREE TEXT): UNKNOWN ROUTE); ADDITIONAL INFO: ROUTE
     Dates: start: 20201224, end: 20201224
  1062. CODEINE [Concomitant]
     Active Substance: CODEINE
     Dosage: (DOSAGE TEXT: 30 MG, AS NECESSARY ROUTE OF ADMIN (FREE TEXT): UNKNOWN ROUTE); ADDITIONAL INFO: ROUTE
     Dates: start: 20201224, end: 20201224
  1063. CODEINE [Concomitant]
     Active Substance: CODEINE
     Dosage: 30 MG, AS NECESSARY ROUTE OF ADMIN (FREE TEXT): UNKNOWN ROUTE; ADDITIONAL INFO: ROUTE:UNKNOWNADDITIO
     Dates: start: 20201224, end: 20201224
  1064. CODEINE [Concomitant]
     Active Substance: CODEINE
     Dosage: 30 MG, AS NECESSARY ROUTE OF ADMIN (FREE TEXT): UNKNOWN ROUTE; ADDITIONAL INFO: ROUTE:UNKNOWNADDITIO
     Dates: start: 20201224, end: 20201224
  1065. CODEINE [Concomitant]
     Active Substance: CODEINE
     Dosage: 30 MG, AS NECESSARY ROUTE OF ADMIN (FREE TEXT): UNKNOWN ROUTE; ADDITIONAL INFO: ROUTE:UNKNOWNADDITIO
     Dates: start: 20201224, end: 20201224
  1066. SARS-COV-2 VACCINE [Concomitant]
     Indication: COVID-19 immunisation
     Dosage: UNK ADDITIONAL INFO: ROUTE:UNKNOWN ROUTE:UNKNOWN
  1067. SARS-COV-2 VACCINE [Concomitant]
     Dosage: (PFIZER) BNT162B2, DURATION: 1 DAY
     Route: 065
     Dates: start: 20210428, end: 20210428
  1068. COVID-19 VACCINE [Concomitant]
     Indication: Product used for unknown indication
     Dosage: UNK
  1069. PREDNISOLONE [Concomitant]
     Active Substance: PREDNISOLONE
     Indication: Product used for unknown indication
     Dosage: UNK
     Dates: start: 20201124
  1070. PREDNISOLONE [Concomitant]
     Active Substance: PREDNISOLONE
     Dosage: UNK
     Route: 048
     Dates: start: 20201118, end: 20201122
  1071. PREDNISOLONE [Concomitant]
     Active Substance: PREDNISOLONE
     Dosage: UNK (ADDITIONAL INFORMATION ON DRUG (FREE TEXT): ADDITIONAL INFO: ROUTE:UNKNOWN ROUTE:UNKNOWN)
     Route: 065
  1072. SENNA LEAF [Concomitant]
     Active Substance: SENNA LEAF
     Indication: Constipation
     Dosage: UNK
     Dates: start: 20201124
  1073. SENNA LEAF [Concomitant]
     Active Substance: SENNA LEAF
     Dosage: UNK ROUTE OF ADMIN (FREE TEXT): UNKNOWN ROUTE
     Dates: start: 20201124
  1074. SENNA LEAF [Concomitant]
     Active Substance: SENNA LEAF
     Dosage: UNK ROUTE OF ADMIN (FREE TEXT): UNKNOWN ROUTE
     Dates: start: 20201124
  1075. SENNA LEAF [Concomitant]
     Active Substance: SENNA LEAF
     Dosage: UNK ROUTE OF ADMIN (FREE TEXT): UNKNOWN ROUTE
     Dates: start: 20201124
  1076. SENNA LEAF [Concomitant]
     Active Substance: SENNA LEAF
     Dosage: UNK ROUTE OF ADMIN (FREE TEXT): UNKNOWN ROUTE
     Dates: start: 20201124
  1077. SENNA LEAF [Concomitant]
     Active Substance: SENNA LEAF
     Dosage: UNK ROUTE OF ADMIN (FREE TEXT): UNKNOWN ROUTE
     Dates: start: 20201124
  1078. SENNA LEAF [Concomitant]
     Active Substance: SENNA LEAF
     Dosage: UNK ROUTE OF ADMIN (FREE TEXT): UNKNOWN ROUTE
     Dates: start: 20201124
  1079. SENNA LEAF [Concomitant]
     Active Substance: SENNA LEAF
     Dosage: UNK ROUTE OF ADMIN (FREE TEXT): UNKNOWN ROUTE
     Dates: start: 20201124
  1080. SENNA LEAF [Concomitant]
     Active Substance: SENNA LEAF
     Dosage: UNK ROUTE OF ADMIN (FREE TEXT): UNKNOWN ROUTE
     Dates: start: 20201124
  1081. BENDAMUSTINE HYDROCHLORIDE [Concomitant]
     Active Substance: BENDAMUSTINE HYDROCHLORIDE
     Indication: Product used for unknown indication
     Dosage: UNK (ADDITIONAL INFO: ROUTE:)
     Route: 065
  1082. CALCIUM SENNOSIDES [Concomitant]
     Active Substance: SENNOSIDES
     Indication: Constipation
     Dosage: UNK; ADDITIONAL INFO: ROUTE:UNKNOWNADDITIONAL INFO: ROUTE:
     Dates: start: 20201124
  1083. CALCIUM SENNOSIDES [Concomitant]
     Active Substance: SENNOSIDES
     Dosage: UNK; ADDITIONAL INFO: ROUTE:UNKNOWNADDITIONAL INFO: ROUTE:
     Dates: start: 20201124
  1084. CALCIUM SENNOSIDES [Concomitant]
     Active Substance: SENNOSIDES
     Dosage: UNK ROUTE OF ADMIN (FREE TEXT): UNKNOWN ROUTE; ADDITIONAL INFO: ROUTE:UNKNOWNADDITIONAL INFO: ROUTE:
     Dates: start: 20201124
  1085. CALCIUM SENNOSIDES [Concomitant]
     Active Substance: SENNOSIDES
     Dosage: UNKUNK; ADDITIONAL INFO: ROUTE:UNKNOWNADDITIONAL INFO: ROUTE:
     Dates: start: 20201124
  1086. CALCIUM SENNOSIDES [Concomitant]
     Active Substance: SENNOSIDES
     Dosage: UNKUNK; ADDITIONAL INFO: ROUTE:UNKNOWNADDITIONAL INFO: ROUTE:
     Dates: start: 20201124
  1087. CALCIUM SENNOSIDES [Concomitant]
     Active Substance: SENNOSIDES
     Dosage: UNK ROUTE OF ADMIN (FREE TEXT): UNKNOWN ROUTE; ADDITIONAL INFO: ROUTE:UNKNOWNADDITIONAL INFO: ROUTE:
     Dates: start: 20201124
  1088. CALCIUM SENNOSIDES [Concomitant]
     Active Substance: SENNOSIDES
     Dosage: UNK; ADDITIONAL INFO: ROUTE:UNKNOWNADDITIONAL INFO: ROUTE:
     Dates: start: 20201124
  1089. CALCIUM SENNOSIDES [Concomitant]
     Active Substance: SENNOSIDES
     Dosage: UNK ROUTE OF ADMIN (FREE TEXT): UNKNOWN ROUTE; ADDITIONAL INFO: ROUTE:UNKNOWNADDITIONAL INFO: ROUTE:
     Dates: start: 20201124
  1090. CALCIUM SENNOSIDES [Concomitant]
     Active Substance: SENNOSIDES
     Dosage: UNK ROUTE OF ADMIN (FREE TEXT): UNKNOWN ROUTE; ADDITIONAL INFO: ROUTE:UNKNOWNADDITIONAL INFO: ROUTE:
     Dates: start: 20201124
  1091. CALCIUM SENNOSIDES [Concomitant]
     Active Substance: SENNOSIDES
     Dosage: UNK ROUTE OF ADMIN (FREE TEXT): UNKNOWN ROUTE; ADDITIONAL INFO: ROUTE:UNKNOWNADDITIONAL INFO: ROUTE:
     Dates: start: 20201124
  1092. CALCIUM SENNOSIDES [Concomitant]
     Active Substance: SENNOSIDES
     Dosage: UNK ROUTE OF ADMIN (FREE TEXT): UNKNOWN ROUTE; ADDITIONAL INFO: ROUTE:UNKNOWNADDITIONAL INFO: ROUTE:
     Dates: start: 20201124
  1093. CALCIUM SENNOSIDES [Concomitant]
     Active Substance: SENNOSIDES
     Dosage: UNK ROUTE OF ADMIN (FREE TEXT): UNKNOWN ROUTE; ADDITIONAL INFO: ROUTE:UNKNOWNADDITIONAL INFO: ROUTE:
     Dates: start: 20201124
  1094. CALCIUM SENNOSIDES [Concomitant]
     Active Substance: SENNOSIDES
     Dosage: UNK ROUTE OF ADMIN (FREE TEXT): UNKNOWN ROUTE; ADDITIONAL INFO: ROUTE:UNKNOWNADDITIONAL INFO: ROUTE:
     Dates: start: 20201124
  1095. DEXAMETHASONE SODIUM PHOSPHATE [Concomitant]
     Active Substance: DEXAMETHASONE SODIUM PHOSPHATE
     Indication: Product used for unknown indication
     Dosage: 20 MILLIGRAM, UNK; ADDITIONAL INFO: ROUTE:UNKNOWN ROUTE:UNKNOWN ROUTE:UNKNOWN ROUTE:UNKNOWN
     Route: 042
     Dates: start: 20210209, end: 20210209
  1096. DEXAMETHASONE SODIUM PHOSPHATE [Concomitant]
     Active Substance: DEXAMETHASONE SODIUM PHOSPHATE
     Dosage: 20 MG; ADDITIONAL INFO: ROUTE:UNKNOWN ROUTE:UNKNOWN ROUTE:UNKNOWN ROUTE:UNKNOWN
     Route: 042
     Dates: start: 20210302, end: 20210302
  1097. DEXAMETHASONE SODIUM PHOSPHATE [Concomitant]
     Active Substance: DEXAMETHASONE SODIUM PHOSPHATE
     Dosage: 20 MILLIGRAM, UNK; ADDITIONAL INFO: ROUTE:UNKNOWN ROUTE:UNKNOWN ROUTE:UNKNOWN ROUTE:UNKNOWN
     Route: 042
     Dates: start: 20210119, end: 20210119
  1098. DEXAMETHASONE SODIUM PHOSPHATE [Concomitant]
     Active Substance: DEXAMETHASONE SODIUM PHOSPHATE
     Dosage: 20 MILLIGRAM, UNK; ADDITIONAL INFO: ROUTE:UNKNOWN ROUTE:UNKNOWN ROUTE:UNKNOWN ROUTE:UNKNOWN
     Route: 042
     Dates: start: 20210323, end: 20210323
  1099. DEXAMETHASONE SODIUM PHOSPHATE [Concomitant]
     Active Substance: DEXAMETHASONE SODIUM PHOSPHATE
     Dosage: 20 MG; ADDITIONAL INFO: ROUTE:UNKNOWN ROUTE:UNKNOWN ROUTE:UNKNOWN ROUTE:UNKNOWN
     Dates: start: 20210323, end: 20210323
  1100. DEXAMETHASONE SODIUM PHOSPHATE [Concomitant]
     Active Substance: DEXAMETHASONE SODIUM PHOSPHATE
     Dosage: 20 MGUNK; ADDITIONAL INFO: ROUTE:UNKNOWN ROUTE:UNKNOWN ROUTE:UNKNOWN ROUTE:UNKNOWN
     Dates: start: 20210323, end: 20210323
  1101. DEXAMETHASONE SODIUM PHOSPHATE [Concomitant]
     Active Substance: DEXAMETHASONE SODIUM PHOSPHATE
     Dosage: 20 MG ROUTE OF ADMIN (FREE TEXT): UNKNOWN ROUTE; ADDITIONAL INFO: ROUTE:UNKNOWN ROUTE:UNKNOWN ROUTE:
     Dates: start: 20210119, end: 20210119
  1102. DEXAMETHASONE SODIUM PHOSPHATE [Concomitant]
     Active Substance: DEXAMETHASONE SODIUM PHOSPHATE
     Dosage: 20 MG; ADDITIONAL INFO: ROUTE:UNKNOWN ROUTE:UNKNOWN ROUTE:UNKNOWN ROUTE:UNKNOWN
     Dates: start: 20210209, end: 20210209
  1103. DEXAMETHASONE SODIUM PHOSPHATE [Concomitant]
     Active Substance: DEXAMETHASONE SODIUM PHOSPHATE
     Dosage: 20 MG; ADDITIONAL INFO: ROUTE:UNKNOWN ROUTE:UNKNOWN ROUTE:UNKNOWN ROUTE:UNKNOWN
     Dates: start: 20210302, end: 20210302
  1104. DEXAMETHASONE SODIUM PHOSPHATE [Concomitant]
     Active Substance: DEXAMETHASONE SODIUM PHOSPHATE
     Dosage: 20 MG ROUTE OF ADMIN (FREE TEXT): UNKNOWN ROUTE; ADDITIONAL INFO: ROUTE:UNKNOWN ROUTE:UNKNOWN ROUTE:
     Dates: start: 20210323, end: 20210323
  1105. DEXAMETHASONE SODIUM PHOSPHATE [Concomitant]
     Active Substance: DEXAMETHASONE SODIUM PHOSPHATE
     Dosage: 20 MG; ADDITIONAL INFO: ROUTE:UNKNOWN ROUTE:UNKNOWN ROUTE:UNKNOWN ROUTE:UNKNOWN
     Dates: start: 20210119, end: 20210119
  1106. DEXAMETHASONE SODIUM PHOSPHATE [Concomitant]
     Active Substance: DEXAMETHASONE SODIUM PHOSPHATE
     Dosage: 20 MG ROUTE OF ADMIN (FREE TEXT): UNKNOWN ROUTE; ADDITIONAL INFO: ROUTE:UNKNOWN ROUTE:UNKNOWN ROUTE:
     Dates: start: 20210119, end: 20210119
  1107. DEXAMETHASONE SODIUM PHOSPHATE [Concomitant]
     Active Substance: DEXAMETHASONE SODIUM PHOSPHATE
     Dosage: 20 MG; ADDITIONAL INFO: ROUTE:UNKNOWN ROUTE:UNKNOWN ROUTE:UNKNOWN ROUTE:UNKNOWN
     Dates: start: 20210209, end: 20210209
  1108. DEXAMETHASONE SODIUM PHOSPHATE [Concomitant]
     Active Substance: DEXAMETHASONE SODIUM PHOSPHATE
     Dosage: 20 MG ROUTE OF ADMIN (FREE TEXT): UNKNOWN ROUTE; ADDITIONAL INFO: ROUTE:UNKNOWN ROUTE:UNKNOWN ROUTE:
     Dates: start: 20210209, end: 20210209
  1109. DEXAMETHASONE SODIUM PHOSPHATE [Concomitant]
     Active Substance: DEXAMETHASONE SODIUM PHOSPHATE
     Dosage: 20 MG; ADDITIONAL INFO: ROUTE:UNKNOWN ROUTE:UNKNOWN ROUTE:UNKNOWN ROUTE:UNKNOWN
     Dates: start: 20210302, end: 20210302
  1110. DEXAMETHASONE SODIUM PHOSPHATE [Concomitant]
     Active Substance: DEXAMETHASONE SODIUM PHOSPHATE
     Dosage: 20 MG ROUTE OF ADMIN (FREE TEXT): UNKNOWN ROUTE; ADDITIONAL INFO: ROUTE:UNKNOWN ROUTE:UNKNOWN ROUTE:
     Dates: start: 20210302, end: 20210302
  1111. DEXAMETHASONE SODIUM PHOSPHATE [Concomitant]
     Active Substance: DEXAMETHASONE SODIUM PHOSPHATE
     Dosage: 20 MG; ADDITIONAL INFO: ROUTE:UNKNOWN ROUTE:UNKNOWN ROUTE:UNKNOWN ROUTE:UNKNOWN
     Dates: start: 20210323, end: 20210323
  1112. DEXAMETHASONE SODIUM PHOSPHATE [Concomitant]
     Active Substance: DEXAMETHASONE SODIUM PHOSPHATE
     Dosage: 20 MG ROUTE OF ADMIN (FREE TEXT): UNKNOWN ROUTE; ADDITIONAL INFO: ROUTE:UNKNOWN ROUTE:UNKNOWN ROUTE:
     Dates: start: 20210323, end: 20210323
  1113. DEXAMETHASONE SODIUM PHOSPHATE [Concomitant]
     Active Substance: DEXAMETHASONE SODIUM PHOSPHATE
     Dosage: 20 MG ROUTE OF ADMIN (FREE TEXT): UNKNOWN ROUTE; ADDITIONAL INFO: ROUTE:UNKNOWN ROUTE:UNKNOWN ROUTE:
     Dates: start: 20210323, end: 20210323
  1114. DEXAMETHASONE SODIUM PHOSPHATE [Concomitant]
     Active Substance: DEXAMETHASONE SODIUM PHOSPHATE
     Dosage: 20 MG ROUTE OF ADMIN (FREE TEXT): UNKNOWN ROUTE; ADDITIONAL INFO: ROUTE:UNKNOWN ROUTE:UNKNOWN ROUTE:
     Dates: start: 20210209, end: 20210209
  1115. DEXAMETHASONE SODIUM PHOSPHATE [Concomitant]
     Active Substance: DEXAMETHASONE SODIUM PHOSPHATE
     Dosage: 20 MG ROUTE OF ADMIN (FREE TEXT): UNKNOWN ROUTE; ADDITIONAL INFO: ROUTE:UNKNOWN ROUTE:UNKNOWN ROUTE:
     Dates: start: 20210119, end: 20210119
  1116. DEXAMETHASONE SODIUM PHOSPHATE [Concomitant]
     Active Substance: DEXAMETHASONE SODIUM PHOSPHATE
     Dosage: 20 MG ROUTE OF ADMIN (FREE TEXT): UNKNOWN ROUTE; ADDITIONAL INFO: ROUTE:UNKNOWN ROUTE:UNKNOWN ROUTE:
     Dates: start: 20210302, end: 20210302
  1117. DEXAMETHASONE SODIUM PHOSPHATE [Concomitant]
     Active Substance: DEXAMETHASONE SODIUM PHOSPHATE
     Dosage: 20 MG ROUTE OF ADMIN (FREE TEXT): UNKNOWN ROUTE; ADDITIONAL INFO: ROUTE:UNKNOWN ROUTE:UNKNOWN ROUTE:
     Dates: start: 20210119, end: 20210119
  1118. DEXAMETHASONE SODIUM PHOSPHATE [Concomitant]
     Active Substance: DEXAMETHASONE SODIUM PHOSPHATE
     Dosage: 20 MG ROUTE OF ADMIN (FREE TEXT): UNKNOWN ROUTE; ADDITIONAL INFO: ROUTE:UNKNOWN ROUTE:UNKNOWN ROUTE:
     Dates: start: 20210119, end: 20210119
  1119. DEXAMETHASONE SODIUM PHOSPHATE [Concomitant]
     Active Substance: DEXAMETHASONE SODIUM PHOSPHATE
     Dosage: 20 MG ROUTE OF ADMIN (FREE TEXT): UNKNOWN ROUTE; ADDITIONAL INFO: ROUTE:UNKNOWN ROUTE:UNKNOWN ROUTE:
     Dates: start: 20210323, end: 20210323
  1120. DEXAMETHASONE SODIUM PHOSPHATE [Concomitant]
     Active Substance: DEXAMETHASONE SODIUM PHOSPHATE
     Dosage: 20 MG ROUTE OF ADMIN (FREE TEXT): UNKNOWN ROUTE; ADDITIONAL INFO: ROUTE:UNKNOWN ROUTE:UNKNOWN ROUTE:
     Dates: start: 20210323, end: 20210323
  1121. DEXAMETHASONE SODIUM PHOSPHATE [Concomitant]
     Active Substance: DEXAMETHASONE SODIUM PHOSPHATE
     Dosage: 20 MG ROUTE OF ADMIN (FREE TEXT): UNKNOWN ROUTE; ADDITIONAL INFO: ROUTE:UNKNOWN ROUTE:UNKNOWN ROUTE:
     Dates: start: 20210209, end: 20210209
  1122. DEXAMETHASONE SODIUM PHOSPHATE [Concomitant]
     Active Substance: DEXAMETHASONE SODIUM PHOSPHATE
     Dosage: 20 MG ROUTE OF ADMIN (FREE TEXT): UNKNOWN ROUTE; ADDITIONAL INFO: ROUTE:UNKNOWN ROUTE:UNKNOWN ROUTE:
     Dates: start: 20210209, end: 20210209
  1123. DEXAMETHASONE SODIUM PHOSPHATE [Concomitant]
     Active Substance: DEXAMETHASONE SODIUM PHOSPHATE
     Dosage: 20 MG ROUTE OF ADMIN (FREE TEXT): UNKNOWN ROUTE; ADDITIONAL INFO: ROUTE:UNKNOWN ROUTE:UNKNOWN ROUTE:
     Dates: start: 20210302, end: 20210302
  1124. DEXAMETHASONE SODIUM PHOSPHATE [Concomitant]
     Active Substance: DEXAMETHASONE SODIUM PHOSPHATE
     Dosage: 20 MG ROUTE OF ADMIN (FREE TEXT): UNKNOWN ROUTE; ADDITIONAL INFO: ROUTE:UNKNOWN ROUTE:UNKNOWN ROUTE:
     Dates: start: 20210302, end: 20210302
  1125. DEXAMETHASONE SODIUM PHOSPHATE [Concomitant]
     Active Substance: DEXAMETHASONE SODIUM PHOSPHATE
     Dosage: 20 MG ROUTE OF ADMIN (FREE TEXT): UNKNOWN ROUTE; ADDITIONAL INFO: ROUTE:UNKNOWN ROUTE:UNKNOWN ROUTE:
     Dates: start: 20210119, end: 20210119
  1126. DEXAMETHASONE SODIUM PHOSPHATE [Concomitant]
     Active Substance: DEXAMETHASONE SODIUM PHOSPHATE
     Dosage: 20 MG ROUTE OF ADMIN (FREE TEXT): UNKNOWN ROUTE; ADDITIONAL INFO: ROUTE:UNKNOWN ROUTE:UNKNOWN ROUTE:
     Dates: start: 20210119, end: 20210119
  1127. DEXAMETHASONE SODIUM PHOSPHATE [Concomitant]
     Active Substance: DEXAMETHASONE SODIUM PHOSPHATE
     Dosage: 20 MG ROUTE OF ADMIN (FREE TEXT): UNKNOWN ROUTE; ADDITIONAL INFO: ROUTE:UNKNOWN ROUTE:UNKNOWN ROUTE:
     Dates: start: 20210323, end: 20210323
  1128. DEXAMETHASONE SODIUM PHOSPHATE [Concomitant]
     Active Substance: DEXAMETHASONE SODIUM PHOSPHATE
     Dosage: 20 MG ROUTE OF ADMIN (FREE TEXT): UNKNOWN ROUTE; ADDITIONAL INFO: ROUTE:UNKNOWN ROUTE:UNKNOWN ROUTE:
     Dates: start: 20210323, end: 20210323
  1129. DEXAMETHASONE SODIUM PHOSPHATE [Concomitant]
     Active Substance: DEXAMETHASONE SODIUM PHOSPHATE
     Dosage: 20 MG ROUTE OF ADMIN (FREE TEXT): UNKNOWN ROUTE; ADDITIONAL INFO: ROUTE:UNKNOWN ROUTE:UNKNOWN ROUTE:
     Dates: start: 20210302, end: 20210302
  1130. DEXAMETHASONE SODIUM PHOSPHATE [Concomitant]
     Active Substance: DEXAMETHASONE SODIUM PHOSPHATE
     Dosage: 20 MG ROUTE OF ADMIN (FREE TEXT): UNKNOWN ROUTE; ADDITIONAL INFO: ROUTE:UNKNOWN ROUTE:UNKNOWN ROUTE:
     Dates: start: 20210302, end: 20210302
  1131. DEXAMETHASONE SODIUM PHOSPHATE [Concomitant]
     Active Substance: DEXAMETHASONE SODIUM PHOSPHATE
     Dosage: 20 MG ROUTE OF ADMIN (FREE TEXT): UNKNOWN ROUTE; ADDITIONAL INFO: ROUTE:UNKNOWN ROUTE:UNKNOWN ROUTE:
     Dates: start: 20210209, end: 20210209
  1132. DEXAMETHASONE SODIUM PHOSPHATE [Concomitant]
     Active Substance: DEXAMETHASONE SODIUM PHOSPHATE
     Dosage: 20 MG ROUTE OF ADMIN (FREE TEXT): UNKNOWN ROUTE; ADDITIONAL INFO: ROUTE:UNKNOWN ROUTE:UNKNOWN ROUTE:
     Dates: start: 20210209, end: 20210209
  1133. DEXAMETHASONE SODIUM PHOSPHATE [Concomitant]
     Active Substance: DEXAMETHASONE SODIUM PHOSPHATE
     Dosage: 20 MG; ADDITIONAL INFO: ROUTE:UNKNOWN ROUTE:UNKNOWN ROUTE:UNKNOWN ROUTE:UNKNOWN
     Dates: start: 20210119, end: 20210119
  1134. DEXAMETHASONE SODIUM PHOSPHATE [Concomitant]
     Active Substance: DEXAMETHASONE SODIUM PHOSPHATE
     Dosage: 20 MG; ADDITIONAL INFO: ROUTE:UNKNOWN ROUTE:UNKNOWN ROUTE:UNKNOWN ROUTE:UNKNOWN
     Dates: start: 20210119, end: 20210119
  1135. DEXAMETHASONE SODIUM PHOSPHATE [Concomitant]
     Active Substance: DEXAMETHASONE SODIUM PHOSPHATE
     Dosage: 20 MG ROUTE OF ADMIN (FREE TEXT): UNKNOWN ROUTE; ADDITIONAL INFO: ROUTE:UNKNOWN ROUTE:UNKNOWN ROUTE:
     Dates: start: 20210209, end: 20210209
  1136. DEXAMETHASONE SODIUM PHOSPHATE [Concomitant]
     Active Substance: DEXAMETHASONE SODIUM PHOSPHATE
     Dosage: 20 MG ROUTE OF ADMIN (FREE TEXT): UNKNOWN ROUTE; ADDITIONAL INFO: ROUTE:UNKNOWN ROUTE:UNKNOWN ROUTE:
     Dates: start: 20210209, end: 20210209
  1137. DEXAMETHASONE SODIUM PHOSPHATE [Concomitant]
     Active Substance: DEXAMETHASONE SODIUM PHOSPHATE
     Dosage: 20 MG ROUTE OF ADMIN (FREE TEXT): UNKNOWN ROUTE; ADDITIONAL INFO: ROUTE:UNKNOWN ROUTE:UNKNOWN ROUTE:
     Dates: start: 20210323, end: 20210323
  1138. DEXAMETHASONE SODIUM PHOSPHATE [Concomitant]
     Active Substance: DEXAMETHASONE SODIUM PHOSPHATE
     Dosage: 20 MG ROUTE OF ADMIN (FREE TEXT): UNKNOWN ROUTE; ADDITIONAL INFO: ROUTE:UNKNOWN ROUTE:UNKNOWN ROUTE:
     Dates: start: 20210323, end: 20210323
  1139. DEXAMETHASONE SODIUM PHOSPHATE [Concomitant]
     Active Substance: DEXAMETHASONE SODIUM PHOSPHATE
     Dosage: 20 MG ROUTE OF ADMIN (FREE TEXT): UNKNOWN ROUTE; ADDITIONAL INFO: ROUTE:UNKNOWN ROUTE:UNKNOWN ROUTE:
     Dates: start: 20210302, end: 20210302
  1140. DEXAMETHASONE SODIUM PHOSPHATE [Concomitant]
     Active Substance: DEXAMETHASONE SODIUM PHOSPHATE
     Dosage: 20 MG ROUTE OF ADMIN (FREE TEXT): UNKNOWN ROUTE; ADDITIONAL INFO: ROUTE:UNKNOWN ROUTE:UNKNOWN ROUTE:
     Dates: start: 20210302, end: 20210302
  1141. DEXAMETHASONE SODIUM PHOSPHATE [Concomitant]
     Active Substance: DEXAMETHASONE SODIUM PHOSPHATE
     Dosage: 20 MG ROUTE OF ADMIN (FREE TEXT): UNKNOWN ROUTE; ADDITIONAL INFO: ROUTE:UNKNOWN ROUTE:UNKNOWN ROUTE:
     Dates: start: 20210119, end: 20210119
  1142. DEXAMETHASONE SODIUM PHOSPHATE [Concomitant]
     Active Substance: DEXAMETHASONE SODIUM PHOSPHATE
     Dosage: 20 MG ROUTE OF ADMIN (FREE TEXT): UNKNOWN ROUTE; ADDITIONAL INFO: ROUTE:UNKNOWN ROUTE:UNKNOWN ROUTE:
     Dates: start: 20210209, end: 20210209
  1143. DEXAMETHASONE SODIUM PHOSPHATE [Concomitant]
     Active Substance: DEXAMETHASONE SODIUM PHOSPHATE
     Dosage: 20 MG ROUTE OF ADMIN (FREE TEXT): UNKNOWN ROUTE; ADDITIONAL INFO: ROUTE:UNKNOWN ROUTE:UNKNOWN ROUTE:
     Dates: start: 20210209, end: 20210209
  1144. DEXAMETHASONE SODIUM PHOSPHATE [Concomitant]
     Active Substance: DEXAMETHASONE SODIUM PHOSPHATE
     Dosage: 20 MG ROUTE OF ADMIN (FREE TEXT): UNKNOWN ROUTE; ADDITIONAL INFO: ROUTE:UNKNOWN ROUTE:UNKNOWN ROUTE:
     Dates: start: 20210209, end: 20210209
  1145. DEXAMETHASONE SODIUM PHOSPHATE [Concomitant]
     Active Substance: DEXAMETHASONE SODIUM PHOSPHATE
     Indication: Product used for unknown indication
     Dosage: DURATION: 1 DAY; ADDITIONAL INFO: ROUTE:UNKNOWN ROUTE:UNKNOWN ROUTE:UNKNOWN ROUTE:UNKNOWN
     Dates: start: 20210119, end: 20210119
  1146. DEXAMETHASONE SODIUM PHOSPHATE [Concomitant]
     Active Substance: DEXAMETHASONE SODIUM PHOSPHATE
     Dosage: 20 MG ROUTE OF ADMIN (FREE TEXT): UNKNOWN ROUTE; ADDITIONAL INFO: ROUTE:UNKNOWN ROUTE:UNKNOWN ROUTE:
     Dates: start: 20210119, end: 20210119
  1147. DEXAMETHASONE SODIUM PHOSPHATE [Concomitant]
     Active Substance: DEXAMETHASONE SODIUM PHOSPHATE
     Dosage: 20 MG ROUTE OF ADMIN (FREE TEXT): UNKNOWN ROUTE; ADDITIONAL INFO: ROUTE:UNKNOWN ROUTE:UNKNOWN ROUTE:
     Dates: start: 20210119, end: 20210119
  1148. DEXAMETHASONE SODIUM PHOSPHATE [Concomitant]
     Active Substance: DEXAMETHASONE SODIUM PHOSPHATE
     Dosage: 20 MG; ADDITIONAL INFO: ROUTE:UNKNOWN ROUTE:UNKNOWN ROUTE:UNKNOWN ROUTE:UNKNOWN
     Dates: start: 20210209, end: 20210209
  1149. DEXAMETHASONE SODIUM PHOSPHATE [Concomitant]
     Active Substance: DEXAMETHASONE SODIUM PHOSPHATE
     Dosage: 20 MG; ADDITIONAL INFO: ROUTE:UNKNOWN ROUTE:UNKNOWN ROUTE:UNKNOWN ROUTE:UNKNOWN
     Dates: start: 20210209, end: 20210209
  1150. DEXAMETHASONE SODIUM PHOSPHATE [Concomitant]
     Active Substance: DEXAMETHASONE SODIUM PHOSPHATE
     Dosage: DURATION: 1 DAY; ADDITIONAL INFO: ROUTE:UNKNOWN ROUTE:UNKNOWN ROUTE:UNKNOWN ROUTE:UNKNOWN
     Dates: start: 20210119, end: 20210119
  1151. DEXAMETHASONE SODIUM PHOSPHATE [Concomitant]
     Active Substance: DEXAMETHASONE SODIUM PHOSPHATE
     Dosage: 20 MG; ADDITIONAL INFO: ROUTE:UNKNOWN ROUTE:UNKNOWN ROUTE:UNKNOWN ROUTE:UNKNOWN
     Dates: start: 20210323, end: 20210323
  1152. DEXAMETHASONE SODIUM PHOSPHATE [Concomitant]
     Active Substance: DEXAMETHASONE SODIUM PHOSPHATE
     Dosage: 20 MG; ADDITIONAL INFO: ROUTE:UNKNOWN ROUTE:UNKNOWN ROUTE:UNKNOWN ROUTE:UNKNOWN
     Dates: start: 20210323, end: 20210323
  1153. DEXAMETHASONE SODIUM PHOSPHATE [Concomitant]
     Active Substance: DEXAMETHASONE SODIUM PHOSPHATE
     Dosage: 20 MG; ADDITIONAL INFO: ROUTE:UNKNOWN ROUTE:UNKNOWN ROUTE:UNKNOWN ROUTE:UNKNOWN
     Dates: start: 20210323, end: 20210323
  1154. DEXAMETHASONE SODIUM PHOSPHATE [Concomitant]
     Active Substance: DEXAMETHASONE SODIUM PHOSPHATE
     Dosage: 20 MG ROUTE OF ADMIN (FREE TEXT): UNKNOWN ROUTE; ADDITIONAL INFO: ROUTE:UNKNOWN ROUTE:UNKNOWN ROUTE:
     Dates: start: 20210119, end: 20210119
  1155. DEXAMETHASONE SODIUM PHOSPHATE [Concomitant]
     Active Substance: DEXAMETHASONE SODIUM PHOSPHATE
     Dosage: 20 MG ROUTE OF ADMIN (FREE TEXT): UNKNOWN ROUTE; ADDITIONAL INFO: ROUTE:UNKNOWN ROUTE:UNKNOWN ROUTE:
     Dates: start: 20210119, end: 20210119
  1156. DEXAMETHASONE SODIUM PHOSPHATE [Concomitant]
     Active Substance: DEXAMETHASONE SODIUM PHOSPHATE
     Dosage: 20 MG; ADDITIONAL INFO: ROUTE:UNKNOWN ROUTE:UNKNOWN ROUTE:UNKNOWN ROUTE:UNKNOWN
     Dates: start: 20210323, end: 20210323
  1157. DEXAMETHASONE SODIUM PHOSPHATE [Concomitant]
     Active Substance: DEXAMETHASONE SODIUM PHOSPHATE
     Dosage: 20 MG ROUTE OF ADMIN (FREE TEXT): UNKNOWN ROUTE; ADDITIONAL INFO: ROUTE:UNKNOWN ROUTE:UNKNOWN ROUTE:
     Dates: start: 20210302, end: 20210302
  1158. DEXAMETHASONE SODIUM PHOSPHATE [Concomitant]
     Active Substance: DEXAMETHASONE SODIUM PHOSPHATE
     Dosage: 20 MG ROUTE OF ADMIN (FREE TEXT): UNKNOWN ROUTE; ADDITIONAL INFO: ROUTE:UNKNOWN ROUTE:UNKNOWN ROUTE:
     Dates: start: 20210302, end: 20210302
  1159. DEXAMETHASONE SODIUM PHOSPHATE [Concomitant]
     Active Substance: DEXAMETHASONE SODIUM PHOSPHATE
     Dosage: DURATION: 1 DAY; ADDITIONAL INFO: ROUTE:UNKNOWN ROUTE:UNKNOWN ROUTE:UNKNOWN ROUTE:UNKNOWN
     Dates: start: 20210302, end: 20210302
  1160. DEXAMETHASONE SODIUM PHOSPHATE [Concomitant]
     Active Substance: DEXAMETHASONE SODIUM PHOSPHATE
     Dosage: DURATION: 1 DAY; ADDITIONAL INFO: ROUTE:UNKNOWN ROUTE:UNKNOWN ROUTE:UNKNOWN ROUTE:UNKNOWN
     Dates: start: 20210302, end: 20210302
  1161. DEXAMETHASONE SODIUM PHOSPHATE [Concomitant]
     Active Substance: DEXAMETHASONE SODIUM PHOSPHATE
     Dosage: 20 MG ROUTE OF ADMIN (FREE TEXT): UNKNOWN ROUTE; ADDITIONAL INFO: ROUTE:UNKNOWN ROUTE:UNKNOWN ROUTE:
     Dates: start: 20210302, end: 20210302
  1162. DEXAMETHASONE SODIUM PHOSPHATE [Concomitant]
     Active Substance: DEXAMETHASONE SODIUM PHOSPHATE
     Dosage: 20 MG ROUTE OF ADMIN (FREE TEXT): UNKNOWN ROUTE; ADDITIONAL INFO: ROUTE:UNKNOWN ROUTE:UNKNOWN ROUTE:
     Dates: start: 20210302, end: 20210302
  1163. DEXAMETHASONE SODIUM PHOSPHATE [Concomitant]
     Active Substance: DEXAMETHASONE SODIUM PHOSPHATE
     Dosage: 20 MG ROUTE OF ADMIN (FREE TEXT): UNKNOWN ROUTE; ADDITIONAL INFO: ROUTE:UNKNOWN ROUTE:UNKNOWN ROUTE:
     Dates: start: 20210209, end: 20210209
  1164. DEXAMETHASONE SODIUM PHOSPHATE [Concomitant]
     Active Substance: DEXAMETHASONE SODIUM PHOSPHATE
     Dosage: 20 MG ROUTE OF ADMIN (FREE TEXT): UNKNOWN ROUTE; ADDITIONAL INFO: ROUTE:UNKNOWN ROUTE:UNKNOWN ROUTE:
     Dates: start: 20210209, end: 20210209
  1165. DEXAMETHASONE SODIUM PHOSPHATE [Concomitant]
     Active Substance: DEXAMETHASONE SODIUM PHOSPHATE
     Dosage: 20 MGUNK; ADDITIONAL INFO: ROUTE:UNKNOWN ROUTE:UNKNOWN ROUTE:UNKNOWN ROUTE:UNKNOWN
     Dates: start: 20210323, end: 20210323
  1166. DEXAMETHASONE SODIUM PHOSPHATE [Concomitant]
     Active Substance: DEXAMETHASONE SODIUM PHOSPHATE
     Dosage: 20 MGUNK; ADDITIONAL INFO: ROUTE:UNKNOWN ROUTE:UNKNOWN ROUTE:UNKNOWN ROUTE:UNKNOWN
     Dates: start: 20210323, end: 20210323
  1167. DEXAMETHASONE SODIUM PHOSPHATE [Concomitant]
     Active Substance: DEXAMETHASONE SODIUM PHOSPHATE
     Dosage: 20 MG ROUTE OF ADMIN (FREE TEXT): UNKNOWN ROUTE; ADDITIONAL INFO: ROUTE:UNKNOWN ROUTE:UNKNOWN ROUTE:
     Dates: start: 20210302, end: 20210302
  1168. DEXAMETHASONE SODIUM PHOSPHATE [Concomitant]
     Active Substance: DEXAMETHASONE SODIUM PHOSPHATE
     Dosage: 20 MG ROUTE OF ADMIN (FREE TEXT): UNKNOWN ROUTE; ADDITIONAL INFO: ROUTE:UNKNOWN ROUTE:UNKNOWN ROUTE:
     Dates: start: 20210302, end: 20210302
  1169. DEXAMETHASONE SODIUM PHOSPHATE [Concomitant]
     Active Substance: DEXAMETHASONE SODIUM PHOSPHATE
     Dosage: 20 MG ROUTE OF ADMIN (FREE TEXT): UNKNOWN ROUTE; ADDITIONAL INFO: ROUTE:UNKNOWN ROUTE:UNKNOWN ROUTE:
     Dates: start: 20210323, end: 20210323
  1170. DEXAMETHASONE SODIUM PHOSPHATE [Concomitant]
     Active Substance: DEXAMETHASONE SODIUM PHOSPHATE
     Dosage: 20 MG ROUTE OF ADMIN (FREE TEXT): UNKNOWN ROUTE; ADDITIONAL INFO: ROUTE:UNKNOWN ROUTE:UNKNOWN ROUTE:
     Dates: start: 20210323, end: 20210323
  1171. DEXAMETHASONE SODIUM PHOSPHATE [Concomitant]
     Active Substance: DEXAMETHASONE SODIUM PHOSPHATE
     Dosage: DURATION: 1 DAY; ADDITIONAL INFO: ROUTE:UNKNOWN ROUTE:UNKNOWN ROUTE:UNKNOWN ROUTE:UNKNOWN
     Dates: start: 20210323, end: 20210323
  1172. DEXAMETHASONE SODIUM PHOSPHATE [Concomitant]
     Active Substance: DEXAMETHASONE SODIUM PHOSPHATE
     Dosage: DURATION: 1 DAY; ADDITIONAL INFO: ROUTE:UNKNOWN ROUTE:UNKNOWN ROUTE:UNKNOWN ROUTE:UNKNOWN
     Dates: start: 20210323, end: 20210323
  1173. DEXAMETHASONE SODIUM PHOSPHATE [Concomitant]
     Active Substance: DEXAMETHASONE SODIUM PHOSPHATE
     Dosage: 20 MG ROUTE OF ADMIN (FREE TEXT): UNKNOWN ROUTE; ADDITIONAL INFO: ROUTE:UNKNOWN ROUTE:UNKNOWN ROUTE:
     Dates: start: 20210209, end: 20210209
  1174. DEXAMETHASONE SODIUM PHOSPHATE [Concomitant]
     Active Substance: DEXAMETHASONE SODIUM PHOSPHATE
     Dosage: 20 MG ROUTE OF ADMIN (FREE TEXT): UNKNOWN ROUTE; ADDITIONAL INFO: ROUTE:UNKNOWN ROUTE:UNKNOWN ROUTE:
     Dates: start: 20210209, end: 20210209
  1175. DEXAMETHASONE SODIUM PHOSPHATE [Concomitant]
     Active Substance: DEXAMETHASONE SODIUM PHOSPHATE
     Dosage: 20 MG ROUTE OF ADMIN (FREE TEXT): UNKNOWN ROUTE; ADDITIONAL INFO: ROUTE:UNKNOWN ROUTE:UNKNOWN ROUTE:
     Dates: start: 20210119, end: 20210119
  1176. DEXAMETHASONE SODIUM PHOSPHATE [Concomitant]
     Active Substance: DEXAMETHASONE SODIUM PHOSPHATE
     Dosage: 20 MG ROUTE OF ADMIN (FREE TEXT): UNKNOWN ROUTE; ADDITIONAL INFO: ROUTE:UNKNOWN ROUTE:UNKNOWN ROUTE:
     Dates: start: 20210119, end: 20210119
  1177. DEXAMETHASONE SODIUM PHOSPHATE [Concomitant]
     Active Substance: DEXAMETHASONE SODIUM PHOSPHATE
     Dosage: 20 MG ROUTE OF ADMIN (FREE TEXT): UNKNOWN ROUTE; ADDITIONAL INFO: ROUTE:UNKNOWN ROUTE:UNKNOWN ROUTE:
     Dates: start: 20210302, end: 20210302
  1178. DEXAMETHASONE SODIUM PHOSPHATE [Concomitant]
     Active Substance: DEXAMETHASONE SODIUM PHOSPHATE
     Dosage: 20 MG ROUTE OF ADMIN (FREE TEXT): UNKNOWN ROUTE; ADDITIONAL INFO: ROUTE:UNKNOWN ROUTE:UNKNOWN ROUTE:
     Dates: start: 20210302, end: 20210302
  1179. DEXAMETHASONE SODIUM PHOSPHATE [Concomitant]
     Active Substance: DEXAMETHASONE SODIUM PHOSPHATE
     Dosage: 20 MG; ADDITIONAL INFO: ROUTE:UNKNOWN ROUTE:UNKNOWN ROUTE:UNKNOWN ROUTE:UNKNOWN
     Dates: start: 20210302, end: 20210302
  1180. DEXAMETHASONE SODIUM PHOSPHATE [Concomitant]
     Active Substance: DEXAMETHASONE SODIUM PHOSPHATE
     Dosage: 20 MG; ADDITIONAL INFO: ROUTE:UNKNOWN ROUTE:UNKNOWN ROUTE:UNKNOWN ROUTE:UNKNOWN
     Dates: start: 20210302, end: 20210302
  1181. DEXAMETHASONE SODIUM PHOSPHATE [Concomitant]
     Active Substance: DEXAMETHASONE SODIUM PHOSPHATE
     Dosage: 20 MG ROUTE OF ADMIN (FREE TEXT): UNKNOWN ROUTE; ADDITIONAL INFO: ROUTE:UNKNOWN ROUTE:UNKNOWN ROUTE:
     Dates: start: 20210209, end: 20210209
  1182. DEXAMETHASONE SODIUM PHOSPHATE [Concomitant]
     Active Substance: DEXAMETHASONE SODIUM PHOSPHATE
     Dosage: 20 MG ROUTE OF ADMIN (FREE TEXT): UNKNOWN ROUTE; ADDITIONAL INFO: ROUTE:UNKNOWN ROUTE:UNKNOWN ROUTE:
     Dates: start: 20210209, end: 20210209
  1183. DEXAMETHASONE SODIUM PHOSPHATE [Concomitant]
     Active Substance: DEXAMETHASONE SODIUM PHOSPHATE
     Dosage: 20 MG ROUTE OF ADMIN (FREE TEXT): UNKNOWN ROUTE; ADDITIONAL INFO: ROUTE:UNKNOWN ROUTE:UNKNOWN ROUTE:
     Dates: start: 20210323, end: 20210323
  1184. DEXAMETHASONE SODIUM PHOSPHATE [Concomitant]
     Active Substance: DEXAMETHASONE SODIUM PHOSPHATE
     Dosage: 20 MG ROUTE OF ADMIN (FREE TEXT): UNKNOWN ROUTE; ADDITIONAL INFO: ROUTE:UNKNOWN ROUTE:UNKNOWN ROUTE:
     Dates: start: 20210323, end: 20210323
  1185. DEXAMETHASONE SODIUM PHOSPHATE [Concomitant]
     Active Substance: DEXAMETHASONE SODIUM PHOSPHATE
     Dosage: 20 MG ROUTE OF ADMIN (FREE TEXT): UNKNOWN ROUTE; ADDITIONAL INFO: ROUTE:UNKNOWN ROUTE:UNKNOWN ROUTE:
     Dates: start: 20210119, end: 20210119
  1186. DEXAMETHASONE SODIUM PHOSPHATE [Concomitant]
     Active Substance: DEXAMETHASONE SODIUM PHOSPHATE
     Dosage: 20 MG ROUTE OF ADMIN (FREE TEXT): UNKNOWN ROUTE; ADDITIONAL INFO: ROUTE:UNKNOWN ROUTE:UNKNOWN ROUTE:
     Dates: start: 20210119, end: 20210119
  1187. DEXAMETHASONE SODIUM PHOSPHATE [Concomitant]
     Active Substance: DEXAMETHASONE SODIUM PHOSPHATE
     Dosage: 20 MG ROUTE OF ADMIN (FREE TEXT): UNKNOWN ROUTE; ADDITIONAL INFO: ROUTE:UNKNOWN ROUTE:UNKNOWN ROUTE:
     Dates: start: 20210323, end: 20210323
  1188. DEXAMETHASONE SODIUM PHOSPHATE [Concomitant]
     Active Substance: DEXAMETHASONE SODIUM PHOSPHATE
     Dosage: 20 MG ROUTE OF ADMIN (FREE TEXT): UNKNOWN ROUTE; ADDITIONAL INFO: ROUTE:UNKNOWN ROUTE:UNKNOWN ROUTE:
     Dates: start: 20210323, end: 20210323
  1189. DEXAMETHASONE SODIUM PHOSPHATE [Concomitant]
     Active Substance: DEXAMETHASONE SODIUM PHOSPHATE
     Dosage: 20 MG ROUTE OF ADMIN (FREE TEXT): UNKNOWN ROUTE; ADDITIONAL INFO: ROUTE:UNKNOWN ROUTE:UNKNOWN ROUTE:
     Dates: start: 20210323, end: 20210323
  1190. DEXAMETHASONE SODIUM PHOSPHATE [Concomitant]
     Active Substance: DEXAMETHASONE SODIUM PHOSPHATE
     Dosage: 20 MG ROUTE OF ADMIN (FREE TEXT): UNKNOWN ROUTE; ADDITIONAL INFO: ROUTE:UNKNOWN ROUTE:UNKNOWN ROUTE:
     Dates: start: 20210323, end: 20210323
  1191. DEXAMETHASONE SODIUM PHOSPHATE [Concomitant]
     Active Substance: DEXAMETHASONE SODIUM PHOSPHATE
     Dosage: DURATION: 1 DAY; ADDITIONAL INFO: ROUTE:UNKNOWN ROUTE:UNKNOWN ROUTE:UNKNOWN ROUTE:UNKNOWN
     Dates: start: 20210209, end: 20210209
  1192. DEXAMETHASONE SODIUM PHOSPHATE [Concomitant]
     Active Substance: DEXAMETHASONE SODIUM PHOSPHATE
     Dosage: DURATION: 1 DAY; ADDITIONAL INFO: ROUTE:UNKNOWN ROUTE:UNKNOWN ROUTE:UNKNOWN ROUTE:UNKNOWN
     Dates: start: 20210209, end: 20210209
  1193. DEXAMETHASONE SODIUM PHOSPHATE [Concomitant]
     Active Substance: DEXAMETHASONE SODIUM PHOSPHATE
     Dosage: 20 MG ROUTE OF ADMIN (FREE TEXT): UNKNOWN ROUTE; ADDITIONAL INFO: ROUTE:UNKNOWN ROUTE:UNKNOWN ROUTE:
     Dates: start: 20210119, end: 20210119
  1194. DEXAMETHASONE SODIUM PHOSPHATE [Concomitant]
     Active Substance: DEXAMETHASONE SODIUM PHOSPHATE
     Dosage: 20 MG ROUTE OF ADMIN (FREE TEXT): UNKNOWN ROUTE; ADDITIONAL INFO: ROUTE:UNKNOWN ROUTE:UNKNOWN ROUTE:
     Dates: start: 20210119, end: 20210119
  1195. DEXAMETHASONE SODIUM PHOSPHATE [Concomitant]
     Active Substance: DEXAMETHASONE SODIUM PHOSPHATE
     Indication: Product used for unknown indication
     Dosage: 20 MG; ADDITIONAL INFO: ROUTE:UNKNOWN ROUTE:UNKNOWN ROUTE:UNKNOWN ROUTE:UNKNOWN
     Dates: start: 20210323, end: 20210323
  1196. DEXAMETHASONE SODIUM PHOSPHATE [Concomitant]
     Active Substance: DEXAMETHASONE SODIUM PHOSPHATE
     Dosage: 20 MG; ADDITIONAL INFO: ROUTE:UNKNOWN ROUTE:UNKNOWN ROUTE:UNKNOWN ROUTE:UNKNOWN
     Dates: start: 20210323, end: 20210323
  1197. DEXAMETHASONE SODIUM PHOSPHATE [Concomitant]
     Active Substance: DEXAMETHASONE SODIUM PHOSPHATE
     Dosage: 20 MG ROUTE OF ADMIN (FREE TEXT): UNKNOWN ROUTE; ADDITIONAL INFO: ROUTE:UNKNOWN ROUTE:UNKNOWN ROUTE:
     Dates: start: 20210209, end: 20210209
  1198. DEXAMETHASONE SODIUM PHOSPHATE [Concomitant]
     Active Substance: DEXAMETHASONE SODIUM PHOSPHATE
     Dosage: 20 MG ROUTE OF ADMIN (FREE TEXT): UNKNOWN ROUTE; ADDITIONAL INFO: ROUTE:UNKNOWN ROUTE:UNKNOWN ROUTE:
     Dates: start: 20210209, end: 20210209
  1199. DEXAMETHASONE SODIUM PHOSPHATE [Concomitant]
     Active Substance: DEXAMETHASONE SODIUM PHOSPHATE
     Dosage: 20 MG ROUTE OF ADMIN (FREE TEXT): UNKNOWN ROUTE; ADDITIONAL INFO: ROUTE:UNKNOWN ROUTE:UNKNOWN ROUTE:
     Dates: start: 20210119, end: 20210119
  1200. DEXAMETHASONE SODIUM PHOSPHATE [Concomitant]
     Active Substance: DEXAMETHASONE SODIUM PHOSPHATE
     Dosage: 20 MG ROUTE OF ADMIN (FREE TEXT): UNKNOWN ROUTE; ADDITIONAL INFO: ROUTE:UNKNOWN ROUTE:UNKNOWN ROUTE:
     Dates: start: 20210119, end: 20210119
  1201. DEXAMETHASONE SODIUM PHOSPHATE [Concomitant]
     Active Substance: DEXAMETHASONE SODIUM PHOSPHATE
     Dosage: DURATION: 1 DAY; ADDITIONAL INFO: ROUTE:UNKNOWN ROUTE:UNKNOWN ROUTE:UNKNOWN ROUTE:UNKNOWN
     Dates: start: 20210119, end: 20210119
  1202. DEXAMETHASONE SODIUM PHOSPHATE [Concomitant]
     Active Substance: DEXAMETHASONE SODIUM PHOSPHATE
     Dosage: DURATION: 1 DAY; ADDITIONAL INFO: ROUTE:UNKNOWN ROUTE:UNKNOWN ROUTE:UNKNOWN ROUTE:UNKNOWN
     Dates: start: 20210119, end: 20210119
  1203. DEXAMETHASONE SODIUM PHOSPHATE [Concomitant]
     Active Substance: DEXAMETHASONE SODIUM PHOSPHATE
     Dosage: 20 MG ROUTE OF ADMIN (FREE TEXT): UNKNOWN ROUTE; ADDITIONAL INFO: ROUTE:UNKNOWN ROUTE:UNKNOWN ROUTE:
     Dates: start: 20210209, end: 20210209
  1204. DEXAMETHASONE SODIUM PHOSPHATE [Concomitant]
     Active Substance: DEXAMETHASONE SODIUM PHOSPHATE
     Dosage: 20 MG ROUTE OF ADMIN (FREE TEXT): UNKNOWN ROUTE; ADDITIONAL INFO: ROUTE:UNKNOWN ROUTE:UNKNOWN ROUTE:
     Dates: start: 20210209, end: 20210209
  1205. DEXAMETHASONE SODIUM PHOSPHATE [Concomitant]
     Active Substance: DEXAMETHASONE SODIUM PHOSPHATE
     Dosage: 20 MG; ADDITIONAL INFO: ROUTE:UNKNOWN ROUTE:UNKNOWN ROUTE:UNKNOWN ROUTE:UNKNOWN
     Dates: start: 20210302, end: 20210302
  1206. DEXAMETHASONE SODIUM PHOSPHATE [Concomitant]
     Active Substance: DEXAMETHASONE SODIUM PHOSPHATE
     Dosage: 20 MG; ADDITIONAL INFO: ROUTE:UNKNOWN ROUTE:UNKNOWN ROUTE:UNKNOWN ROUTE:UNKNOWN
     Dates: start: 20210302, end: 20210302
  1207. DEXAMETHASONE SODIUM PHOSPHATE [Concomitant]
     Active Substance: DEXAMETHASONE SODIUM PHOSPHATE
     Dosage: 20 MG ROUTE OF ADMIN (FREE TEXT): UNKNOWN ROUTE; ADDITIONAL INFO: ROUTE:UNKNOWN ROUTE:UNKNOWN ROUTE:
     Dates: start: 20210323, end: 20210323
  1208. DEXAMETHASONE SODIUM PHOSPHATE [Concomitant]
     Active Substance: DEXAMETHASONE SODIUM PHOSPHATE
     Dosage: 20 MG ROUTE OF ADMIN (FREE TEXT): UNKNOWN ROUTE; ADDITIONAL INFO: ROUTE:UNKNOWN ROUTE:UNKNOWN ROUTE:
     Dates: start: 20210323, end: 20210323
  1209. DEXAMETHASONE SODIUM PHOSPHATE [Concomitant]
     Active Substance: DEXAMETHASONE SODIUM PHOSPHATE
     Dosage: 20 MG ROUTE OF ADMIN (FREE TEXT): UNKNOWN ROUTE; ADDITIONAL INFO: ROUTE:UNKNOWN ROUTE:UNKNOWN ROUTE:
     Dates: start: 20210302, end: 20210302
  1210. DEXAMETHASONE SODIUM PHOSPHATE [Concomitant]
     Active Substance: DEXAMETHASONE SODIUM PHOSPHATE
     Dosage: 20 MG ROUTE OF ADMIN (FREE TEXT): UNKNOWN ROUTE; ADDITIONAL INFO: ROUTE:UNKNOWN ROUTE:UNKNOWN ROUTE:
     Dates: start: 20210302, end: 20210302
  1211. DEXAMETHASONE SODIUM PHOSPHATE [Concomitant]
     Active Substance: DEXAMETHASONE SODIUM PHOSPHATE
     Dosage: 20 MG ROUTE OF ADMIN (FREE TEXT): UNKNOWN ROUTE; ADDITIONAL INFO: ROUTE:UNKNOWN ROUTE:UNKNOWN ROUTE:
     Dates: start: 20210209, end: 20210209
  1212. DEXAMETHASONE SODIUM PHOSPHATE [Concomitant]
     Active Substance: DEXAMETHASONE SODIUM PHOSPHATE
     Dosage: 20 MG ROUTE OF ADMIN (FREE TEXT): UNKNOWN ROUTE; ADDITIONAL INFO: ROUTE:UNKNOWN ROUTE:UNKNOWN ROUTE:
     Dates: start: 20210209, end: 20210209
  1213. DEXAMETHASONE SODIUM PHOSPHATE [Concomitant]
     Active Substance: DEXAMETHASONE SODIUM PHOSPHATE
     Dosage: 20 MG ROUTE OF ADMIN (FREE TEXT): UNKNOWN ROUTE; ADDITIONAL INFO: ROUTE:UNKNOWN ROUTE:UNKNOWN ROUTE:
     Dates: start: 20210119, end: 20210119
  1214. DEXAMETHASONE SODIUM PHOSPHATE [Concomitant]
     Active Substance: DEXAMETHASONE SODIUM PHOSPHATE
     Dosage: 20 MG ROUTE OF ADMIN (FREE TEXT): UNKNOWN ROUTE; ADDITIONAL INFO: ROUTE:UNKNOWN ROUTE:UNKNOWN ROUTE:
     Dates: start: 20210119, end: 20210119
  1215. DEXAMETHASONE SODIUM PHOSPHATE [Concomitant]
     Active Substance: DEXAMETHASONE SODIUM PHOSPHATE
     Dosage: 20 MG ROUTE OF ADMIN (FREE TEXT): UNKNOWN ROUTE; ADDITIONAL INFO: ROUTE:UNKNOWN ROUTE:UNKNOWN ROUTE:
     Dates: start: 20210323, end: 20210323
  1216. DEXAMETHASONE SODIUM PHOSPHATE [Concomitant]
     Active Substance: DEXAMETHASONE SODIUM PHOSPHATE
     Dosage: 20 MG ROUTE OF ADMIN (FREE TEXT): UNKNOWN ROUTE; ADDITIONAL INFO: ROUTE:UNKNOWN ROUTE:UNKNOWN ROUTE:
     Dates: start: 20210323, end: 20210323
  1217. DEXAMETHASONE SODIUM PHOSPHATE [Concomitant]
     Active Substance: DEXAMETHASONE SODIUM PHOSPHATE
     Dosage: 20 MG; ADDITIONAL INFO: ROUTE:UNKNOWN ROUTE:UNKNOWN ROUTE:UNKNOWN ROUTE:UNKNOWN
     Dates: start: 20210323, end: 20210323
  1218. DEXAMETHASONE SODIUM PHOSPHATE [Concomitant]
     Active Substance: DEXAMETHASONE SODIUM PHOSPHATE
     Dosage: 20 MG; ADDITIONAL INFO: ROUTE:UNKNOWN ROUTE:UNKNOWN ROUTE:UNKNOWN ROUTE:UNKNOWN
     Dates: start: 20210323, end: 20210323
  1219. DEXAMETHASONE SODIUM PHOSPHATE [Concomitant]
     Active Substance: DEXAMETHASONE SODIUM PHOSPHATE
     Dosage: 20 MG ROUTE OF ADMIN (FREE TEXT): UNKNOWN ROUTE; ADDITIONAL INFO: ROUTE:UNKNOWN ROUTE:UNKNOWN ROUTE:
     Dates: start: 20210209, end: 20210209
  1220. DEXAMETHASONE SODIUM PHOSPHATE [Concomitant]
     Active Substance: DEXAMETHASONE SODIUM PHOSPHATE
     Dosage: 20 MG ROUTE OF ADMIN (FREE TEXT): UNKNOWN ROUTE; ADDITIONAL INFO: ROUTE:UNKNOWN ROUTE:UNKNOWN ROUTE:
     Dates: start: 20210209, end: 20210209
  1221. DEXAMETHASONE SODIUM PHOSPHATE [Concomitant]
     Active Substance: DEXAMETHASONE SODIUM PHOSPHATE
     Dosage: 20 MG ROUTE OF ADMIN (FREE TEXT): UNKNOWN ROUTE; ADDITIONAL INFO: ROUTE:UNKNOWN ROUTE:UNKNOWN ROUTE:
     Dates: start: 20210323, end: 20210323
  1222. DEXAMETHASONE SODIUM PHOSPHATE [Concomitant]
     Active Substance: DEXAMETHASONE SODIUM PHOSPHATE
     Dosage: 20 MG ROUTE OF ADMIN (FREE TEXT): UNKNOWN ROUTE; ADDITIONAL INFO: ROUTE:UNKNOWN ROUTE:UNKNOWN ROUTE:
     Dates: start: 20210323, end: 20210323
  1223. DEXAMETHASONE SODIUM PHOSPHATE [Concomitant]
     Active Substance: DEXAMETHASONE SODIUM PHOSPHATE
     Dosage: 20 MG ROUTE OF ADMIN (FREE TEXT): UNKNOWN ROUTE; ADDITIONAL INFO: ROUTE:UNKNOWN ROUTE:UNKNOWN ROUTE:
     Dates: start: 20210302, end: 20210302
  1224. DEXAMETHASONE SODIUM PHOSPHATE [Concomitant]
     Active Substance: DEXAMETHASONE SODIUM PHOSPHATE
     Dosage: 20 MG ROUTE OF ADMIN (FREE TEXT): UNKNOWN ROUTE; ADDITIONAL INFO: ROUTE:UNKNOWN ROUTE:UNKNOWN ROUTE:
     Dates: start: 20210302, end: 20210302
  1225. DEXAMETHASONE SODIUM PHOSPHATE [Concomitant]
     Active Substance: DEXAMETHASONE SODIUM PHOSPHATE
     Dosage: 20 MG ROUTE OF ADMIN (FREE TEXT): UNKNOWN ROUTE; ADDITIONAL INFO: ROUTE:UNKNOWN ROUTE:UNKNOWN ROUTE:
     Dates: start: 20210119, end: 20210119
  1226. DEXAMETHASONE SODIUM PHOSPHATE [Concomitant]
     Active Substance: DEXAMETHASONE SODIUM PHOSPHATE
     Dosage: 20 MG ROUTE OF ADMIN (FREE TEXT): UNKNOWN ROUTE; ADDITIONAL INFO: ROUTE:UNKNOWN ROUTE:UNKNOWN ROUTE:
     Dates: start: 20210119, end: 20210119
  1227. DEXAMETHASONE SODIUM PHOSPHATE [Concomitant]
     Active Substance: DEXAMETHASONE SODIUM PHOSPHATE
     Dosage: DURATION: 1 DAY; ADDITIONAL INFO: ROUTE:UNKNOWN ROUTE:UNKNOWN ROUTE:UNKNOWN ROUTE:UNKNOWN
     Dates: start: 20210323, end: 20210323
  1228. DEXAMETHASONE SODIUM PHOSPHATE [Concomitant]
     Active Substance: DEXAMETHASONE SODIUM PHOSPHATE
     Dosage: DURATION: 1 DAY; ADDITIONAL INFO: ROUTE:UNKNOWN ROUTE:UNKNOWN ROUTE:UNKNOWN ROUTE:UNKNOWN
     Dates: start: 20210323, end: 20210323
  1229. DEXAMETHASONE SODIUM PHOSPHATE [Concomitant]
     Active Substance: DEXAMETHASONE SODIUM PHOSPHATE
     Dosage: 20 MG ROUTE OF ADMIN (FREE TEXT): UNKNOWN ROUTE; ADDITIONAL INFO: ROUTE:UNKNOWN ROUTE:UNKNOWN ROUTE:
     Dates: start: 20210323, end: 20210323
  1230. DEXAMETHASONE SODIUM PHOSPHATE [Concomitant]
     Active Substance: DEXAMETHASONE SODIUM PHOSPHATE
     Dosage: 20 MG ROUTE OF ADMIN (FREE TEXT): UNKNOWN ROUTE; ADDITIONAL INFO: ROUTE:UNKNOWN ROUTE:UNKNOWN ROUTE:
     Dates: start: 20210323, end: 20210323
  1231. DEXAMETHASONE SODIUM PHOSPHATE [Concomitant]
     Active Substance: DEXAMETHASONE SODIUM PHOSPHATE
     Dosage: 20 MG ROUTE OF ADMIN (FREE TEXT): UNKNOWN ROUTE; ADDITIONAL INFO: ROUTE:UNKNOWN ROUTE:UNKNOWN ROUTE:
     Dates: start: 20210209, end: 20210209
  1232. DEXAMETHASONE SODIUM PHOSPHATE [Concomitant]
     Active Substance: DEXAMETHASONE SODIUM PHOSPHATE
     Dosage: 20 MG ROUTE OF ADMIN (FREE TEXT): UNKNOWN ROUTE; ADDITIONAL INFO: ROUTE:UNKNOWN ROUTE:UNKNOWN ROUTE:
     Dates: start: 20210209, end: 20210209
  1233. DEXAMETHASONE SODIUM PHOSPHATE [Concomitant]
     Active Substance: DEXAMETHASONE SODIUM PHOSPHATE
     Dosage: DURATION: 1 DAY; ADDITIONAL INFO: ROUTE:UNKNOWN ROUTE:UNKNOWN ROUTE:UNKNOWN ROUTE:UNKNOWN
     Dates: start: 20210302, end: 20210302
  1234. DEXAMETHASONE SODIUM PHOSPHATE [Concomitant]
     Active Substance: DEXAMETHASONE SODIUM PHOSPHATE
     Dosage: DURATION: 1 DAY; ADDITIONAL INFO: ROUTE:UNKNOWN ROUTE:UNKNOWN ROUTE:UNKNOWN ROUTE:UNKNOWN
     Dates: start: 20210302, end: 20210302
  1235. DEXAMETHASONE SODIUM PHOSPHATE [Concomitant]
     Active Substance: DEXAMETHASONE SODIUM PHOSPHATE
     Dosage: 20 MG ROUTE OF ADMIN (FREE TEXT): UNKNOWN ROUTE; ADDITIONAL INFO: ROUTE:UNKNOWN ROUTE:UNKNOWN ROUTE:
     Dates: start: 20210119, end: 20210119
  1236. DEXAMETHASONE SODIUM PHOSPHATE [Concomitant]
     Active Substance: DEXAMETHASONE SODIUM PHOSPHATE
     Dosage: 20 MG ROUTE OF ADMIN (FREE TEXT): UNKNOWN ROUTE; ADDITIONAL INFO: ROUTE:UNKNOWN ROUTE:UNKNOWN ROUTE:
     Dates: start: 20210119, end: 20210119
  1237. DEXAMETHASONE SODIUM PHOSPHATE [Concomitant]
     Active Substance: DEXAMETHASONE SODIUM PHOSPHATE
     Dosage: 20 MGUNK; ADDITIONAL INFO: ROUTE:UNKNOWN ROUTE:UNKNOWN ROUTE:UNKNOWN ROUTE:UNKNOWN
     Dates: start: 20210323, end: 20210323
  1238. DEXAMETHASONE SODIUM PHOSPHATE [Concomitant]
     Active Substance: DEXAMETHASONE SODIUM PHOSPHATE
     Dosage: 20 MGUNK; ADDITIONAL INFO: ROUTE:UNKNOWN ROUTE:UNKNOWN ROUTE:UNKNOWN ROUTE:UNKNOWN
     Dates: start: 20210323, end: 20210323
  1239. DEXAMETHASONE SODIUM PHOSPHATE [Concomitant]
     Active Substance: DEXAMETHASONE SODIUM PHOSPHATE
     Dosage: 20 MG ROUTE OF ADMIN (FREE TEXT): UNKNOWN ROUTE; ADDITIONAL INFO: ROUTE:UNKNOWN ROUTE:UNKNOWN ROUTE:
     Dates: start: 20210302, end: 20210302
  1240. DEXAMETHASONE SODIUM PHOSPHATE [Concomitant]
     Active Substance: DEXAMETHASONE SODIUM PHOSPHATE
     Dosage: 20 MG ROUTE OF ADMIN (FREE TEXT): UNKNOWN ROUTE; ADDITIONAL INFO: ROUTE:UNKNOWN ROUTE:UNKNOWN ROUTE:
     Dates: start: 20210302, end: 20210302
  1241. DEXAMETHASONE SODIUM PHOSPHATE [Concomitant]
     Active Substance: DEXAMETHASONE SODIUM PHOSPHATE
     Dosage: 20 MG ROUTE OF ADMIN (FREE TEXT): UNKNOWN ROUTE; ADDITIONAL INFO: ROUTE:UNKNOWN ROUTE:UNKNOWN ROUTE:
     Dates: start: 20210302, end: 20210302
  1242. DEXAMETHASONE SODIUM PHOSPHATE [Concomitant]
     Active Substance: DEXAMETHASONE SODIUM PHOSPHATE
     Dosage: 20 MG ROUTE OF ADMIN (FREE TEXT): UNKNOWN ROUTE; ADDITIONAL INFO: ROUTE:UNKNOWN ROUTE:UNKNOWN ROUTE:
     Dates: start: 20210302, end: 20210302
  1243. DEXAMETHASONE SODIUM PHOSPHATE [Concomitant]
     Active Substance: DEXAMETHASONE SODIUM PHOSPHATE
     Dosage: 20 MG; ADDITIONAL INFO: ROUTE:UNKNOWN ROUTE:UNKNOWN ROUTE:UNKNOWN ROUTE:UNKNOWN
     Dates: start: 20210209, end: 20210209
  1244. DEXAMETHASONE SODIUM PHOSPHATE [Concomitant]
     Active Substance: DEXAMETHASONE SODIUM PHOSPHATE
     Dosage: 20 MG; ADDITIONAL INFO: ROUTE:UNKNOWN ROUTE:UNKNOWN ROUTE:UNKNOWN ROUTE:UNKNOWN
     Dates: start: 20210209, end: 20210209
  1245. DEXAMETHASONE SODIUM PHOSPHATE [Concomitant]
     Active Substance: DEXAMETHASONE SODIUM PHOSPHATE
     Indication: Product used for unknown indication
     Dosage: 20 MG ROUTE OF ADMIN (FREE TEXT): UNKNOWN ROUTE;  ADDITIONAL INFO: ROUTE:UNKNOWN ROUTE:UNKNOWN ROUTE
     Dates: start: 20210323, end: 20210323
  1246. DEXAMETHASONE SODIUM PHOSPHATE [Concomitant]
     Active Substance: DEXAMETHASONE SODIUM PHOSPHATE
     Dosage: 20 MG ROUTE OF ADMIN (FREE TEXT): UNKNOWN ROUTE;  ADDITIONAL INFO: ROUTE:UNKNOWN ROUTE:UNKNOWN ROUTE
     Dates: start: 20210323, end: 20210323
  1247. DEXAMETHASONE SODIUM PHOSPHATE [Concomitant]
     Active Substance: DEXAMETHASONE SODIUM PHOSPHATE
     Dosage: 20 MG ROUTE OF ADMIN (FREE TEXT): UNKNOWN ROUTE;  ADDITIONAL INFO: ROUTE:UNKNOWN ROUTE:UNKNOWN ROUTE
     Dates: start: 20210302, end: 20210302
  1248. DEXAMETHASONE SODIUM PHOSPHATE [Concomitant]
     Active Substance: DEXAMETHASONE SODIUM PHOSPHATE
     Dosage: 20 MG ROUTE OF ADMIN (FREE TEXT): UNKNOWN ROUTE;  ADDITIONAL INFO: ROUTE:UNKNOWN ROUTE:UNKNOWN ROUTE
     Dates: start: 20210302, end: 20210302
  1249. DEXAMETHASONE SODIUM PHOSPHATE [Concomitant]
     Active Substance: DEXAMETHASONE SODIUM PHOSPHATE
     Dosage: 20 MG; ADDITIONAL INFO: ROUTE:UNKNOWN ROUTE:UNKNOWN ROUTE:UNKNOWN ROUTE:UNKNOWN
     Dates: start: 20210119, end: 20210119
  1250. DEXAMETHASONE SODIUM PHOSPHATE [Concomitant]
     Active Substance: DEXAMETHASONE SODIUM PHOSPHATE
     Dosage: 20 MG; ADDITIONAL INFO: ROUTE:UNKNOWN ROUTE:UNKNOWN ROUTE:UNKNOWN ROUTE:UNKNOWN
     Dates: start: 20210119, end: 20210119
  1251. DEXAMETHASONE SODIUM PHOSPHATE [Concomitant]
     Active Substance: DEXAMETHASONE SODIUM PHOSPHATE
     Dosage: DURATION: 1 DAY; ADDITIONAL INFO: ROUTE:UNKNOWN ROUTE:UNKNOWN ROUTE:UNKNOWN ROUTE:UNKNOWN
     Dates: start: 20210209, end: 20210209
  1252. DEXAMETHASONE SODIUM PHOSPHATE [Concomitant]
     Active Substance: DEXAMETHASONE SODIUM PHOSPHATE
     Dosage: DURATION: 1 DAY; ADDITIONAL INFO: ROUTE:UNKNOWN ROUTE:UNKNOWN ROUTE:UNKNOWN ROUTE:UNKNOWN
     Dates: start: 20210209, end: 20210209
  1253. DEXAMETHASONE SODIUM PHOSPHATE [Concomitant]
     Active Substance: DEXAMETHASONE SODIUM PHOSPHATE
     Dosage: 20 MG, UNK; ADDITIONAL INFO: ROUTE:UNKNOWN ROUTE:UNKNOWN ROUTE:UNKNOWN ROUTE:UNKNOWN
     Route: 042
     Dates: start: 20210209, end: 20210209
  1254. DEXAMETHASONE SODIUM PHOSPHATE [Concomitant]
     Active Substance: DEXAMETHASONE SODIUM PHOSPHATE
     Dosage: 20 MG, UNK; ADDITIONAL INFO: ROUTE:UNKNOWN ROUTE:UNKNOWN ROUTE:UNKNOWN ROUTE:UNKNOWN
     Route: 042
     Dates: start: 20210209, end: 20210209
  1255. OMEPRAZOLE [Concomitant]
     Active Substance: OMEPRAZOLE
     Indication: Product used for unknown indication
     Dosage: UNK
  1256. OMEPRAZOLE [Concomitant]
     Active Substance: OMEPRAZOLE
     Indication: Gastrointestinal disorder prophylaxis
     Dosage: UNK
     Route: 050
     Dates: start: 20201118
  1257. OMEPRAZOLE [Concomitant]
     Active Substance: OMEPRAZOLE
     Dosage: UNK
     Route: 065
  1258. SARS-COV-2 VACCINE [Concomitant]
     Indication: Product used for unknown indication
  1259. PREDNISOLONE [Concomitant]
     Active Substance: PREDNISOLONE
     Indication: Diffuse large B-cell lymphoma
     Dosage: UNK
     Route: 050
     Dates: start: 20201118, end: 20201122
  1260. PREDNISOLONE [Concomitant]
     Active Substance: PREDNISOLONE
     Indication: Product used for unknown indication
     Dosage: UNK
     Route: 065
  1261. PREDNISOLONE [Concomitant]
     Active Substance: PREDNISOLONE
     Dosage: DOSAGE TEXT: 100 MG, DATE OF MOST RECENT DOSE PRIOR TO FIRST EPISODE OF NEUTROPENIA 24/NOV/202. DATE
     Route: 050
     Dates: start: 20201124
  1262. PREDNISOLONE [Concomitant]
     Active Substance: PREDNISOLONE
     Dosage: UNK
     Route: 050
     Dates: start: 20201124
  1263. ALLOPURINOL [Concomitant]
     Active Substance: ALLOPURINOL
     Indication: Prophylaxis
     Dosage: UNK
     Route: 050
     Dates: start: 20201118
  1264. CODEINE [Concomitant]
     Active Substance: CODEINE
     Indication: Pain
     Dosage: 30 MG, AS NECESSARY
     Route: 065
     Dates: start: 20201224, end: 20201224
  1265. CODEINE [Concomitant]
     Active Substance: CODEINE
     Dosage: UNK
     Route: 050
     Dates: start: 20201123
  1266. ACETAMINOPHEN [Concomitant]
     Active Substance: ACETAMINOPHEN
     Indication: Prophylaxis
     Dosage: 1000 MG (ADDITIONAL INFORMATION ON DRUG (FREE TEXT): ADDITIONAL INFO: ROUTE:UNKNOWN ROUTE:UNKNOWN RO
     Route: 050
     Dates: start: 20210119, end: 20210119
  1267. ACETAMINOPHEN [Concomitant]
     Active Substance: ACETAMINOPHEN
     Dosage: 1000 MG (ADDITIONAL INFORMATION ON DRUG (FREE TEXT): ADDITIONAL INFO: ROUTE:UNKNOWN ROUTE:UNKNOWN RO
     Route: 050
     Dates: start: 20210216, end: 20210216
  1268. ACETAMINOPHEN [Concomitant]
     Active Substance: ACETAMINOPHEN
     Dosage: 1000 MG (ADDITIONAL INFORMATION ON DRUG (FREE TEXT): ADDITIONAL INFO: ROUTE:UNKNOWN ROUTE:UNKNOWN RO
     Route: 050
     Dates: start: 20201124, end: 20201124
  1269. ACETAMINOPHEN [Concomitant]
     Active Substance: ACETAMINOPHEN
     Dosage: 1000 MG (ADDITIONAL INFORMATION ON DRUG (FREE TEXT): ADDITIONAL INFO: ROUTE:UNKNOWN ROUTE:UNKNOWN RO
     Route: 050
     Dates: start: 20210126, end: 20210126
  1270. ACETAMINOPHEN [Concomitant]
     Active Substance: ACETAMINOPHEN
     Dosage: 1000 MG (ADDITIONAL INFORMATION ON DRUG (FREE TEXT): ADDITIONAL INFO: ROUTE:UNKNOWN ROUTE:UNKNOWN RO
     Route: 050
     Dates: start: 20210323, end: 20210323
  1271. ACETAMINOPHEN [Concomitant]
     Active Substance: ACETAMINOPHEN
     Dosage: 100 MG (ADDITIONAL INFORMATION ON DRUG (FREE TEXT): ADDITIONAL INFO: ROUTE:UNKNOWN ROUTE:UNKNOWN ROU
     Route: 050
     Dates: start: 20210126, end: 20210126
  1272. ACETAMINOPHEN [Concomitant]
     Active Substance: ACETAMINOPHEN
     Dosage: 1000 MG DURATION: 1 DAY; (ADDITIONAL INFORMATION ON DRUG (FREE TEXT): ADDITIONAL INFO: ROUTE:UNKNOWN
     Route: 050
     Dates: start: 20210309, end: 20210309
  1273. ACETAMINOPHEN [Concomitant]
     Active Substance: ACETAMINOPHEN
     Dosage: UNK (ADDITIONAL INFORMATION ON DRUG (FREE TEXT): ADDITIONAL INFO: ROUTE:UNKNOWN ROUTE:UNKNOWN ROUTE:
     Route: 050
     Dates: start: 20201123
  1274. ACETAMINOPHEN [Concomitant]
     Active Substance: ACETAMINOPHEN
     Dosage: 1000 MG (ADDITIONAL INFORMATION ON DRUG (FREE TEXT): ADDITIONAL INFO: ROUTE:UNKNOWN ROUTE:UNKNOWN RO
     Route: 050
     Dates: start: 20201215, end: 20201215
  1275. ACETAMINOPHEN [Concomitant]
     Active Substance: ACETAMINOPHEN
     Dosage: 1000 MG (ADDITIONAL INFORMATION ON DRUG (FREE TEXT): ADDITIONAL INFO: ROUTE:UNKNOWN ROUTE:UNKNOWN RO
     Route: 050
     Dates: start: 20210302, end: 20210302
  1276. ACETAMINOPHEN [Concomitant]
     Active Substance: ACETAMINOPHEN
     Dosage: 1000 MG (ADDITIONAL INFORMATION ON DRUG (FREE TEXT): ADDITIONAL INFO: ROUTE:UNKNOWN ROUTE:UNKNOWN RO
     Route: 050
     Dates: start: 20210209, end: 20210209
  1277. SENNA [Concomitant]
     Active Substance: SENNA LEAF\SENNOSIDES\SENNOSIDES A AND B
     Indication: Constipation
     Dosage: UNK
     Route: 050
     Dates: start: 20201124
  1278. CHLORPHENIRAMINE MALEATE [Concomitant]
     Active Substance: CHLORPHENIRAMINE MALEATE
     Indication: Prophylaxis
     Dosage: 10 MG
     Route: 050
     Dates: start: 20210209, end: 20210209
  1279. CHLORPHENIRAMINE MALEATE [Concomitant]
     Active Substance: CHLORPHENIRAMINE MALEATE
     Indication: Rash maculo-papular
     Dosage: 10 MG
     Route: 050
     Dates: start: 20201215, end: 20201215
  1280. CHLORPHENIRAMINE MALEATE [Concomitant]
     Active Substance: CHLORPHENIRAMINE MALEATE
     Dosage: 10 MG
     Route: 065
     Dates: start: 20201217
  1281. CHLORPHENIRAMINE MALEATE [Concomitant]
     Active Substance: CHLORPHENIRAMINE MALEATE
     Dosage: 10 MG
     Route: 050
     Dates: start: 20210302, end: 20210302
  1282. CHLORPHENIRAMINE MALEATE [Concomitant]
     Active Substance: CHLORPHENIRAMINE MALEATE
     Dosage: 10 MG
     Route: 050
     Dates: start: 20210126, end: 20210126
  1283. CHLORPHENIRAMINE MALEATE [Concomitant]
     Active Substance: CHLORPHENIRAMINE MALEATE
     Dosage: 10 MG, EVERY 3 WEEK, DOSE LAST STUDY DRUG ADMIN PRIOR AE 1260 MG START AD END DATE OF MOST RECENT DO
     Route: 050
     Dates: start: 20201124, end: 20201124
  1284. CHLORPHENIRAMINE MALEATE [Concomitant]
     Active Substance: CHLORPHENIRAMINE MALEATE
     Dosage: 10 MG
     Route: 050
     Dates: start: 20210309, end: 20210309
  1285. CHLORPHENIRAMINE MALEATE [Concomitant]
     Active Substance: CHLORPHENIRAMINE MALEATE
     Dosage: 10 MG
     Route: 050
     Dates: start: 20210216, end: 20210216
  1286. CHLORPHENIRAMINE MALEATE [Concomitant]
     Active Substance: CHLORPHENIRAMINE MALEATE
     Dosage: 10 MG
     Route: 050
     Dates: start: 20210119, end: 20210119
  1287. CHLORPHENIRAMINE MALEATE [Concomitant]
     Active Substance: CHLORPHENIRAMINE MALEATE
     Dosage: 10 MG
     Route: 050
     Dates: start: 20210323, end: 20210323
  1288. DEXAMETHASONE [Concomitant]
     Active Substance: DEXAMETHASONE
     Indication: Product used for unknown indication
     Dosage: 20 MILLIGRAM, UNK
     Route: 042
     Dates: start: 20210209, end: 20210209
  1289. DEXAMETHASONE [Concomitant]
     Active Substance: DEXAMETHASONE
     Dosage: 20 MILLIGRAM, UNK
     Route: 042
     Dates: start: 20210302, end: 20210302
  1290. DEXAMETHASONE [Concomitant]
     Active Substance: DEXAMETHASONE
     Dosage: 20 MILLIGRAM, UNK
     Route: 042
     Dates: start: 20210119, end: 20210119
  1291. DEXAMETHASONE [Concomitant]
     Active Substance: DEXAMETHASONE
     Dosage: 20 MG, DURATION: 1 DAY
     Route: 050
     Dates: start: 20210323, end: 20210323
  1292. PREDNISOLONE [Concomitant]
     Active Substance: PREDNISOLONE
     Indication: Product used for unknown indication
     Dosage: UNK
     Route: 050
     Dates: start: 20201118, end: 20201122
  1293. SENOKOT [Concomitant]
     Active Substance: SENNOSIDES
     Indication: Constipation
     Dosage: UNK, SENNA PODS POWDERED
     Route: 065
  1294. FILGRASTIM [Concomitant]
     Active Substance: FILGRASTIM
     Indication: Prophylaxis
     Dosage: UNK
     Route: 065
     Dates: start: 20201220
  1295. FILGRASTIM [Concomitant]
     Active Substance: FILGRASTIM
     Dosage: UNK
     Route: 065
     Dates: start: 20201129, end: 20201206

REACTIONS (7)
  - Death [Fatal]
  - Neutropenia [Recovered/Resolved]
  - Off label use [Unknown]
  - Product use in unapproved indication [Unknown]
  - Product use issue [Unknown]
  - Overdose [Unknown]
  - Underdose [Unknown]

NARRATIVE: CASE EVENT DATE: 20201124
